FAERS Safety Report 22297432 (Version 3)
Quarter: 2023Q2

REPORT INFORMATION
  Report Type: Report from Study
  Country: GB (occurrence: GB)
  Receive Date: 20230509
  Receipt Date: 20230616
  Transmission Date: 20230721
  Serious: Yes (Death, Hospitalization, Other)
  Sender: FDA-Public Use
  Company Number: GB-CELLTRION INC.-2021GB019426

PATIENT

DRUGS (975)
  1. TRASTUZUMAB [Suspect]
     Active Substance: TRASTUZUMAB
     Indication: HER2 positive breast cancer
     Dosage: 567 MG, QD (LOADING DOSE) (DOSE FORM: 293)/LOADING DOSE, INFUSION, SOLUTION. THERAPY START AND END D
     Route: 042
     Dates: start: 20160609, end: 20160609
  2. TRASTUZUMAB [Suspect]
     Active Substance: TRASTUZUMAB
     Indication: Breast cancer metastatic
     Dosage: 451.5 MG, EVERY 3 WEEKS (DOSE FORM: 293)/451.5 MG EVERY 3 WEEKS (DOSE FORM: 230) (CUMULATIVE DOSE: 1
     Route: 042
     Dates: start: 20161021, end: 20161111
  3. TRASTUZUMAB [Suspect]
     Active Substance: TRASTUZUMAB
     Dosage: 451.5 MILLIGRAM, Q3W, START02-DEC-2016
     Route: 042
     Dates: start: 20161202, end: 20170203
  4. TRASTUZUMAB [Suspect]
     Active Substance: TRASTUZUMAB
     Dosage: 420 MG, EVERY 3 WEEKS (DOSE FORM: 293)/420 MILLIGRAM, Q3W (3 TIMES/WK) (CUMULATIVE DOSE TO FIRST REA
     Route: 042
     Dates: start: 20160701, end: 20200727
  5. TRASTUZUMAB [Suspect]
     Active Substance: TRASTUZUMAB
     Dosage: 451.5 MG, EVERY 3 WEEKS/ THERAPY START DATE: 28-APR-2017 AND STOP DATE: 19-MAY-2017 (CUMULATIVE DOSE
     Route: 042
     Dates: start: 20170428, end: 20170519
  6. TRASTUZUMAB [Suspect]
     Active Substance: TRASTUZUMAB
     Dosage: 472.5 MG, EVERY 3 WEEKS(MOST RECENT DOSE ON 28/DEC/2017)/THERAPY START DATE: 12-JUN-2017, STOP DATE:
     Route: 042
     Dates: start: 20170612, end: 20171228
  7. TRASTUZUMAB [Suspect]
     Active Substance: TRASTUZUMAB
     Dosage: 420 MG, EVERY 3 WEEKS (DOSE FORM: 293)/THERAPY START DATE: 07-SEP-2016 AND THERAPY END DATE: 26-SEP-
     Route: 042
     Dates: start: 20160907, end: 20160926
  8. TRASTUZUMAB [Suspect]
     Active Substance: TRASTUZUMAB
     Dosage: 451.5 MILLIGRAM, 3 TIMES/WK (PHARMACEUTICAL DOSE FORM: 200) (CUMULATIVE DOSE: 21680.062)
     Route: 042
     Dates: start: 20161111, end: 20170519
  9. TRASTUZUMAB [Suspect]
     Active Substance: TRASTUZUMAB
     Dosage: 451.5 MG, EVERY 3 WEEKS
     Route: 042
     Dates: start: 20161202, end: 20170203
  10. TRASTUZUMAB [Suspect]
     Active Substance: TRASTUZUMAB
     Dosage: 472.5 MG, EVERY 3 WEEKS (DOSE FORM: 293)/472.5 MILLIGRAM, Q3W, LOADING DOSE/ INFUSION, SOLUTION. THE
     Route: 042
     Dates: start: 20170519, end: 20171228
  11. TRASTUZUMAB [Suspect]
     Active Substance: TRASTUZUMAB
     Dosage: 420 MG, EVERY 3 WEEKS (DOSE FORM: 293)/THERAPY START DATE: 24-FEB-2017, STOP DATE: 07-APR-2017 (CUMU
     Route: 042
     Dates: start: 20170224, end: 20170407
  12. TRASTUZUMAB [Suspect]
     Active Substance: TRASTUZUMAB
     Dosage: 280 MILLIGRAM, Q3WK (PHARMACEUTICAL DOSE FORM: 200) (CUMULATIVE DOSE: 66965.0 MG)
     Route: 042
     Dates: start: 20180131, end: 20180131
  13. TRASTUZUMAB [Suspect]
     Active Substance: TRASTUZUMAB
     Dosage: 430.5 MILLIGRAM, 3 TIMES/WK (DOSAGE FORM: 200) (CUMULATIVE DOSE: 39997.68 MG)
     Route: 042
     Dates: start: 20170224
  14. TRASTUZUMAB [Suspect]
     Active Substance: TRASTUZUMAB
     Dosage: 441 MG (DOSAGE FORM: 200)/ THERAPY START DATE: 02-FEB-2016 AND STOP DATE: 03-FEB-2017 (CUMULATIVE DO
     Route: 042
     Dates: start: 20160202, end: 20170203
  15. TRASTUZUMAB [Suspect]
     Active Substance: TRASTUZUMAB
     Dosage: 420 MILLIGRAM, 3 TIMES/WK (DOSAGE FORM: 200) (CUMULATIVE DOSE: 39067.5 MG)
     Route: 042
     Dates: start: 20170224, end: 20170407
  16. TRASTUZUMAB [Suspect]
     Active Substance: TRASTUZUMAB
     Dosage: 441 MG, EVERY 3 WEEKS (PHARMACEUTICAL DOSE FORM: 230) (CUMULATIVE DOSE: 987.0 MG)
     Route: 042
     Dates: start: 20160907, end: 20160926
  17. TRASTUZUMAB [Suspect]
     Active Substance: TRASTUZUMAB
     Dosage: 72.5 MILLIGRAM, 3 TIMES/WK (PHARMACEUTICAL DOSE FORM: 200)
     Dates: start: 20170612
  18. TRASTUZUMAB [Suspect]
     Active Substance: TRASTUZUMAB
     Dosage: 451.5 MILLIGRAM, 3 TIMES/WK (PHARMACEUTICAL DOSE FORM: 200) (CUMULATIVE DOSE: 54180.0MG)
     Route: 042
     Dates: start: 20170428, end: 20170519
  19. TRASTUZUMAB [Suspect]
     Active Substance: TRASTUZUMAB
     Dosage: 451.5 MILLIGRAM, 3 TIMES/WK (PHARMACEUTICAL DOSE FORM: 200) (CUMULATIVE DOSE: 25743.562MG)
     Route: 042
     Dates: start: 20161202, end: 20170203
  20. TRASTUZUMAB [Suspect]
     Active Substance: TRASTUZUMAB
     Dosage: 420 MILLIGRAM, 3 TIMES/WK (PHARMACEUTICAL DOSE FORM: 200) (CUMULATIVE DOSE: 8460.0MG)
     Route: 042
     Dates: start: 20160907, end: 20160926
  21. TRASTUZUMAB [Suspect]
     Active Substance: TRASTUZUMAB
     Dosage: 441 MILLIGRAM (PHARMACEUTICAL DOSE FORM: 200)/THERAPY START DATE: 02-FEB-2016 AND STOP DATE: 03-FEB-
     Route: 042
     Dates: start: 20160202, end: 20160203
  22. TRASTUZUMAB [Suspect]
     Active Substance: TRASTUZUMAB
     Dosage: 451.5 MILLIGRAM, 3 TIMES/WK (DOSE FORM: 200) (CUMULATIVE DOSE: 17608.5MG)
     Route: 042
     Dates: start: 20161021, end: 20161111
  23. TRASTUZUMAB [Suspect]
     Active Substance: TRASTUZUMAB
     Dosage: 441 MILLIGRAM, 3 DOSE PER 1W (DOSE FORM: 200) (CUMULATIVE DOSE: 8883.0MG)
     Route: 042
     Dates: start: 20160907, end: 20160926
  24. TRASTUZUMAB [Suspect]
     Active Substance: TRASTUZUMAB
     Dosage: 472.5 MILLIGRAM, 3 TIMES/WK (DOSE FORM: 200) (CUMULATIVE DOSE: 65812.5MG)
     Route: 042
     Dates: start: 20170612
  25. TRASTUZUMAB [Suspect]
     Active Substance: TRASTUZUMAB
     Dosage: INFUSION, SOLUTION (DOSE FORM: 293)
     Route: 042
     Dates: start: 20161111, end: 20170519
  26. TRASTUZUMAB [Suspect]
     Active Substance: TRASTUZUMAB
     Dosage: 420 MG EVERY 3 WEEKS (DOSE FORM: 230) (CUMULATIVE DOSE: 4340.8335MG)
     Route: 042
     Dates: start: 20170224, end: 20170407
  27. TRASTUZUMAB [Suspect]
     Active Substance: TRASTUZUMAB
     Dosage: 451.5 MG EVERY 3 WEEKS (DOSE FORM: 230) (CUMULATIVE DOSE: 1955.5MG)
     Route: 042
     Dates: start: 20161021, end: 20161111
  28. TRASTUZUMAB [Suspect]
     Active Substance: TRASTUZUMAB
     Dosage: 472.5 MG EVERY 3 WEEKS (MOST RECENT DOSE ON 28/DEC/2017) (DOSE FORM: 230) (CUMULATIVE DOSE: 7312.5MG
     Route: 042
     Dates: start: 20170612
  29. TRASTUZUMAB [Suspect]
     Active Substance: TRASTUZUMAB
     Dosage: 472.5 MG EVERY 3 WEEKS (LOADING DOSE) (DOSE FORM: 230) (CUMULATIVE DOSE: 6772.5MG)
     Route: 042
     Dates: start: 20170519, end: 20171228
  30. TRASTUZUMAB [Suspect]
     Active Substance: TRASTUZUMAB
     Dosage: 451.5 MG EVERY 3 WEEKS (DOSE FORM: 230) (CUMULATIVE DOSE: 6020MG)
     Route: 042
     Dates: start: 20170428, end: 20170519
  31. TRASTUZUMAB [Suspect]
     Active Substance: TRASTUZUMAB
     Dosage: 420 MG EVERY 3 WEEKS (DOSE FORM: 230) (CUMULATIVE DOSE: 940MG)
     Route: 042
     Dates: start: 20160907, end: 20160926
  32. TRASTUZUMAB [Suspect]
     Active Substance: TRASTUZUMAB
     Dosage: 567 MILLIGRAM, ONCE A DAY (LOADING DOSE)/567 MG, ONCE EVERY 3 WK/ 567 MILLIGRAM, Q3W (567 MILLIGRAM,
     Route: 041
     Dates: start: 20160609, end: 20160609
  33. TRASTUZUMAB [Suspect]
     Active Substance: TRASTUZUMAB
     Dosage: 451.5MG EVERY 3 WEEKS (DOSE FORM: 230) (CUMULATIVE DOSE: 2408.8958MG)
     Route: 042
     Dates: start: 20161111, end: 20170519
  34. TRASTUZUMAB [Suspect]
     Active Substance: TRASTUZUMAB
     Dosage: 451.5MG EVERY 3 WEEKS (DOSE FORM: 230) (CUMULATIVE DOSE: 2860.3958MG)
     Route: 042
     Dates: start: 20161202, end: 20170203
  35. TRASTUZUMAB [Suspect]
     Active Substance: TRASTUZUMAB
     Dosage: 441MG EVERY 3 WEEKS (DOSE FORM: 230) (CUMULATIVE DOSE: 987MG)
     Route: 042
     Dates: start: 20160907, end: 20160926
  36. TRASTUZUMAB [Suspect]
     Active Substance: TRASTUZUMAB
     Dosage: INFUSION, SOLUTION (DOSE FORM: 293)
     Route: 042
     Dates: start: 20161202, end: 20170203
  37. TRASTUZUMAB [Suspect]
     Active Substance: TRASTUZUMAB
     Dosage: INFUSION, SOLUTION (DOSE FORM: 293)/INFUSION, SOLUTION. THERAPY START DATE: 24-FEB-2017 AND THERAPY
     Route: 042
     Dates: start: 20170224, end: 20170407
  38. TRASTUZUMAB [Suspect]
     Active Substance: TRASTUZUMAB
     Dosage: INFUSION, SOLUTION (DOSE FORM: 293)
     Route: 042
     Dates: start: 20161111, end: 20170519
  39. TRASTUZUMAB [Suspect]
     Active Substance: TRASTUZUMAB
     Dosage: INFUSION, SOLUTION (DOSE FORM: 293)
     Route: 042
     Dates: start: 20160907, end: 20160926
  40. TRASTUZUMAB [Suspect]
     Active Substance: TRASTUZUMAB
     Dosage: INFUSION, SOLUTION (DOSE FORM: 293)
     Route: 042
     Dates: start: 20161021, end: 20161111
  41. TRASTUZUMAB [Suspect]
     Active Substance: TRASTUZUMAB
     Dosage: LOADING DOSE, INFUSION, SOLUTION (DOSE FORM: 293)
     Route: 042
     Dates: start: 20160609, end: 20160609
  42. TRASTUZUMAB [Suspect]
     Active Substance: TRASTUZUMAB
     Dosage: INFUSION, SOLUTION (DOSE FORM: 293)
     Route: 042
     Dates: start: 20170519, end: 20171228
  43. TRASTUZUMAB [Suspect]
     Active Substance: TRASTUZUMAB
     Dosage: 420 MG EVERY 3 WEEKS (DOSE FORM: 230) (CUMULATIVE DOSE: 4340.8335MG)
     Route: 042
     Dates: start: 20170224, end: 20170407
  44. TRASTUZUMAB [Suspect]
     Active Substance: TRASTUZUMAB
     Dosage: 280MG, Q3W,(CUM DOSE: 7440.5557MG)
     Route: 042
  45. TRASTUZUMAB [Suspect]
     Active Substance: TRASTUZUMAB
     Dosage: 473 MG, ONCE EVERY 3 WK
     Route: 042
     Dates: start: 20170519, end: 20171228
  46. TRASTUZUMAB [Suspect]
     Active Substance: TRASTUZUMAB
     Dosage: 431 MG, ONCE EVERY 3 WK
     Route: 042
     Dates: start: 20170224, end: 20170407
  47. TRASTUZUMAB [Suspect]
     Active Substance: TRASTUZUMAB
     Dosage: 1260 MG, ONCE EVERY 3 WK/THERAPY END DATE: 26-SEP-2016, 1260MG (CUM DOSE:8460.0MG) (CUMULATIVE DOSE
     Route: 042
     Dates: start: 20160907, end: 20160926
  48. TRASTUZUMAB [Suspect]
     Active Substance: TRASTUZUMAB
     Dosage: 1260MG(42MG,3TIME/WK,DOSE:200CUMDOSE:3780.0MG)
     Route: 042
     Dates: start: 20160701
  49. TRASTUZUMAB [Suspect]
     Active Substance: TRASTUZUMAB
     Dosage: 1260 MG, ONCE EVERY 3 WK
     Route: 042
     Dates: start: 20170224
  50. TRASTUZUMAB [Suspect]
     Active Substance: TRASTUZUMAB
     Dosage: 1292 MG, ONCE EVERY 3 WK
     Route: 042
     Dates: start: 20170224, end: 20170407
  51. TRASTUZUMAB [Suspect]
     Active Substance: TRASTUZUMAB
     Indication: HER2 positive breast cancer
     Dosage: 1323 MG, ONCE EVERY 3 WK/1323MG(441MG, 3 DOSE PER 1W (CUM DOSE: 8883MG)
     Route: 042
     Dates: start: 20160907, end: 20160926
  52. TRASTUZUMAB [Suspect]
     Active Substance: TRASTUZUMAB
     Indication: Breast cancer metastatic
     Dosage: 1355 MG, ONCE EVERY 3 WK
     Route: 042
     Dates: start: 20170428, end: 20170519
  53. TRASTUZUMAB [Suspect]
     Active Substance: TRASTUZUMAB
     Dosage: 1418 MG, ONCE EVERY 3 WK
     Route: 042
     Dates: start: 20170612, end: 20171228
  54. TRASTUZUMAB [Suspect]
     Active Substance: TRASTUZUMAB
     Dosage: 452 MG, ONCE EVERY 3 WK
     Route: 042
     Dates: start: 20161021, end: 20161111
  55. TRASTUZUMAB [Suspect]
     Active Substance: TRASTUZUMAB
     Dosage: 473 MG, ONCE EVERY 3 WK
     Route: 042
     Dates: start: 20170519, end: 20171228
  56. TRASTUZUMAB [Suspect]
     Active Substance: TRASTUZUMAB
     Dosage: 441 MG, ONCE EVERY 3 WK/441 MILLIGRAM (441 MILLIGRAM), START 02-DEC-2016
     Route: 042
     Dates: start: 20161202, end: 20170203
  57. TRASTUZUMAB [Suspect]
     Active Substance: TRASTUZUMAB
     Dosage: 1355 MG, ONCE EVERY 3 WK
     Route: 042
     Dates: start: 20161111, end: 20170519
  58. TRASTUZUMAB [Suspect]
     Active Substance: TRASTUZUMAB
     Dosage: 430 MG, ONCE EVERY 3 WK
     Route: 042
     Dates: start: 20170224, end: 20170407
  59. TRASTUZUMAB [Suspect]
     Active Substance: TRASTUZUMAB
     Dosage: 452 MG, ONCE EVERY 3 WK
     Route: 042
     Dates: start: 20161202, end: 20170203
  60. TRASTUZUMAB [Suspect]
     Active Substance: TRASTUZUMAB
     Dosage: 420 MG, ONCE EVERY 3 WK/INFUSION, SOLUTION. THERAPY START DATE: 02-DEC-2016 AND THERAPY END DATE: 03
     Route: 042
     Dates: start: 20161202, end: 20170203
  61. TRASTUZUMAB [Suspect]
     Active Substance: TRASTUZUMAB
     Dosage: 473 MG, ONCE EVERY 3 WK
     Route: 042
     Dates: start: 20170612, end: 20171228
  62. TRASTUZUMAB [Suspect]
     Active Substance: TRASTUZUMAB
     Dosage: 452 MG, ONCE EVERY 3 WK
     Route: 042
     Dates: start: 20170428, end: 20170519
  63. TRASTUZUMAB [Suspect]
     Active Substance: TRASTUZUMAB
     Dosage: 452 MG, ONCE EVERY 3 WK
     Route: 042
     Dates: start: 20161111, end: 20170519
  64. TRASTUZUMAB [Suspect]
     Active Substance: TRASTUZUMAB
     Dosage: 420 MG, ONCE EVERY 3 WK (CUMULATIVE DOSE TO FIRST REACTION: 567 MG)/420 MILLIGRAM, Q3W (3 TIMES/WK)
     Route: 042
     Dates: start: 20160701, end: 20200727
  65. TRASTUZUMAB [Suspect]
     Active Substance: TRASTUZUMAB
     Dosage: 1355 MG, ONCE EVERY 3 WK
     Route: 042
     Dates: start: 20161111, end: 20170519
  66. TRASTUZUMAB [Suspect]
     Active Substance: TRASTUZUMAB
     Dosage: 452 MG, ONCE EVERY 3 WK (CUMULATIVE DOSE TO FIRST REACTION: 567 MG)
     Route: 042
     Dates: start: 20161111, end: 20170519
  67. TRASTUZUMAB [Suspect]
     Active Substance: TRASTUZUMAB
     Dosage: 452 MILLIGRAM, Q3WK; (CUMULATIVE DOSE TO FIRST REACTION: 567 MG)
     Dates: start: 20161111, end: 20170519
  68. TRASTUZUMAB [Suspect]
     Active Substance: TRASTUZUMAB
     Dosage: 1417.5 MG, 1/WEEK
     Dates: start: 20170224
  69. TRASTUZUMAB [Suspect]
     Active Substance: TRASTUZUMAB
     Dosage: 452 MG, ONCE EVERY 3 WK (CUMULATIVE DOSE TO FIRST REACTION: 567 MG)
     Route: 042
     Dates: start: 20170428, end: 20170519
  70. TRASTUZUMAB [Suspect]
     Active Substance: TRASTUZUMAB
     Dosage: 567 MG, ONCE EVERY 3 WK (CUMULATIVE DOSE TO FIRST REACTION: 567 MG)
     Route: 042
     Dates: start: 20160609, end: 20160609
  71. TRASTUZUMAB [Suspect]
     Active Substance: TRASTUZUMAB
     Dosage: 420 MG, ONCE EVERY 3 WK (CUMULATIVE DOSE TO FIRST REACTION: 567 MG)
     Route: 042
     Dates: start: 20170224, end: 20170407
  72. TRASTUZUMAB [Suspect]
     Active Substance: TRASTUZUMAB
     Dosage: UNK; ; (CUMULATIVE DOSE TO FIRST REACTION: 567 MG)
     Route: 048
     Dates: start: 20180213, end: 20180605
  73. TRASTUZUMAB [Suspect]
     Active Substance: TRASTUZUMAB
     Dosage: 1418 MG, ONCE EVERY 3 WK (CUMULATIVE DOSE TO FIRST REACTION: 567 MG)
     Route: 042
     Dates: start: 20170612, end: 20171228
  74. TRASTUZUMAB [Suspect]
     Active Substance: TRASTUZUMAB
     Dosage: 280 MG, ONCE EVERY 3 WK (CUMULATIVE DOSE TO FIRST REACTION: 567 MG) (280 MILLIGRAM, START 31-JAN-201
     Route: 042
     Dates: start: 20180131, end: 20180131
  75. TRASTUZUMAB [Suspect]
     Active Substance: TRASTUZUMAB
     Dosage: 1292 MG, ONCE EVERY 3 WK (CUMULATIVE DOSE TO FIRST REACTION: 567 MG)
     Route: 042
     Dates: start: 20170224, end: 20170407
  76. TRASTUZUMAB [Suspect]
     Active Substance: TRASTUZUMAB
     Dosage: 1417.5 MG, 1/WEEK (CUMULATIVE DOSE TO FIRST REACTION: 567 MG)
     Dates: start: 20161111
  77. TRASTUZUMAB [Suspect]
     Active Substance: TRASTUZUMAB
     Dosage: 431 MILLIGRAM, 3 WEEK (CUMULATIVE DOSE TO FIRST REACTION: 567 MG)
     Route: 042
     Dates: start: 20170224, end: 20170407
  78. TRASTUZUMAB [Suspect]
     Active Substance: TRASTUZUMAB
     Dosage: 441 MILLIGRAM, 3 DOSE PER 1W (DOSE FORM: 200) (CUMULATIVE DOSE: 8883.0MG); (CUMULATIVE DOSE TO FIRST
     Route: 042
     Dates: start: 20160202, end: 20160203
  79. TRASTUZUMAB [Suspect]
     Active Substance: TRASTUZUMAB
     Dosage: 1355 MG, ONCE EVERY 3 WK
     Route: 042
     Dates: start: 20170428, end: 20170519
  80. TRASTUZUMAB [Suspect]
     Active Substance: TRASTUZUMAB
     Dosage: 452 MG, ONCE EVERY 3 WK (CUMULATIVE DOSE TO FIRST REACTION: 567 MG)
     Route: 042
     Dates: start: 20161021, end: 20161111
  81. TRASTUZUMAB [Suspect]
     Active Substance: TRASTUZUMAB
     Dosage: 473 MG, ONCE EVERY 3 WK (CUMULATIVE DOSE TO FIRST REACTION: 567 MG)
     Route: 042
     Dates: start: 20170519, end: 20171228
  82. TRASTUZUMAB [Suspect]
     Active Substance: TRASTUZUMAB
     Dosage: 472.5 MG EVERY 3 WEEKS (LOADING DOSE) (DOSE FORM: 230) (CUMULATIVE DOSE: 6772.5MG) (CUMULATIVE DOSE
     Route: 042
     Dates: start: 20170519, end: 20171228
  83. TRASTUZUMAB [Suspect]
     Active Substance: TRASTUZUMAB
     Dosage: 472.5MG, Q3W, (CUM DOSE7312.5MG),START 12-JUN-2017
     Route: 042
  84. TRASTUZUMAB [Suspect]
     Active Substance: TRASTUZUMAB
     Dosage: 1260 MG, ONCE EVERY 3 WK (CUMULATIVE DOSE TO FIRST REACTION: 567 MG)
     Route: 042
     Dates: start: 20160907, end: 20160926
  85. TRASTUZUMAB [Suspect]
     Active Substance: TRASTUZUMAB
     Dosage: 441 MG, EVERY 3 WEEKS (PHARMACEUTICAL DOSE FORM: 230) (CUMULATIVE DOSE: 987.0 MG) (CUMULATIVE DOSE T
     Route: 042
     Dates: start: 20160907, end: 20160926
  86. TRASTUZUMAB [Suspect]
     Active Substance: TRASTUZUMAB
     Dosage: 420 MILLIGRAM, 3 WEEKS; (CUMULATIVE DOSE TO FIRST REACTION: 567 MG)
     Route: 042
     Dates: start: 20160907, end: 20160926
  87. TRASTUZUMAB [Suspect]
     Active Substance: TRASTUZUMAB
     Dosage: 430 MG, ONCE EVERY 3 WK (CUMULATIVE DOSE TO FIRST REACTION: 567 MG)
     Route: 042
     Dates: start: 20170224, end: 20170407
  88. TRASTUZUMAB [Suspect]
     Active Substance: TRASTUZUMAB
     Dosage: 473 MILLIGRAM, ONCE EVERY 3 WK (CUMULATIVE DOSE TO FIRST REACTION: 567 MG)
     Dates: start: 20170612, end: 20171228
  89. TRASTUZUMAB [Suspect]
     Active Substance: TRASTUZUMAB
     Dosage: 1323 MG, ONCE EVERY 3 WK (CUMULATIVE DOSE TO FIRST REACTION: 567 MG)
     Route: 042
     Dates: start: 20160907, end: 20160926
  90. TRASTUZUMAB [Suspect]
     Active Substance: TRASTUZUMAB
     Dosage: 280 MILLIGRAM, 3 WEEK (CUMULATIVE DOSE TO FIRST REACTION: 567 MG)
     Dates: start: 20170724
  91. TRASTUZUMAB [Suspect]
     Active Substance: TRASTUZUMAB
     Dosage: 430 MILLIGRAM, 3 WEEKS (CUMULATIVE DOSE TO FIRST REACTION: 7514.7617 MG)
     Route: 042
     Dates: start: 20170724, end: 20180407
  92. TRASTUZUMAB [Suspect]
     Active Substance: TRASTUZUMAB
     Dosage: 567 MG, QD
     Route: 042
     Dates: start: 20160609, end: 20160609
  93. TRASTUZUMAB [Suspect]
     Active Substance: TRASTUZUMAB
     Dosage: 280 MG, ONCE EVERY 3 WK )280 MILLIGRAM, START 31-JAN-2018)
     Route: 042
     Dates: start: 20180131, end: 20180131
  94. TRASTUZUMAB [Suspect]
     Active Substance: TRASTUZUMAB
     Dosage: 441 MG, ONCE EVERY 3 WK/THERAPY START DATE: 07-SEP-2016 AND STOP DATE: 26-SEP-2016 ((CUMULATIVE DOSE
     Route: 042
     Dates: start: 20160907, end: 20160926
  95. TRASTUZUMAB [Suspect]
     Active Substance: TRASTUZUMAB
     Dosage: 441 MG, EVERY 3 WEEKS (PHARMACEUTICAL DOSE FORM: 230) (CUMULATIVE DOSE: 987.0 MG)
     Route: 042
     Dates: start: 20160907, end: 20160926
  96. TRASTUZUMAB [Suspect]
     Active Substance: TRASTUZUMAB
     Dosage: 430.5 MILLIGRAM, 3 TIMES/WK (DOSAGE FORM: 200) (CUMULATIVE DOSE: 39997.68 MG)
     Route: 042
     Dates: start: 20170224
  97. TRASTUZUMAB [Suspect]
     Active Substance: TRASTUZUMAB
     Dosage: 1354.5MG(451.5MG,3TIME/WK(CUM DOSE21680.062)/1354.5MG(451.5MG,3 TIMES/WK(CUM DOSE:54180MG)
     Route: 042
     Dates: end: 20170519
  98. ANASTROZOLE [Suspect]
     Active Substance: ANASTROZOLE
     Indication: HER2 positive breast cancer
     Dosage: UNK
     Dates: start: 20180606, end: 20190904
  99. ANASTROZOLE [Suspect]
     Active Substance: ANASTROZOLE
     Indication: Breast cancer metastatic
     Dosage: 1 MG, QD
     Route: 048
     Dates: start: 20180606, end: 20190904
  100. ANASTROZOLE [Suspect]
     Active Substance: ANASTROZOLE
     Dosage: UNK
     Route: 048
  101. ANASTROZOLE [Suspect]
     Active Substance: ANASTROZOLE
     Dosage: 1 MILLIGRAM, QD
     Route: 048
     Dates: start: 20180606
  102. ANASTROZOLE [Suspect]
     Active Substance: ANASTROZOLE
     Dosage: 1 MG, QD, CUMULATIVE DOSE TO FIRST REACTION: 912 MG
     Route: 048
     Dates: start: 20180606, end: 20190904
  103. ANASTROZOLE [Suspect]
     Active Substance: ANASTROZOLE
     Dosage: CUMULATIVE DOSE TO FIRST REACTION: 684 MG
     Route: 048
     Dates: start: 20180606, end: 20190904
  104. ANASTROZOLE [Suspect]
     Active Substance: ANASTROZOLE
     Dosage: 1 MG, QD
     Route: 048
     Dates: start: 20180606, end: 20190904
  105. ANASTROZOLE [Suspect]
     Active Substance: ANASTROZOLE
     Indication: HER2 positive breast cancer
     Dosage: 1 MG, QD (CUMULATIVE DOSE TO FIRST REACTION: 456 MG)
     Route: 048
     Dates: start: 20180606
  106. ANASTROZOLE [Suspect]
     Active Substance: ANASTROZOLE
     Dosage: 1 MILLIGRAM, QD
     Route: 048
     Dates: start: 20180606, end: 20190904
  107. ANASTROZOLE [Suspect]
     Active Substance: ANASTROZOLE
     Dosage: 1 MILLIGRAM, QD (CUMULATIVE DOSE TO FIRST REACTION: 684.0 MG)
     Route: 048
     Dates: start: 20180606, end: 20190904
  108. ANASTROZOLE [Suspect]
     Active Substance: ANASTROZOLE
     Indication: Product used for unknown indication
     Dosage: 1 MG, QD
     Route: 048
     Dates: start: 20180606, end: 20190904
  109. ANASTROZOLE [Suspect]
     Active Substance: ANASTROZOLE
     Dosage: 1 MG, QD
     Route: 048
     Dates: start: 20160722, end: 20160723
  110. ANASTROZOLE [Suspect]
     Active Substance: ANASTROZOLE
     Dosage: 1 MG, QD
     Route: 048
     Dates: start: 20180606, end: 20190904
  111. ANASTROZOLE [Suspect]
     Active Substance: ANASTROZOLE
     Dosage: UNK
     Route: 048
  112. BENZYDAMINE HYDROCHLORIDE [Suspect]
     Active Substance: BENZYDAMINE HYDROCHLORIDE
     Indication: Product used for unknown indication
     Dosage: UNK, ONCE A DAY
     Route: 048
     Dates: start: 20160722, end: 20160723
  113. BENZYDAMINE HYDROCHLORIDE [Suspect]
     Active Substance: BENZYDAMINE HYDROCHLORIDE
     Dosage: DAILY
     Dates: start: 20160722, end: 20160723
  114. BENZYDAMINE HYDROCHLORIDE [Suspect]
     Active Substance: BENZYDAMINE HYDROCHLORIDE
     Dosage: 130 MG, ONCE EVERY 3 WK
     Route: 042
     Dates: start: 20170727
  115. BENZYDAMINE HYDROCHLORIDE [Suspect]
     Active Substance: BENZYDAMINE HYDROCHLORIDE
     Dosage: UNK, ONCE A DAY
     Route: 065
     Dates: start: 20160722, end: 20170723
  116. BENZYDAMINE HYDROCHLORIDE [Suspect]
     Active Substance: BENZYDAMINE HYDROCHLORIDE
     Dosage: 130 MG
     Dates: start: 20170727
  117. BENZYDAMINE HYDROCHLORIDE [Suspect]
     Active Substance: BENZYDAMINE HYDROCHLORIDE
     Dosage: UNK
     Route: 042
     Dates: start: 20161111, end: 20161111
  118. BENZYDAMINE HYDROCHLORIDE [Suspect]
     Active Substance: BENZYDAMINE HYDROCHLORIDE
     Dosage: UNK
     Dates: start: 20160722
  119. BENZYDAMINE HYDROCHLORIDE [Suspect]
     Active Substance: BENZYDAMINE HYDROCHLORIDE
     Dosage: 130 MG
     Route: 042
     Dates: start: 20170727
  120. BENZYDAMINE HYDROCHLORIDE [Suspect]
     Active Substance: BENZYDAMINE HYDROCHLORIDE
     Indication: Product used for unknown indication
     Dosage: UNK, QD
     Route: 065
     Dates: start: 20160722, end: 20160723
  121. BENZYDAMINE HYDROCHLORIDE [Suspect]
     Active Substance: BENZYDAMINE HYDROCHLORIDE
     Dosage: 130 MILLIGRAM
     Route: 065
     Dates: start: 20170727
  122. BENZYDAMINE HYDROCHLORIDE [Suspect]
     Active Substance: BENZYDAMINE HYDROCHLORIDE
     Dosage: UNKNOWN, QD
     Route: 065
     Dates: start: 20160722, end: 20170723
  123. BENZYDAMINE [Suspect]
     Active Substance: BENZYDAMINE
     Indication: Product used for unknown indication
     Dosage: 110 MG, 3/WEEK
  124. BENZYDAMINE [Suspect]
     Active Substance: BENZYDAMINE
     Dosage: UNK, ONCE A DAY
     Dates: start: 20160722, end: 20160723
  125. BENZYDAMINE [Suspect]
     Active Substance: BENZYDAMINE
     Dosage: 130 MG
     Dates: start: 20170727
  126. DOCETAXEL [Suspect]
     Active Substance: DOCETAXEL
     Indication: HER2 positive breast cancer
     Dosage: 130 MILLIGRAM, Q3WK
     Route: 042
     Dates: start: 20160701, end: 20160727
  127. DOCETAXEL [Suspect]
     Active Substance: DOCETAXEL
     Indication: Breast cancer metastatic
     Dosage: 130 MILLIGRAM, Q3WK
     Route: 042
     Dates: start: 20160701, end: 20160727
  128. DOCETAXEL [Suspect]
     Active Substance: DOCETAXEL
     Dosage: 130 MILLIGRAM, Q3WK
     Route: 042
     Dates: start: 20160701, end: 20160727
  129. DOCETAXEL [Suspect]
     Active Substance: DOCETAXEL
     Dosage: 108 MILLIGRAM, Q3WK/108 MG, ONCE EVERY 3 WK
     Route: 042
     Dates: start: 20161111, end: 20161111
  130. DOCETAXEL [Suspect]
     Active Substance: DOCETAXEL
     Dosage: 108 MILLIGRAM, Q3WK
     Route: 042
     Dates: start: 20161111, end: 20161111
  131. DOCETAXEL [Suspect]
     Active Substance: DOCETAXEL
     Dosage: 108 MILLIGRAM, Q3WK
     Route: 042
     Dates: start: 20161111, end: 20161111
  132. DOCETAXEL [Suspect]
     Active Substance: DOCETAXEL
     Dosage: 110 MILLIGRAM, Q3WK
     Route: 042
     Dates: start: 20160907, end: 20161021
  133. DOCETAXEL [Suspect]
     Active Substance: DOCETAXEL
     Dosage: 110 MILLIGRAM, Q3WK
     Route: 042
     Dates: start: 20160907, end: 20161021
  134. DOCETAXEL [Suspect]
     Active Substance: DOCETAXEL
     Dosage: 110 MILLIGRAM, Q3WK
     Route: 042
     Dates: start: 20160907, end: 20161021
  135. DOCETAXEL [Suspect]
     Active Substance: DOCETAXEL
     Dosage: 130 MG, EVERY 3 WEEKS
     Route: 042
     Dates: start: 20160701
  136. DOCETAXEL [Suspect]
     Active Substance: DOCETAXEL
     Dosage: 108 MG, EVERY 3 WEEKS
     Route: 042
     Dates: start: 20161111, end: 20161111
  137. DOCETAXEL [Suspect]
     Active Substance: DOCETAXEL
     Dosage: 110 MG, EVERY 3 WEEKS
     Route: 042
     Dates: start: 20160907, end: 20161021
  138. DOCETAXEL [Suspect]
     Active Substance: DOCETAXEL
     Dosage: 130 MG, EVERY 3 WEEKS (CUMULATIVE DOSE: 130MG)
     Route: 042
     Dates: start: 20160701, end: 20160727
  139. DOCETAXEL [Suspect]
     Active Substance: DOCETAXEL
     Dosage: EVERY 3 WEEK (CUMULATIVE DOSE:130 MG)
     Route: 042
     Dates: start: 20160907, end: 20161021
  140. DOCETAXEL [Suspect]
     Active Substance: DOCETAXEL
     Dosage: 1, EVERY 3 WEEKS; UNKNOWN
     Route: 042
     Dates: start: 20160907, end: 20161021
  141. DOCETAXEL [Suspect]
     Active Substance: DOCETAXEL
     Dosage: 1NG
     Route: 042
     Dates: start: 20170616
  142. DOCETAXEL [Suspect]
     Active Substance: DOCETAXEL
     Dosage: 130 MG EVERY 3 WEEKS (CUMMULATIVE DOSE: 30.952381 MG)
     Route: 042
     Dates: start: 20160727
  143. DOCETAXEL [Suspect]
     Active Substance: DOCETAXEL
     Dosage: 500 MG, EVERY 12 HOURS/500 MG, BID
     Route: 042
     Dates: start: 20170617
  144. DOCETAXEL [Suspect]
     Active Substance: DOCETAXEL
     Dosage: 110 MG, ONCE EVERY 3 WK
     Route: 042
     Dates: start: 20160202, end: 20160203
  145. DOCETAXEL [Suspect]
     Active Substance: DOCETAXEL
     Dosage: ^CUMULATIVE DOSE TO FIRST REACTION: 330000 MG
     Route: 042
     Dates: start: 20170617
  146. DOCETAXEL [Suspect]
     Active Substance: DOCETAXEL
     Dosage: UNK, Q2WEEKS(CUMULATIVE DOSE TO FIRST REACTION: 895.49603 MG)
     Route: 042
     Dates: start: 20160907, end: 20161021
  147. DOCETAXEL [Suspect]
     Active Substance: DOCETAXEL
     Dosage: 1G (CUMULATIVE DOSE TO FIRST REACTION: 895.49603 MG)
     Dates: start: 20170616
  148. DOCETAXEL [Suspect]
     Active Substance: DOCETAXEL
     Dosage: 500 MILLIGRAM, TWO TIMES A DAY (CUMULATIVE DOSE: 330000.0 MG)
     Route: 042
     Dates: start: 20161021
  149. DOCETAXEL [Suspect]
     Active Substance: DOCETAXEL
     Indication: HER2 positive breast cancer
     Dosage: 110 MILLIGRAM EVERY 3 WEEKS (CUMMULATIVE DOSE: 246.19048 MG)
     Route: 042
     Dates: start: 20160907, end: 20161021
  150. DOCETAXEL [Suspect]
     Active Substance: DOCETAXEL
     Dosage: 10 MILLIGRAM EVERY 3 WEEKS
     Route: 042
     Dates: start: 20160727
  151. DOCETAXEL [Suspect]
     Active Substance: DOCETAXEL
     Dosage: 108 MILLIGRAM, 3 WEEK (CUMULATIVE DOSE: 576.2143 MG)
     Route: 042
     Dates: start: 20161111, end: 20161111
  152. DOCETAXEL [Suspect]
     Active Substance: DOCETAXEL
     Dosage: 1 NANOGRAM
     Route: 042
     Dates: start: 20170616
  153. DOCETAXEL [Suspect]
     Active Substance: DOCETAXEL
     Dosage: 500 MILLIGRAM, TWO TIMES A DAY (CUMULATIVE DOSE: 330000.0 MG)
     Route: 042
     Dates: start: 20170617
  154. DOCETAXEL [Suspect]
     Active Substance: DOCETAXEL
     Dosage: 130 MILLIGRAM EVERY 3 WEEKS (CUMULATIVE DOSE: 130.0 MG)
     Route: 042
     Dates: start: 20160701, end: 20160727
  155. DOCETAXEL [Suspect]
     Active Substance: DOCETAXEL
     Dosage: 130 MILLIGRAM, 3 WEEK
     Route: 042
     Dates: start: 20160701
  156. DOCETAXEL [Suspect]
     Active Substance: DOCETAXEL
     Dosage: 110 MG, ONCE EVERY 3 WK (CUMULATIVE DOSE: 895.49603 MG)
     Route: 042
     Dates: start: 20160202, end: 20160203
  157. DOCETAXEL [Suspect]
     Active Substance: DOCETAXEL
     Dosage: 130 MILLIGRAM, 3 WEEK
     Route: 042
     Dates: start: 20160717
  158. DOCETAXEL [Suspect]
     Active Substance: DOCETAXEL
     Dosage: 110 MILLIGRAM EVERY 3 WEEKS
     Route: 042
     Dates: start: 20160907, end: 20161021
  159. DOCETAXEL [Suspect]
     Active Substance: DOCETAXEL
     Dosage: 110 MG, ONCE EVERY 3 WK
     Route: 042
     Dates: start: 20160202, end: 20160203
  160. DOCETAXEL [Suspect]
     Active Substance: DOCETAXEL
     Dosage: 110 MG, ONCE EVERY 3 WK (CUMULATIVE DOSE: 1343.244 MG)
     Route: 042
     Dates: start: 20160202, end: 20160203
  161. DOCETAXEL [Suspect]
     Active Substance: DOCETAXEL
     Dosage: 110 MILLIGRAM EVERY 3 WEEKS (CUMULATIVE DOSE TO FIRST REACTION: 246.19048 MG)
     Route: 042
     Dates: start: 20160907, end: 20161021
  162. DOCETAXEL [Suspect]
     Active Substance: DOCETAXEL
     Dosage: 130 MILLIGRAM EVERY 3 WEEKS (CUMULATIVE DOSE: 30.952381 MG)
     Route: 042
     Dates: start: 20160727
  163. DOCETAXEL [Suspect]
     Active Substance: DOCETAXEL
     Dosage: 110 MG, ONCE EVERY 3 WK (CUMULATIVE DOSE: 895.49603 MG)
     Route: 042
     Dates: start: 20160202, end: 20160203
  164. DOCETAXEL [Suspect]
     Active Substance: DOCETAXEL
     Dosage: 108 MILLIGRAM, 3 WEEK (CUMULATIVE DOSE: 895.49603 MG)
     Route: 042
     Dates: start: 20161111, end: 20161111
  165. DOCETAXEL [Suspect]
     Active Substance: DOCETAXEL
     Dosage: 110 MG EVERY 3 WEEKS (110 MILLIGRAM, 3 WEEK, (CUMMULATIVE DOSE: 246.19048 MG)) ADDITIONAL INFO: ROUT
     Route: 042
     Dates: start: 20160907, end: 20161021
  166. DOCETAXEL [Suspect]
     Active Substance: DOCETAXEL
     Indication: HER2 positive breast cancer
     Dosage: 130 MG, ONCE EVERY 3 WK, Q3W  (CUMULATIVE DOSE: 7886.925 MG)
     Route: 042
     Dates: start: 20160727
  167. DOCETAXEL [Suspect]
     Active Substance: DOCETAXEL
     Dosage: 108 MG, ONCE EVERY 3 WK (CUMULATIVE DOSE: 6001.7144 MG)
     Route: 042
     Dates: start: 20161111, end: 20161111
  168. DOCETAXEL [Suspect]
     Active Substance: DOCETAXEL
     Dosage: 1 NANOGRAM START 16-JUN-2017
     Route: 042
     Dates: start: 20170616
  169. DOCETAXEL [Suspect]
     Active Substance: DOCETAXEL
     Dosage: 500 MG, BID (CUMULATIVE DOSE: 949041.7 MG)
     Route: 042
  170. DOCETAXEL [Suspect]
     Active Substance: DOCETAXEL
     Dosage: 130 MG, ONCE EVERY 3 WK, Q3W (CUMULATIVE DOSE: 8047.877 MG)
     Route: 042
     Dates: start: 20160701, end: 20160727
  171. DOCETAXEL [Suspect]
     Active Substance: DOCETAXEL
     Dosage: 110 MG, ONCE EVERY 3 WK (CUMULATIVE DOSE: 6453.552 MG)
     Dates: start: 20160907, end: 20161021
  172. DOCETAXEL [Suspect]
     Active Substance: DOCETAXEL
     Dosage: 110 MG, 3/WEEK (CUMULATIVE DOSE TO FIRST REACTION: 576.214 MG)
     Route: 042
     Dates: start: 20160907, end: 20161021
  173. DOCETAXEL [Suspect]
     Active Substance: DOCETAXEL
     Dosage: 500 MG, EVERY 12 HOURS,
     Route: 042
     Dates: start: 20170617
  174. DOCETAXEL [Suspect]
     Active Substance: DOCETAXEL
     Dosage: 130 MG, ONCE EVERY 3 WK
     Route: 042
     Dates: start: 20160727
  175. DOCETAXEL [Suspect]
     Active Substance: DOCETAXEL
     Dosage: 110MG EVERY 3 WEEKS, Q3W (CUMULATIVE DOSE TO FIRST REACTION: 7595.2383 MG)
     Route: 042
     Dates: start: 20160202, end: 20160203
  176. DOCETAXEL [Suspect]
     Active Substance: DOCETAXEL
     Dosage: 1000 MG, QD 500 MILLIGRAM, BID, START 17-JUN-2017, CUMULATIVE DOSE TO FIRST REACTION: 949041.7 MG
     Route: 058
     Dates: start: 20170617
  177. DOCETAXEL [Suspect]
     Active Substance: DOCETAXEL
     Dosage: 1 GRAM, START 16-JUN-2017 (CUMULATIVE DOSE TO FIRST REACTION: 576.214 MG)
     Route: 042
     Dates: start: 20170616
  178. DOCETAXEL [Suspect]
     Active Substance: DOCETAXEL
     Dosage: UNK UNK, Q3W, START 07-SEP-2016
     Route: 042
     Dates: start: 20161021
  179. DOCETAXEL [Suspect]
     Active Substance: DOCETAXEL
     Dosage: 110 MILLIGRAM, Q3W (CUMULATIVE DOSE TO FIRST REACTION: 576.214 MG)
     Route: 042
     Dates: start: 20160202, end: 20160203
  180. DOCETAXEL [Suspect]
     Active Substance: DOCETAXEL
     Dosage: 500 MILLIGRAM, BID, START 17-JUN-2017  (CUMULATIVE DOSE TO FIRST REACTION: 576.214 MG)
     Route: 058
     Dates: start: 20170617
  181. DOCETAXEL [Suspect]
     Active Substance: DOCETAXEL
     Dosage: UNK UNK, Q3W START 07-SEP-2016 (CUMULATIVE DOSE TO FIRST REACTION: 576.214 MG)
     Route: 042
     Dates: start: 20160907
  182. DOCETAXEL [Suspect]
     Active Substance: DOCETAXEL
     Dosage: 1 GRAM (CUMULATIVE DOSE TO FIRST REACTION: 576.214 MG)
     Route: 042
     Dates: start: 20160616
  183. DOCETAXEL [Suspect]
     Active Substance: DOCETAXEL
     Dosage: 130 MILLIGRAM, Q3W (CUMULATIVE DOSE TO FIRST REACTION: 576.214 MG)
     Route: 042
     Dates: start: 20160701, end: 20160727
  184. DOCETAXEL [Suspect]
     Active Substance: DOCETAXEL
     Dosage: 130 MILLIGRAM, Q3W (CUMULATIVE DOSE TO FIRST REACTION: 576.214 MG)
     Route: 042
     Dates: end: 20160727
  185. DOCETAXEL [Suspect]
     Active Substance: DOCETAXEL
     Dosage: 1 NANOGRAM START 16-JUN-2017 (CUMULATIVE DOSE TO FIRST REACTION: 576.214 MG)
     Route: 042
     Dates: start: 20170616
  186. DOCETAXEL [Suspect]
     Active Substance: DOCETAXEL
     Dosage: 500 MG, BID (CUMULATIVE DOSE: 91000.0 MG)
     Route: 042
     Dates: start: 20161021
  187. DOCETAXEL [Suspect]
     Active Substance: DOCETAXEL
     Dosage: 500 MILLIGRAM, TWO TIMES A DAY (CUMULATIVE DOSE: 330000.0 MG)
     Route: 042
     Dates: start: 20170617
  188. DOCETAXEL [Suspect]
     Active Substance: DOCETAXEL
     Dosage: 130 MILLIGRAM, 3 WEEK (CUMULATIVE DOSE: 130.0 MG)
     Route: 042
     Dates: start: 20160701, end: 20160727
  189. DOCETAXEL [Suspect]
     Active Substance: DOCETAXEL
     Dosage: 1 NANOGRAM(CUMULATIVE DOSE TO FIRST REACTION:895.49603 MG)
     Route: 042
     Dates: start: 20170616
  190. DOCETAXEL [Suspect]
     Active Substance: DOCETAXEL
     Dosage: 110 MG, ONCE EVERY 3 WK (CUMULATIVE DOSE TO FIRST REACTION: 895.49603 MG)
     Route: 042
     Dates: start: 20160202, end: 20160203
  191. DOCETAXEL [Suspect]
     Active Substance: DOCETAXEL
     Dosage: 130 MILLIGRAM, EVERY 3 WEEKS (CUMULATIVE DOSE TO FIRST REACTION: 576.214 MG)
     Route: 042
     Dates: start: 20160727
  192. DOCETAXEL [Suspect]
     Active Substance: DOCETAXEL
     Dosage: 110 MG, ONCE EVERY 3 WK
     Route: 042
     Dates: start: 20160202, end: 20160203
  193. DOCETAXEL [Suspect]
     Active Substance: DOCETAXEL
     Dosage: 130 MG, EVERY 2 WEEKS (CUMULATIVE DOSE TO FIRST REACTION: 576.214 MG)
     Route: 042
     Dates: start: 20160727
  194. DOCETAXEL [Suspect]
     Active Substance: DOCETAXEL
     Dosage: 110 MG, EVERY 2 WEEKS (CUMULATIVE DOSE TO FIRST REACTION: 576.214 MG)
     Route: 042
     Dates: start: 20160202, end: 20160203
  195. DOCETAXEL [Suspect]
     Active Substance: DOCETAXEL
     Dosage: 1 DOSE, EVERY 2 WEEKS (CUMULATIVE DOSE TO FIRST REACTION: 576.214 MG)
     Route: 042
     Dates: start: 20161021
  196. DOCETAXEL [Suspect]
     Active Substance: DOCETAXEL
     Dosage: 130 MG, EVERY 2 WEEKS (CUMULATIVE DOSE TO FIRST REACTION: 576.214 MG)
     Route: 042
     Dates: start: 20160701, end: 20160727
  197. DOCETAXEL [Suspect]
     Active Substance: DOCETAXEL
     Dosage: 108 MG, 3 WEEK (CUMULATIVE DOSE TO FIRST REACTION: 576.214 MG)
     Route: 042
     Dates: start: 20161111, end: 20161111
  198. DOCETAXEL [Suspect]
     Active Substance: DOCETAXEL
     Dosage: 500 MILLIGRAM, BID (CUMULATIVE DOSE TO FIRST REACTION: 576.214 MG)
     Route: 058
     Dates: start: 20170617
  199. ENHERTU [Suspect]
     Active Substance: FAM-TRASTUZUMAB DERUXTECAN-NXKI
     Indication: HER2 positive breast cancer
     Dosage: 452 MG, ONCE EVERY 3 WK; INJECTION, POWDER, LYOPHILIZED, FOR SOLUTION (DOSE FORM: 120)/451.5 MILLIGR
     Route: 042
     Dates: start: 20161021, end: 20161111
  200. ENHERTU [Suspect]
     Active Substance: FAM-TRASTUZUMAB DERUXTECAN-NXKI
     Indication: Off label use
     Dosage: 452 MG, ONCE EVERY 3 WK
     Route: 042
     Dates: start: 20161111, end: 20170519
  201. ENHERTU [Suspect]
     Active Substance: FAM-TRASTUZUMAB DERUXTECAN-NXKI
     Dosage: 473 MG, ONCE EVERY 3 WK
     Route: 042
     Dates: start: 20170428, end: 20170519
  202. ENHERTU [Suspect]
     Active Substance: FAM-TRASTUZUMAB DERUXTECAN-NXKI
     Dosage: 473 MG, ONCE EVERY 3 WK; INJECTION, POWDER, LYOPHILIZED, FOR SOLUTION (DOSE FORM: 120) (CUMULATIVE D
     Route: 042
     Dates: start: 20170519, end: 20171228
  203. ENHERTU [Suspect]
     Active Substance: FAM-TRASTUZUMAB DERUXTECAN-NXKI
     Dosage: 451.5 MG, EVERY 3 WEEKS; INJECTION, POWDER, LYOPHILIZED, FOR SOLUTION (DOSE FORM: 120) (CUMULATIVE D
     Route: 042
     Dates: start: 20161111, end: 20170519
  204. ENHERTU [Suspect]
     Active Substance: FAM-TRASTUZUMAB DERUXTECAN-NXKI
     Dosage: 420 MG, ONCE EVERY 3 WK; INJECTION, POWDER, LYOPHILIZED, FOR SOLUTION (DOSE FORM: 120) (CUMULATIVE D
     Route: 042
     Dates: start: 20160907, end: 20160926
  205. ENHERTU [Suspect]
     Active Substance: FAM-TRASTUZUMAB DERUXTECAN-NXKI
     Dosage: 420 MG, ONCE EVERY 3 WK
     Route: 042
     Dates: start: 20160701, end: 20160727
  206. ENHERTU [Suspect]
     Active Substance: FAM-TRASTUZUMAB DERUXTECAN-NXKI
     Dosage: 451.5 MG, EVERY 3 WEEKS; INJECTION, POWDER, LYOPHILIZED, FOR SOLUTION (DOSE FORM: 120)
     Route: 042
     Dates: start: 20180131
  207. ENHERTU [Suspect]
     Active Substance: FAM-TRASTUZUMAB DERUXTECAN-NXKI
     Dosage: 420 MG, ONCE EVERY 3 WK; INJECTION, POWDER, LYOPHILIZED, FOR SOLUTION (DOSE FORM: 120) (CUMULATIVE D
     Route: 042
     Dates: start: 20161202, end: 20170203
  208. ENHERTU [Suspect]
     Active Substance: FAM-TRASTUZUMAB DERUXTECAN-NXKI
     Dosage: LOADING DOSE; INJECTION, POWDER, LYOPHILIZED, FOR SOLUTION (DOSE FORM: 120)
     Route: 042
     Dates: start: 20170612, end: 20171228
  209. ENHERTU [Suspect]
     Active Substance: FAM-TRASTUZUMAB DERUXTECAN-NXKI
     Dosage: 420 MG, ONCE EVERY 3 WK; INJECTION, POWDER, LYOPHILIZED, FOR SOLUTION (DOSE FORM: 120)CUMULATIVE DOS
     Route: 042
     Dates: start: 20170224, end: 20170407
  210. ENHERTU [Suspect]
     Active Substance: FAM-TRASTUZUMAB DERUXTECAN-NXKI
     Dosage: 567 MG, QD; INJECTION, POWDER, LYOPHILIZED, FOR SOLUTION (DOSE FORM: 120) LOADING DOSE (CUMULLATIVE
     Route: 042
     Dates: start: 20160609, end: 20160609
  211. ENHERTU [Suspect]
     Active Substance: FAM-TRASTUZUMAB DERUXTECAN-NXKI
     Dosage: 420 MG, ONCE EVERY 3 WK
     Route: 042
  212. ENHERTU [Suspect]
     Active Substance: FAM-TRASTUZUMAB DERUXTECAN-NXKI
     Dosage: 415.5 MG 451.5 MG, EVERY 3 WEEKS
     Route: 042
     Dates: start: 20161111, end: 20170519
  213. ENHERTU [Suspect]
     Active Substance: FAM-TRASTUZUMAB DERUXTECAN-NXKI
     Dosage: 473 MG, ONCE EVERY 3 WK; INJECTION, POWDER, LYOPHILIZED, FOR SOLUTION (DOSE FORM: 120)
     Route: 042
     Dates: start: 20170428, end: 20170519
  214. ENHERTU [Suspect]
     Active Substance: FAM-TRASTUZUMAB DERUXTECAN-NXKI
     Dosage: 452 MG, ONCE EVERY 3 WK; INJECTION, POWDER, LYOPHILIZED, FOR SOLUTION (DOSE FORM: 120)
     Route: 042
     Dates: start: 20161111, end: 20170519
  215. ENHERTU [Suspect]
     Active Substance: FAM-TRASTUZUMAB DERUXTECAN-NXKI
     Dosage: 420 MG, ONCE EVERY 3 WK; INJECTION, POWDER, LYOPHILIZED, FOR SOLUTION (DOSE FORM: 120)
     Route: 042
     Dates: start: 20160701, end: 20160727
  216. ENHERTU [Suspect]
     Active Substance: FAM-TRASTUZUMAB DERUXTECAN-NXKI
     Dosage: LOADING DOSE; INJECTION, POWDER, LYOPHILIZED, FOR SOLUTION (DOSE FORM: 120)
     Route: 042
     Dates: start: 20170612, end: 20171228
  217. ENHERTU [Suspect]
     Active Substance: FAM-TRASTUZUMAB DERUXTECAN-NXKI
     Dosage: 420 MG, ONCE EVERY 3 WK; INJECTION, POWDER, LYOPHILIZED, FOR SOLUTION (DOSE FORM: 120)
     Route: 042
     Dates: start: 20160701, end: 20160727
  218. ENHERTU [Suspect]
     Active Substance: FAM-TRASTUZUMAB DERUXTECAN-NXKI
     Dosage: 420 MG, ONCE EVERY 3 WK; INJECTION, POWDER, LYOPHILIZED, FOR SOLUTION (DOSE FORM: 120)
     Route: 042
     Dates: start: 20161202, end: 20170203
  219. ENHERTU [Suspect]
     Active Substance: FAM-TRASTUZUMAB DERUXTECAN-NXKI
     Dosage: 441 MG, EVERY 3 WEEKS
     Route: 042
     Dates: start: 20160907, end: 20160926
  220. ENHERTU [Suspect]
     Active Substance: FAM-TRASTUZUMAB DERUXTECAN-NXKI
     Dosage: 451.5 MG, EVERY 3 WEEKS
     Route: 042
     Dates: start: 20170428, end: 20170519
  221. ENHERTU [Suspect]
     Active Substance: FAM-TRASTUZUMAB DERUXTECAN-NXKI
     Dosage: 451.5 MG, EVERY 3 WEEKS/ CUMULATIVE DOSE TO FIRST REACTION 113967 MG
     Route: 042
     Dates: start: 20161202, end: 20170203
  222. ENHERTU [Suspect]
     Active Substance: FAM-TRASTUZUMAB DERUXTECAN-NXKI
     Dosage: 472.5 MG, EVERY 3 WEEKS (MOST RECENT DOSE ON 28/DEC/2017) (CUMULATIVE DOSE TO FIRST REACTION: 1014.0
     Route: 042
     Dates: start: 20170612
  223. ENHERTU [Suspect]
     Active Substance: FAM-TRASTUZUMAB DERUXTECAN-NXKI
     Dosage: 451.5 MG, EVERY 3 WEEKS
     Route: 042
     Dates: start: 20180131
  224. ENHERTU [Suspect]
     Active Substance: FAM-TRASTUZUMAB DERUXTECAN-NXKI
     Dosage: 451.5 MG, EVERY 3 WEEKS (CUMULATIVE DOSE: 113967 MG)
     Route: 042
     Dates: start: 20161021, end: 20161111
  225. ENHERTU [Suspect]
     Active Substance: FAM-TRASTUZUMAB DERUXTECAN-NXKI
     Dosage: 472.5 MG, EVERY 3 WEEKS (LOADING DOSE)
     Route: 042
     Dates: start: 20170519, end: 20171228
  226. ENHERTU [Suspect]
     Active Substance: FAM-TRASTUZUMAB DERUXTECAN-NXKI
     Dosage: 420 MG, ONCE EVERY 3 WK, CUMULATIVE DOSE TO FIRST REACTION: 113967 MG
     Route: 042
  227. ENHERTU [Suspect]
     Active Substance: FAM-TRASTUZUMAB DERUXTECAN-NXKI
     Dosage: 452 MG, ONCE EVERY 3 WK, CUMULATIVE DOSE TO FIRST REACTION: 113967 MG
     Route: 042
     Dates: start: 20161111, end: 20170519
  228. ENHERTU [Suspect]
     Active Substance: FAM-TRASTUZUMAB DERUXTECAN-NXKI
     Dosage: 420 MG, ONCE EVERY 3 WK, CUMULATIVE DOSE TO FIRST REACTION: 113967 MG
     Route: 042
     Dates: start: 20160602, end: 20220203
  229. ENHERTU [Suspect]
     Active Substance: FAM-TRASTUZUMAB DERUXTECAN-NXKI
     Dosage: 452 MG, ONCE EVERY 3 WK, CUMULATIVE DOSE TO FIRST REACTION: 113967 MG
     Route: 042
     Dates: start: 20170428, end: 20170519
  230. ENHERTU [Suspect]
     Active Substance: FAM-TRASTUZUMAB DERUXTECAN-NXKI
     Dosage: 441 MG, EVERY 3 WEEKS, ^CUMULATIVE DOSE TO FIRST REACTION: 987 MG
     Route: 042
     Dates: start: 20160907, end: 20160926
  231. ENHERTU [Suspect]
     Active Substance: FAM-TRASTUZUMAB DERUXTECAN-NXKI
     Dosage: 452 MG, EVERY 3 WEEKS, ^CUMULATIVE DOSE TO FIRST REACTION: 16573.334 MG
     Route: 042
     Dates: start: 20180831
  232. ENHERTU [Suspect]
     Active Substance: FAM-TRASTUZUMAB DERUXTECAN-NXKI
     Dosage: 473 MG, EVERY 3 WEEKS, ^CUMULATIVE DOSE TO FIRST REACTION: 7320.2383 MG
     Route: 042
     Dates: start: 20170612, end: 20171228
  233. ENHERTU [Suspect]
     Active Substance: FAM-TRASTUZUMAB DERUXTECAN-NXKI
     Dosage: 440 MG, EVERY 3 WEEKS, ^CUMULATIVE DOSE TO FIRST REACTION: 4547.5396 MG
     Route: 042
     Dates: start: 20170224, end: 20170407
  234. ENHERTU [Suspect]
     Active Substance: FAM-TRASTUZUMAB DERUXTECAN-NXKI
     Dosage: 473MG EVERY 3 WEEKS, ^CUMULATIVE DOSE TO FIRST REACTION: 6779.6665 MG
     Route: 042
     Dates: start: 20170519, end: 20171228
  235. ENHERTU [Suspect]
     Active Substance: FAM-TRASTUZUMAB DERUXTECAN-NXKI
     Dosage: 452 MG, EVERY 3 WEEKS, ^CUMULATIVE DOSE TO FIRST REACTION: 2411.5635 MG
     Route: 042
     Dates: start: 20161111, end: 20170519
  236. ENHERTU [Suspect]
     Active Substance: FAM-TRASTUZUMAB DERUXTECAN-NXKI
     Dosage: 452 MG, EVERY 3 WEEKS, ^CUMULATIVE DOSE TO FIRST REACTION: 2863.5635 MG
     Route: 042
     Dates: start: 20161202, end: 20170203
  237. ENHERTU [Suspect]
     Active Substance: FAM-TRASTUZUMAB DERUXTECAN-NXKI
     Dosage: 473MG EVERY 3 WEEKS, ^CUMULATIVE DOSE TO FIRST REACTION: 6306.6665 MG
     Route: 042
     Dates: start: 20170428, end: 20170519
  238. ENHERTU [Suspect]
     Active Substance: FAM-TRASTUZUMAB DERUXTECAN-NXKI
     Dosage: 451.5 MG, EVERY 3 WEEKS; INJECTION, POWDER, LYOPHILIZED, FOR SOLUTION (DOSE FORM: 120)
     Route: 042
     Dates: start: 20180131
  239. ENHERTU [Suspect]
     Active Substance: FAM-TRASTUZUMAB DERUXTECAN-NXKI
     Dosage: 420 MG, ONCE EVERY 3 WK (CUMULATIVE DOSE: 113967 MG)
     Route: 042
     Dates: start: 20160602, end: 20170203
  240. ENHERTU [Suspect]
     Active Substance: FAM-TRASTUZUMAB DERUXTECAN-NXKI
     Dosage: 473 MG, ONCE EVERY 3 WK (CUMULATIVE DOSE: 113967MG)
     Route: 042
     Dates: start: 20170612
  241. ENHERTU [Suspect]
     Active Substance: FAM-TRASTUZUMAB DERUXTECAN-NXKI
     Dosage: 567 MG, QD, LOADING DOSE; INJECTION, POWDER, LYOPHILIZED, FOR SOLUTION (DOSE FORM: 120) (CUULATIVE D
     Route: 042
     Dates: start: 20170612, end: 20171228
  242. ENHERTU [Suspect]
     Active Substance: FAM-TRASTUZUMAB DERUXTECAN-NXKI
     Dosage: 420 MG, ONCE EVERY 3 WK (CUMULATIVE DOSE: 113967MG)
     Dates: start: 20170224, end: 20170407
  243. ENHERTU [Suspect]
     Active Substance: FAM-TRASTUZUMAB DERUXTECAN-NXKI
     Dosage: 441 MG, EVERY 3 WEEKS, ^CUMULATIVE DOSE TO FIRST REACTION: 1014.097 MG
     Route: 042
     Dates: start: 20160907, end: 20160926
  244. ENHERTU [Suspect]
     Active Substance: FAM-TRASTUZUMAB DERUXTECAN-NXKI
     Dosage: 451.5 MG, EVERY 3 WEEKS, ^CUMULATIVE DOSE TO FIRST REACTION: 1014.097 MG
     Route: 042
     Dates: start: 20161202, end: 20170203
  245. ENHERTU [Suspect]
     Active Substance: FAM-TRASTUZUMAB DERUXTECAN-NXKI
     Dosage: 472.5 MG, EVERY 3 WEEKS (MOST RECENT DOSE ON 28/DEC/2017) ^CUMULATIVE DOSE TO FIRST REACTION: 1014.0
     Dates: start: 20170612
  246. ENHERTU [Suspect]
     Active Substance: FAM-TRASTUZUMAB DERUXTECAN-NXKI
     Dosage: 420 MG, EVERY 3 WEEKS ^CUMULATIVE DOSE TO FIRST REACTION: 1014.097 MG
     Dates: start: 20160701, end: 20200727
  247. ENHERTU [Suspect]
     Active Substance: FAM-TRASTUZUMAB DERUXTECAN-NXKI
     Dosage: 451.5 MG, EVERY 3 WEEKS, ^CUMULATIVE DOSE TO FIRST REACTION: 1014.097 MG
     Route: 042
     Dates: start: 20170428, end: 20170519
  248. ENHERTU [Suspect]
     Active Substance: FAM-TRASTUZUMAB DERUXTECAN-NXKI
     Dosage: 472.5 MG EVERY 3 WEEKS (CUMULATIVE DOSE TO FIRST REACTION: 1014.097 MG) ADDITIONAL INFO: ROUTE:UNKNO
     Dates: start: 20170519, end: 20171228
  249. ENHERTU [Suspect]
     Active Substance: FAM-TRASTUZUMAB DERUXTECAN-NXKI
     Indication: HER2 positive breast cancer
     Dosage: 452 MG, ONCE EVERY 3 WK; INJECTION, POWDER, LYOPHILIZED, FOR SOLUTION CUMULATIVE DOSE TO FIRST REACT
     Route: 042
     Dates: start: 20161021, end: 20161111
  250. ENHERTU [Suspect]
     Active Substance: FAM-TRASTUZUMAB DERUXTECAN-NXKI
     Indication: Off label use
     Dosage: 452 MG, ONCE EVERY 3 WK
     Route: 042
     Dates: start: 20180831
  251. ENHERTU [Suspect]
     Active Substance: FAM-TRASTUZUMAB DERUXTECAN-NXKI
     Dosage: 420 MG, ONCE EVERY 3 WK
     Route: 042
     Dates: start: 20160701, end: 20160727
  252. ENHERTU [Suspect]
     Active Substance: FAM-TRASTUZUMAB DERUXTECAN-NXKI
     Dosage: 473 MG, ONCE EVERY 3 WK; INJECTION, POWDER, LYOPHILIZED, FOR SOLUTION (DOSE FORM: 120) (CUMULATIVE D
     Route: 042
     Dates: start: 20170519, end: 20171228
  253. ENHERTU [Suspect]
     Active Substance: FAM-TRASTUZUMAB DERUXTECAN-NXKI
     Dosage: 420 MG, ONCE EVERY 3 WK
     Route: 042
     Dates: start: 20170224, end: 20170407
  254. ENHERTU [Suspect]
     Active Substance: FAM-TRASTUZUMAB DERUXTECAN-NXKI
     Dosage: 567 MG, QD
     Route: 042
     Dates: start: 20160609, end: 20160609
  255. ENHERTU [Suspect]
     Active Substance: FAM-TRASTUZUMAB DERUXTECAN-NXKI
     Dosage: 441 MG, ONCE EVERY 3 WK (CUMULATIVE DOSE FOR FIRST REACTION : 1014.097 MG)
     Route: 042
     Dates: start: 20160907, end: 20160926
  256. ENHERTU [Suspect]
     Active Substance: FAM-TRASTUZUMAB DERUXTECAN-NXKI
     Dosage: 452 MG, ONCE EVERY 3 WK
     Route: 042
     Dates: start: 20180131
  257. ENHERTU [Suspect]
     Active Substance: FAM-TRASTUZUMAB DERUXTECAN-NXKI
     Dosage: 473 MG, ONCE EVERY 3 WK
     Route: 042
     Dates: start: 20170612
  258. ENHERTU [Suspect]
     Active Substance: FAM-TRASTUZUMAB DERUXTECAN-NXKI
     Dosage: 473 MG, ONCE EVERY 3 WK; INJECTION, POWDER, LYOPHILIZED, FOR SOLUTION CUMULATIVE DOSE TO FIRST REACT
     Route: 042
     Dates: start: 20170428, end: 20170519
  259. ENHERTU [Suspect]
     Active Substance: FAM-TRASTUZUMAB DERUXTECAN-NXKI
     Dosage: 420 MG, ONCE EVERY 3 WK;INJECTION, POWDER, LYOPHILIZED, FOR SOLUTION CUMULATIVE DOSE TO FIRST REACTI
     Route: 042
     Dates: start: 20160907, end: 20160926
  260. ENHERTU [Suspect]
     Active Substance: FAM-TRASTUZUMAB DERUXTECAN-NXKI
     Dosage: 452 MG, ONCE EVERY 3 WK
     Route: 042
     Dates: start: 20161202, end: 20170203
  261. ENHERTU [Suspect]
     Active Substance: FAM-TRASTUZUMAB DERUXTECAN-NXKI
     Dosage: 452 MG, ONCE EVERY 3 WK
     Route: 042
     Dates: start: 20161111, end: 20170519
  262. ENHERTU [Suspect]
     Active Substance: FAM-TRASTUZUMAB DERUXTECAN-NXKI
     Dosage: LOADING DOSE; INJECTION, POWDER, LYOPHILIZED, FOR SOLUTION (DOSE FORM: 120) (CUMULATIVE DOSE TO FIRS
     Route: 042
     Dates: start: 20170612, end: 20171228
  263. ENHERTU [Suspect]
     Active Substance: FAM-TRASTUZUMAB DERUXTECAN-NXKI
     Dosage: 452 MG, ONCE EVERY 3 WEEK
     Route: 042
     Dates: start: 20161111, end: 20170519
  264. ENHERTU [Suspect]
     Active Substance: FAM-TRASTUZUMAB DERUXTECAN-NXKI
     Dosage: 452 MG, ONCE EVERY 3 WEEK
     Route: 042
     Dates: start: 20161111, end: 20170419
  265. ENHERTU [Suspect]
     Active Substance: FAM-TRASTUZUMAB DERUXTECAN-NXKI
     Dosage: 420 MG, ONCE EVERY 3 WK
     Route: 042
     Dates: start: 20160602, end: 20170203
  266. ENHERTU [Suspect]
     Active Substance: FAM-TRASTUZUMAB DERUXTECAN-NXKI
     Dosage: 472.5 MILLIGRAM, Q3WK
     Route: 042
     Dates: start: 20170612
  267. ENHERTU [Suspect]
     Active Substance: FAM-TRASTUZUMAB DERUXTECAN-NXKI
     Dosage: 473 MILLIGRAM PER GRAM, Q3WK
     Route: 042
     Dates: start: 20170428, end: 20170519
  268. ENHERTU [Suspect]
     Active Substance: FAM-TRASTUZUMAB DERUXTECAN-NXKI
     Dosage: 420 MILLIGRAM, Q3WK (CUMULATIVE DOSE TO FIRST REACTION: 24500.834 MG)
     Route: 042
     Dates: start: 20160701, end: 20200727
  269. ENHERTU [Suspect]
     Active Substance: FAM-TRASTUZUMAB DERUXTECAN-NXKI
     Dosage: 451.5 MILLIGRAM, Q3WK
     Route: 042
     Dates: start: 20180831
  270. ENHERTU [Suspect]
     Active Substance: FAM-TRASTUZUMAB DERUXTECAN-NXKI
     Dosage: 451.5 MILLIGRAM, Q3WK CUMULATIVE DOSE TO FIRST REACTION: 24639.0 MG
     Route: 042
     Dates: start: 20161202, end: 20170203
  271. ENHERTU [Suspect]
     Active Substance: FAM-TRASTUZUMAB DERUXTECAN-NXKI
     Dosage: 451.5 MILLIGRAM, Q3WK 451.5 MG, EVERY 3 WEEKS; INJECTION, POWDER, LYOPHILIZED, FOR SOLUTION (DOSE FO
     Route: 042
     Dates: start: 20180131
  272. ENHERTU [Suspect]
     Active Substance: FAM-TRASTUZUMAB DERUXTECAN-NXKI
     Dosage: 451.5 MILLIGRAM, Q3WK
     Route: 042
     Dates: start: 20161111, end: 20170519
  273. ENHERTU [Suspect]
     Active Substance: FAM-TRASTUZUMAB DERUXTECAN-NXKI
     Dosage: 420 MG, Q3WK CUMULATIVE DOSE FOR FIRST REACTION : 1014.097 MG
     Route: 042
     Dates: start: 20161202, end: 20170203
  274. ENHERTU [Suspect]
     Active Substance: FAM-TRASTUZUMAB DERUXTECAN-NXKI
     Dosage: 452 MG, ONCE EVERY 3 WK, CUMULATIVE DOSE TO FIRST REACTION: 113967 MG
     Route: 042
     Dates: start: 20180131
  275. ENHERTU [Suspect]
     Active Substance: FAM-TRASTUZUMAB DERUXTECAN-NXKI
     Dosage: 452 MG, ONCE EVERY 3 WK, CUMULATIVE DOSE TO FIRST REACTION: 113967 MG
     Route: 042
     Dates: start: 20180831
  276. ENHERTU [Suspect]
     Active Substance: FAM-TRASTUZUMAB DERUXTECAN-NXKI
     Dosage: 473 MG, ONCE EVERY 3 WK, CUMULATIVE DOSE TO FIRST REACTION: 113967 MG
     Route: 042
     Dates: start: 20170428, end: 20170519
  277. ENHERTU [Suspect]
     Active Substance: FAM-TRASTUZUMAB DERUXTECAN-NXKI
     Dosage: 473 MG, ONCE EVERY 3 WK, CUMULATIVE DOSE TO FIRST REACTION: 113967 MG
     Route: 042
     Dates: start: 20170428, end: 20170519
  278. ENHERTU [Suspect]
     Active Substance: FAM-TRASTUZUMAB DERUXTECAN-NXKI
     Dosage: 452 MG, ONCE EVERY 3 WK, CUMULATIVE DOSE TO FIRST REACTION: 113967 MG
     Route: 042
     Dates: start: 20161202, end: 20170203
  279. ENHERTU [Suspect]
     Active Substance: FAM-TRASTUZUMAB DERUXTECAN-NXKI
     Dosage: 567 MG, QD, CUMULATIVE DOSE TO FIRST REACTION: 113967 MG
     Route: 042
     Dates: start: 20170612, end: 20171228
  280. ENHERTU [Suspect]
     Active Substance: FAM-TRASTUZUMAB DERUXTECAN-NXKI
     Dosage: 567 MG, QD, CUMULATIVE DOSE TO FIRST REACTION: 113967 MG
     Route: 042
     Dates: start: 20160619, end: 20160619
  281. ENHERTU [Suspect]
     Active Substance: FAM-TRASTUZUMAB DERUXTECAN-NXKI
     Dosage: 420 MG, ONCE EVERY 3 WK, CUMULATIVE DOSE TO FIRST REACTION: 113967 MG
     Route: 042
     Dates: start: 20170224, end: 20170407
  282. ENHERTU [Suspect]
     Active Substance: FAM-TRASTUZUMAB DERUXTECAN-NXKI
     Dosage: EVERY THREE WEEKS, CUMULATIVE DOSE TO FIRST REACTION: 113967 MG
     Route: 042
     Dates: start: 20161021, end: 20161111
  283. ENHERTU [Suspect]
     Active Substance: FAM-TRASTUZUMAB DERUXTECAN-NXKI
     Dosage: 420 MG, ONCE EVERY 3 WK, CUMULATIVE DOSE TO FIRST REACTION: 113967 MG/420 MILLIGRAM, Q3WK (CUMULATIV
     Route: 042
     Dates: start: 20160701, end: 20160727
  284. ENHERTU [Suspect]
     Active Substance: FAM-TRASTUZUMAB DERUXTECAN-NXKI
     Dosage: 473 MG, ONCE EVERY 3 WK, CUMULATIVE DOSE TO FIRST REACTION: 113967 MG
     Route: 042
     Dates: start: 20170519, end: 20171228
  285. ENHERTU [Suspect]
     Active Substance: FAM-TRASTUZUMAB DERUXTECAN-NXKI
     Dosage: 441 MG, ONCE EVERY 3 WK, CUMULATIVE DOSE TO FIRST REACTION: 113967 MG
     Route: 042
     Dates: start: 20160907, end: 20160926
  286. ENHERTU [Suspect]
     Active Substance: FAM-TRASTUZUMAB DERUXTECAN-NXKI
     Dosage: 451.5 MG, EVERY 3 WEEKS
     Route: 042
     Dates: start: 20161021, end: 20161111
  287. ENHERTU [Suspect]
     Active Substance: FAM-TRASTUZUMAB DERUXTECAN-NXKI
     Dosage: 452 MG, ONCE EVERY 3 WK, CUMULATIVE DOSE TO FIRST REACTION: 113967 MG
     Route: 042
     Dates: start: 20161111, end: 20170419
  288. ENHERTU [Suspect]
     Active Substance: FAM-TRASTUZUMAB DERUXTECAN-NXKI
     Dosage: 473 MG, Q2WEEKS (CUMULATIVE DOSE TO FIRST REACTION: 1014.097 MG)
     Dates: start: 20160609, end: 20170519
  289. ENHERTU [Suspect]
     Active Substance: FAM-TRASTUZUMAB DERUXTECAN-NXKI
     Dosage: 473 MG, ONCE EVERY 3 WK
     Route: 042
     Dates: start: 20170428, end: 20170519
  290. ENHERTU [Suspect]
     Active Substance: FAM-TRASTUZUMAB DERUXTECAN-NXKI
     Dosage: 420 MILLIGRAM, Q3W, START 24-FEB-2017 (CUMULATIVE DOSE TO FIRST REACTION 1014.097MG)
     Route: 042
     Dates: start: 20170407
  291. ENHERTU [Suspect]
     Active Substance: FAM-TRASTUZUMAB DERUXTECAN-NXKI
     Dosage: 415.5 MG, 3/WEEK (CUMULATIVE DOSE TO FIRST REACTION 1014.097MG)
     Route: 042
     Dates: start: 20161111, end: 20170519
  292. ENHERTU [Suspect]
     Active Substance: FAM-TRASTUZUMAB DERUXTECAN-NXKI
     Dosage: 473 MILLIGRAM, Q3W, START 28-APR-2017 (CUMULATIVE DOSE TO FIRST REACTION 1014.097MG)
     Route: 042
     Dates: start: 20170519
  293. ENHERTU [Suspect]
     Active Substance: FAM-TRASTUZUMAB DERUXTECAN-NXKI
     Dosage: 415.5 MILLIGRAM, Q3W (11-NOV-2016) (CUMULATIVE DOSE TO FIRST REACTION 1014.097MG)
     Route: 042
     Dates: start: 20170519, end: 20170519
  294. ENHERTU [Suspect]
     Active Substance: FAM-TRASTUZUMAB DERUXTECAN-NXKI
     Dosage: DURATION: 1 DAY LOADING DOSE; INJECTION, POWDER, LYOPHILIZED, FOR SOLUTION (CUMULATIVE DOSE TO FIRST
     Route: 042
     Dates: start: 20180831
  295. ENHERTU [Suspect]
     Active Substance: FAM-TRASTUZUMAB DERUXTECAN-NXKI
     Dosage: 473 MILLIGRAM, Q3W, START 19-MAY-2017 (CUMULATIVE DOSE TO FIRST REACTION: 1014.097 MG)
     Route: 042
     Dates: start: 20171228
  296. ENHERTU [Suspect]
     Active Substance: FAM-TRASTUZUMAB DERUXTECAN-NXKI
     Dosage: 451.5 MG, EVERY 3 WEEKS, INJECTION, POWDER, LYOPHILIZED, FOR SOLUTION (CUMULATIVE DOSE TO FIRST REAC
     Route: 042
     Dates: start: 20180131
  297. ENHERTU [Suspect]
     Active Substance: FAM-TRASTUZUMAB DERUXTECAN-NXKI
     Dosage: 441 MG, 3/WEEK (CUMULATIVE DOSE TO FIRST REACTION: 1014.097 MG)
     Route: 042
     Dates: start: 20160907, end: 20160926
  298. ENHERTU [Suspect]
     Active Substance: FAM-TRASTUZUMAB DERUXTECAN-NXKI
     Dosage: 451.5 MG, 3/WEEK (CUMULATIVE DOSE TO FIRST REACTION: 1014.097 MG)
     Route: 042
     Dates: start: 20161202, end: 20170203
  299. ENHERTU [Suspect]
     Active Substance: FAM-TRASTUZUMAB DERUXTECAN-NXKI
     Indication: HER2 positive breast cancer
     Dosage: 472.5 MG, 3/WEEK MOST RECENT DOSE ON 28-DEC-2017
     Route: 042
  300. ENHERTU [Suspect]
     Active Substance: FAM-TRASTUZUMAB DERUXTECAN-NXKI
     Indication: Off label use
     Dosage: 473 MG, EVERY 3 WEEK
     Route: 042
  301. ENHERTU [Suspect]
     Active Substance: FAM-TRASTUZUMAB DERUXTECAN-NXKI
     Dosage: 451.5 MILLIGRAM, Q3W, START 31-JAN-2018
     Route: 042
  302. ENHERTU [Suspect]
     Active Substance: FAM-TRASTUZUMAB DERUXTECAN-NXKI
     Dosage: 451.5 MILLIGRAM, Q3W (START DATE: 02-DEC-2016)
     Route: 042
     Dates: end: 20170203
  303. ENHERTU [Suspect]
     Active Substance: FAM-TRASTUZUMAB DERUXTECAN-NXKI
     Dosage: 451.5 MG, 3/WEEK
     Route: 042
     Dates: start: 20170428, end: 20170519
  304. ENHERTU [Suspect]
     Active Substance: FAM-TRASTUZUMAB DERUXTECAN-NXKI
     Dosage: 451.5 MILLIGRAM, Q3W (START 31-AUG-2018)
     Route: 042
  305. ENHERTU [Suspect]
     Active Substance: FAM-TRASTUZUMAB DERUXTECAN-NXKI
     Dosage: 420 MG, ONCE EVERY 3 WEEK
     Route: 042
     Dates: start: 20160701, end: 20160727
  306. ENHERTU [Suspect]
     Active Substance: FAM-TRASTUZUMAB DERUXTECAN-NXKI
     Dosage: 567 MG, QD; INJECTION, POWDER, LYOPHILIZED, FOR SOLUTION, LOADING DOSE
     Route: 042
     Dates: start: 20160609, end: 20160609
  307. ENHERTU [Suspect]
     Active Substance: FAM-TRASTUZUMAB DERUXTECAN-NXKI
     Dosage: 441 MILLIGRAM, Q3W, START 07-SEP-2016
     Route: 042
     Dates: end: 20160926
  308. ENHERTU [Suspect]
     Active Substance: FAM-TRASTUZUMAB DERUXTECAN-NXKI
     Dosage: 451.5 MILLIGRAM, Q3W (START DATE: 28-APR-2017)
     Route: 042
     Dates: end: 20170519
  309. ENHERTU [Suspect]
     Active Substance: FAM-TRASTUZUMAB DERUXTECAN-NXKI
     Dosage: 451.5 MG, EVERY 3 WEEKS; INJECTION, POWDER, LYOPHILIZED, FOR SOLUTION
     Route: 042
     Dates: start: 20161111, end: 20170519
  310. ENHERTU [Suspect]
     Active Substance: FAM-TRASTUZUMAB DERUXTECAN-NXKI
     Dosage: 420 MG, ONCE EVERY 3 WK; INJECTION, POWDER, LYOPHILIZED, FOR SOLUTION
     Route: 042
     Dates: start: 20160701, end: 20160727
  311. ENHERTU [Suspect]
     Active Substance: FAM-TRASTUZUMAB DERUXTECAN-NXKI
     Dosage: 452 MILLIGRAM, Q3W, START 21-OCT-2016
     Route: 042
     Dates: end: 20161111
  312. ENHERTU [Suspect]
     Active Substance: FAM-TRASTUZUMAB DERUXTECAN-NXKI
     Dosage: 451.5 MILLIGRAM, Q3W, START 11-NOV-2016
     Route: 042
     Dates: end: 20170519
  313. ENHERTU [Suspect]
     Active Substance: FAM-TRASTUZUMAB DERUXTECAN-NXKI
     Dosage: 420 MG, ONCE EVERY 3 WK; INJECTION, POWDER, LYOPHILIZED, FOR SOLUTION
     Route: 042
     Dates: start: 20170224, end: 20170407
  314. ENHERTU [Suspect]
     Active Substance: FAM-TRASTUZUMAB DERUXTECAN-NXKI
     Dosage: 452 MG, ONCE EVERY 3 WK; INJECTION, POWDER, LYOPHILIZED, FOR SOLUTION
     Route: 042
     Dates: start: 20161111, end: 20170519
  315. ENHERTU [Suspect]
     Active Substance: FAM-TRASTUZUMAB DERUXTECAN-NXKI
     Dosage: 452 MILLIGRAM, Q3W, START 11-NOV-2016
     Route: 042
     Dates: end: 20170519
  316. ENHERTU [Suspect]
     Active Substance: FAM-TRASTUZUMAB DERUXTECAN-NXKI
     Dosage: 420 MILLIGRAM, Q3W(420 MG, ONCE EVERY 3 WK)
     Route: 042
     Dates: start: 20160907, end: 20160926
  317. ENHERTU [Suspect]
     Active Substance: FAM-TRASTUZUMAB DERUXTECAN-NXKI
     Dosage: 472.5MG, Q3W (MOST RECENT DOSE ON 28/DEC/2017)
     Route: 042
  318. ENHERTU [Suspect]
     Active Substance: FAM-TRASTUZUMAB DERUXTECAN-NXKI
     Dosage: 420 MG, ONCE EVERY 3 WK; INJECTION, POWDER, LYOPHILIZED, FOR SOLUTION
     Route: 042
     Dates: start: 20160907, end: 20160926
  319. ENHERTU [Suspect]
     Active Substance: FAM-TRASTUZUMAB DERUXTECAN-NXKI
     Dosage: 452 MILLIGRAM, Q3W, START 11-NOV-2016
     Route: 042
     Dates: end: 20170519
  320. ENHERTU [Suspect]
     Active Substance: FAM-TRASTUZUMAB DERUXTECAN-NXKI
     Dosage: 473 MG, ONCE EVERY 3 WK; INJECTION, POWDER, LYOPHILIZED, FOR SOLUTION
     Route: 042
     Dates: start: 20170428, end: 20170519
  321. ENHERTU [Suspect]
     Active Substance: FAM-TRASTUZUMAB DERUXTECAN-NXKI
     Dosage: 451.5 MG, EVERY 3 WEEKS; INJECTION, POWDER, LYOPHILIZED, FOR SOLUTION
     Route: 042
     Dates: start: 20180831
  322. ENHERTU [Suspect]
     Active Substance: FAM-TRASTUZUMAB DERUXTECAN-NXKI
     Indication: HER2 positive breast cancer
     Dosage: 472.5 MG, 3/WEEK LOADING DOSE CUMULATIVE DOSE FOR FIRST REACTION :1014.097 MG
     Route: 042
     Dates: start: 20170519, end: 20171228
  323. ENHERTU [Suspect]
     Active Substance: FAM-TRASTUZUMAB DERUXTECAN-NXKI
     Indication: Off label use
     Dosage: 420 MG, 3/WEEK CUMULATIVE DOSE FOR FIRST REACTION :1014.097 MG
     Route: 042
     Dates: start: 20170224, end: 20170407
  324. PERTUZUMAB [Suspect]
     Active Substance: PERTUZUMAB
     Indication: HER2 positive breast cancer
     Dosage: 420 MG, EVERY 3 WEEKS (DOSE FORM: 120) CUMULATIVE DOSE TO FIRST REACTION: 26000.834 MG
     Route: 042
     Dates: start: 20160701, end: 20171228
  325. PERTUZUMAB [Suspect]
     Active Substance: PERTUZUMAB
     Indication: Breast cancer metastatic
     Dosage: 840 MG, QD (DOSE FORM: 120) CUMULATIVE DOSE TO FIRST REACTION: 1110515.0 MG
     Route: 042
     Dates: start: 20160609, end: 20160609
  326. PERTUZUMAB [Suspect]
     Active Substance: PERTUZUMAB
     Dosage: 840MG, QD (LOADING DOSE, INFUSION, SOLUTION)
     Route: 042
     Dates: start: 20160609
  327. PERTUZUMAB [Suspect]
     Active Substance: PERTUZUMAB
     Dosage: 420 MG, EVERY 3 WEEKS (PHARMACEUTICAL DOSE FORM: 230; CUMULATIVE DOSE TO FIRST REACTION: 420MG)
     Route: 042
     Dates: start: 20160701, end: 20171228
  328. PERTUZUMAB [Suspect]
     Active Substance: PERTUZUMAB
     Dosage: 420 MG, EVERY 3 WEEKS (PHARMACEUTICAL DOSE FORM: 230; CUMULATIVE DOSE TO FIRST REACTION: 420MG)
     Route: 042
     Dates: start: 20160701, end: 20171228
  329. PERTUZUMAB [Suspect]
     Active Substance: PERTUZUMAB
     Dosage: INFUSION, SOLUTION
     Route: 042
     Dates: start: 20160701
  330. PERTUZUMAB [Suspect]
     Active Substance: PERTUZUMAB
     Dosage: 840 MG, QD, LOADING DOSE (DOSE FORM: 230)
     Route: 042
     Dates: start: 20160609, end: 20160609
  331. PERTUZUMAB [Suspect]
     Active Substance: PERTUZUMAB
     Dosage: 840 MG, QD, LOADING DOSE (DOSE FORM: 230)
     Route: 042
     Dates: start: 20160609, end: 20160609
  332. PERTUZUMAB [Suspect]
     Active Substance: PERTUZUMAB
     Dosage: 420MG, EVERY 3 WEEKS (PHARMACEUTICAL DOSE: 120)
     Route: 042
     Dates: start: 20160701, end: 20171228
  333. PERTUZUMAB [Suspect]
     Active Substance: PERTUZUMAB
     Dosage: 420MG, EVERY 3 WEEKS (PHARMACEUTICAL DOSE: 293)
     Route: 042
     Dates: start: 20160701
  334. PERTUZUMAB [Suspect]
     Active Substance: PERTUZUMAB
     Dosage: 840 MG, QD, ( PHARMACEUTICAL DOSE FORM: 120)
     Route: 042
     Dates: start: 20160609, end: 20160609
  335. PERTUZUMAB [Suspect]
     Active Substance: PERTUZUMAB
     Dosage: 420MG, 3 WEEK
     Route: 042
     Dates: start: 20160701
  336. PERTUZUMAB [Suspect]
     Active Substance: PERTUZUMAB
     Dosage: 840MG, ONCE A DAY
     Route: 042
     Dates: start: 20160609
  337. PERTUZUMAB [Suspect]
     Active Substance: PERTUZUMAB
     Dosage: UNK
  338. PERTUZUMAB [Suspect]
     Active Substance: PERTUZUMAB
     Dosage: 840 MG, EVERY 3 WEEK (LOADING DOSE)
     Route: 042
     Dates: start: 20160609, end: 20160609
  339. PERTUZUMAB [Suspect]
     Active Substance: PERTUZUMAB
     Dosage: 420MG, EVERY 3 WEEKS, MOST RECENT DOSE 28/DEC/2017
     Route: 042
     Dates: start: 20160701
  340. PERTUZUMAB [Suspect]
     Active Substance: PERTUZUMAB
     Dosage: 840 MG, EVERY 2 DAYS, 840MG, Q3W (840 MG, Q3WK), LOADING DOSE
     Route: 042
     Dates: start: 20160609, end: 20160609
  341. PERTUZUMAB [Suspect]
     Active Substance: PERTUZUMAB
     Dosage: 420 MG, EVERY 3 WEEKS (CUMULATIVE DOSE TO FIRST REACTION: 840 MG)
     Dates: start: 20160701, end: 20171228
  342. PERTUZUMAB [Suspect]
     Active Substance: PERTUZUMAB
     Dosage: 840 MG, EVERY 2 DAYS, 840MG, Q3W (840 MG, Q3WK), LOADING DOSE (CUMULATIVE DOSE TO FIRST REACTION: 84
     Dates: start: 20160609, end: 20160609
  343. PERTUZUMAB [Suspect]
     Active Substance: PERTUZUMAB
     Dosage: 420MG, EVERY 3 WEEKS, MOST RECENT DOSE 28/DEC/2017 (CUMULATIVE DOSE TO FIRST REACTION: 420.0 MG)
     Route: 042
     Dates: start: 20160701
  344. PERTUZUMAB [Suspect]
     Active Substance: PERTUZUMAB
     Dosage: 840 MG, EVERY 3 WEEK (LOADING DOSE) (CUMULATIVE DOSE TO FIRST REACTION: 1719.99999 MG)
     Route: 042
     Dates: start: 20160609, end: 20160609
  345. PERTUZUMAB [Suspect]
     Active Substance: PERTUZUMAB
     Indication: HER2 positive breast cancer
     Dosage: 840 MG, QD INJECTION CUMULATIVE DOSE TO FIRST REACTION: 1110515.0 MG
     Route: 042
     Dates: start: 20160609, end: 20160609
  346. PERTUZUMAB [Suspect]
     Active Substance: PERTUZUMAB
     Dosage: 420 MG EVERY 3 WEEK, INJECTION CUMULATIVE DOSE TO FIRST REACTION: 26000.834 MG
     Route: 042
     Dates: start: 20160701, end: 20171228
  347. PERTUZUMAB [Suspect]
     Active Substance: PERTUZUMAB
     Dosage: 840 MG, QD (LOADING DOSE/DOSE FORM: 230), INJECTION (CUMULATIVE DOSE: 1680 MG)
     Route: 042
     Dates: start: 20160609, end: 20160609
  348. PERTUZUMAB [Suspect]
     Active Substance: PERTUZUMAB
     Dosage: 420 MG EVERY 3 WEEK (DOSE FORM: 230) (CUMULATIVE DOSE: 1680 MG)
     Route: 042
     Dates: start: 20160701, end: 20171228
  349. PERTUZUMAB [Suspect]
     Active Substance: PERTUZUMAB
     Dosage: 840 MG, ONCE EVERY 3 WK (CUMULATIVE DOSE: 7980MG)
     Route: 042
     Dates: start: 20160609, end: 20160609
  350. PERTUZUMAB [Suspect]
     Active Substance: PERTUZUMAB
     Dosage: 420 MG, ONCE EVERY 3 WK (CUMULATIVE DOSE: 7980MG)
     Route: 042
     Dates: start: 20160701, end: 20171228
  351. PERTUZUMAB [Suspect]
     Active Substance: PERTUZUMAB
     Dosage: 840 MG, ONCE EVERY 3 WK, CUMULATIVE DOSE TO FIRST REACTION: 11760 MG
     Route: 042
     Dates: start: 20160609, end: 20160609
  352. PERTUZUMAB [Suspect]
     Active Substance: PERTUZUMAB
     Dosage: 420 MG, ONCE EVERY 3 WK, CUMULATIVE DOSE TO FIRST REACTION: 11760 MG
     Route: 042
     Dates: start: 20160701, end: 20171228
  353. PERTUZUMAB [Suspect]
     Active Substance: PERTUZUMAB
     Dosage: 420 MG EVERY 3 WEEK, INJECTION CUMULATIVE DOSE TO FIRST REACTION: 26000.834 MG
     Dates: start: 20160701, end: 20171228
  354. PERTUZUMAB [Suspect]
     Active Substance: PERTUZUMAB
     Dosage: 840 MG, QD (CUMULATIVE DOSE TO FIRST REACTION: 840 MG)
     Route: 042
     Dates: start: 20160609, end: 20160609
  355. PERTUZUMAB [Suspect]
     Active Substance: PERTUZUMAB
     Dosage: 420 MILLIGRAM, ONCE EVERY 3 WK; (CUMULATIVE DOSE TO FIRST REACTION: 840 MG)
     Route: 042
     Dates: start: 20160701, end: 20171228
  356. PERTUZUMAB [Suspect]
     Active Substance: PERTUZUMAB
     Indication: HER2 positive breast cancer
     Dosage: 840 MG (LOADING DOSE) (DOSE FORM: 230)
     Route: 042
     Dates: start: 20160609, end: 20160609
  357. PERTUZUMAB [Suspect]
     Active Substance: PERTUZUMAB
     Dosage: 420 MG, Q3W (INFUSION, SOLUTION) (DOSE FORM: 230)
     Route: 042
     Dates: start: 20160609, end: 20160609
  358. PERTUZUMAB [Suspect]
     Active Substance: PERTUZUMAB
     Dosage: UNK
  359. PERTUZUMAB [Suspect]
     Active Substance: PERTUZUMAB
     Dosage: 840 MG (LOADING DOSE) EVERY 3 WEEKS
     Route: 042
     Dates: start: 20160609, end: 20160609
  360. PERTUZUMAB [Suspect]
     Active Substance: PERTUZUMAB
     Dosage: 420 MG, Q3W (INFUSION, SOLUTION) EVERY 3 WEEKS
     Route: 042
     Dates: start: 20160701, end: 20171228
  361. TAMOXIFEN [Suspect]
     Active Substance: TAMOXIFEN
     Indication: HER2 positive breast cancer
     Dosage: 20 MG
     Route: 048
     Dates: start: 20170623, end: 20171228
  362. TAMOXIFEN [Suspect]
     Active Substance: TAMOXIFEN
     Indication: Breast cancer metastatic
     Dosage: 20 MG, QD (MOST RECENT DOSE ON 05/JUN/2018) (DOSE FORM: 245) (CUMULATIVE DOSE: 2260MG)
     Route: 048
     Dates: start: 20180213, end: 20180605
  363. TAMOXIFEN [Suspect]
     Active Substance: TAMOXIFEN
     Dosage: 20 MILLIGRAM, QD, MOST RECENT DOSE ON 05/JUN/2018 (PHARMACEUTICAL DOSE FORM: 245)
     Route: 065
     Dates: start: 20180213, end: 20180605
  364. TAMOXIFEN [Suspect]
     Active Substance: TAMOXIFEN
     Dosage: UNK
     Route: 065
     Dates: start: 20170623, end: 20171228
  365. TAMOXIFEN [Suspect]
     Active Substance: TAMOXIFEN
     Dosage: UNK
     Route: 065
     Dates: start: 20170623, end: 20171228
  366. TAMOXIFEN [Suspect]
     Active Substance: TAMOXIFEN
     Dosage: UNK; ;
     Route: 065
     Dates: start: 20180213, end: 20180605
  367. TAMOXIFEN [Suspect]
     Active Substance: TAMOXIFEN
     Dosage: MOST RECENT DOSE ON 05/JUN/2018
     Route: 048
     Dates: start: 20180213, end: 20180605
  368. TAMOXIFEN [Suspect]
     Active Substance: TAMOXIFEN
     Dosage: MOST RECENT DOSE ON 05/JUN/2018
     Route: 048
     Dates: start: 20180213, end: 20180605
  369. TAMOXIFEN [Suspect]
     Active Substance: TAMOXIFEN
     Dosage: UNK (DOSE FORM: 245)
     Route: 048
     Dates: start: 20170623, end: 20171228
  370. TAMOXIFEN [Suspect]
     Active Substance: TAMOXIFEN
     Dosage: UNK (DOSE FORM: 245)
     Route: 048
     Dates: start: 20170623, end: 20171228
  371. TAMOXIFEN [Suspect]
     Active Substance: TAMOXIFEN
     Dosage: UNK
     Route: 048
     Dates: start: 20170623, end: 20171228
  372. TAMOXIFEN [Suspect]
     Active Substance: TAMOXIFEN
     Dosage: UNK UNK, ONCE A DAY
     Route: 042
     Dates: start: 20170623, end: 20171228
  373. TAMOXIFEN [Suspect]
     Active Substance: TAMOXIFEN
     Dosage: UNK UNK, ONCE A DAY
     Route: 042
     Dates: start: 20180213, end: 20180605
  374. TAMOXIFEN [Suspect]
     Active Substance: TAMOXIFEN
     Dosage: UNK, QD (MOST RECENT DOSE ON 05/JUN/2018)
     Route: 048
     Dates: start: 20180213, end: 20180605
  375. TAMOXIFEN [Suspect]
     Active Substance: TAMOXIFEN
     Dosage: UNK, QD (MOST RECENT DOSE ON 05/JUN/2018)
     Route: 048
     Dates: start: 20180213, end: 20180605
  376. TAMOXIFEN [Suspect]
     Active Substance: TAMOXIFEN
     Indication: HER2 positive breast cancer
     Dosage: UNK, QD
     Route: 042
     Dates: start: 20170623, end: 20171228
  377. TAMOXIFEN [Suspect]
     Active Substance: TAMOXIFEN
     Dosage: UNK, QD (MOST RECENT DOSE ON 05/JUN/2018)
     Route: 042
     Dates: start: 20180213, end: 20180605
  378. TAMOXIFEN [Suspect]
     Active Substance: TAMOXIFEN
     Dosage: UNK, QD
     Route: 048
     Dates: start: 20170623, end: 20171228
  379. TAMOXIFEN [Suspect]
     Active Substance: TAMOXIFEN
     Dosage: UNK, QD (MOST RECENT DOSE ON 05/JUN/2018)
     Route: 048
     Dates: start: 20180213, end: 20180605
  380. TAMOXIFEN [Suspect]
     Active Substance: TAMOXIFEN
     Dosage: UNK
     Route: 048
     Dates: start: 20180213, end: 20180605
  381. TAMOXIFEN [Suspect]
     Active Substance: TAMOXIFEN
     Dosage: UNK
     Route: 042
     Dates: start: 20170623, end: 20171228
  382. TAMOXIFEN [Suspect]
     Active Substance: TAMOXIFEN
     Indication: HER2 positive breast cancer
     Dosage: 20 MG, QD CUMULATIVE DOSE TO FIRST REACTION: 18860.834 MG
     Route: 048
     Dates: start: 20170623, end: 20171228
  383. TAMOXIFEN [Suspect]
     Active Substance: TAMOXIFEN
     Dosage: 20 MG, QD (CUMULATIVE DOSE TO FIRST REACTION: 2260 MG)
     Route: 048
     Dates: start: 20180213, end: 20180605
  384. TAMOXIFEN [Suspect]
     Active Substance: TAMOXIFEN
     Dosage: 20 MG, QD (CUMULATIVE DOSE TO FIRST REACTION: 2260 MG)
     Route: 048
     Dates: start: 20180213, end: 20180605
  385. TAMOXIFEN [Suspect]
     Active Substance: TAMOXIFEN
     Dosage: 20 MG, QD CUMULATIVE DOSE TO FIRST REACTION: 2260 MG
     Route: 048
     Dates: start: 20170623, end: 20171228
  386. TAMOXIFEN [Suspect]
     Active Substance: TAMOXIFEN
     Dosage: UNK (MOST RECENT DOSE ON 05/JUN/2018) CUMULATIVE DOSE TO FIRST REACTION: 2260 MG
     Route: 048
     Dates: start: 20180213, end: 20180605
  387. TAMOXIFEN [Suspect]
     Active Substance: TAMOXIFEN
     Dosage: UNK, QD
     Route: 048
     Dates: start: 20170623, end: 20171228
  388. TAMOXIFEN [Suspect]
     Active Substance: TAMOXIFEN
     Dosage: 20 MILLIGRAM, QD (20 MILLIGRAM, QD)
     Route: 048
     Dates: start: 20170623, end: 20171228
  389. TAMOXIFEN [Suspect]
     Active Substance: TAMOXIFEN
     Dosage: EVERY 1 DAY, UNK (DOSE FORM: 245);
     Dates: start: 20170623, end: 20171228
  390. TAMOXIFEN CITRATE [Suspect]
     Active Substance: TAMOXIFEN CITRATE
     Indication: HER2 positive breast cancer
     Dosage: UNK
     Route: 065
     Dates: start: 20170623, end: 20171228
  391. TAMOXIFEN CITRATE [Suspect]
     Active Substance: TAMOXIFEN CITRATE
     Dosage: UNK
     Route: 065
     Dates: start: 20180213, end: 20180605
  392. TAMOXIFEN CITRATE [Suspect]
     Active Substance: TAMOXIFEN CITRATE
     Dosage: UNK; ; (DOSE FORM: 245)
     Route: 048
     Dates: start: 20170623, end: 20171228
  393. TAMOXIFEN CITRATE [Suspect]
     Active Substance: TAMOXIFEN CITRATE
     Dosage: 20 MG, QD (MOST RECENT DOSE ON 05/JUN/2018) (DOSE FORM: 245)
     Route: 048
     Dates: start: 20180213, end: 20180605
  394. TAMOXIFEN CITRATE [Suspect]
     Active Substance: TAMOXIFEN CITRATE
     Dosage: UNK
  395. TAMOXIFEN CITRATE [Suspect]
     Active Substance: TAMOXIFEN CITRATE
     Dosage: 20 MG (CUMULATIVE DOSE: 2260 MG)
     Route: 042
     Dates: start: 20170623, end: 20171228
  396. TAMOXIFEN CITRATE [Suspect]
     Active Substance: TAMOXIFEN CITRATE
     Dosage: 20 MG
     Route: 048
     Dates: start: 20170623, end: 20171228
  397. TAMOXIFEN CITRATE [Suspect]
     Active Substance: TAMOXIFEN CITRATE
     Indication: Product used for unknown indication
     Dosage: 20 MILLIGRAM, QD
     Route: 042
     Dates: start: 20180213, end: 20180605
  398. TAMOXIFEN CITRATE [Suspect]
     Active Substance: TAMOXIFEN CITRATE
     Dosage: 20 MG
     Route: 042
     Dates: start: 20170623, end: 20171228
  399. TAMOXIFEN CITRATE [Suspect]
     Active Substance: TAMOXIFEN CITRATE
     Dosage: 20 MILLIGRAM, QD, CUMULATIVE DOSE TO FIRST REACTION: 11420.833 MG
     Route: 042
     Dates: start: 20180213, end: 20180605
  400. TAMOXIFEN CITRATE [Suspect]
     Active Substance: TAMOXIFEN CITRATE
     Dosage: 20 MILLIGRAM (CUMULATIVE DOSE TO FIRST REACTION: 2260 MG)
     Dates: start: 20170623, end: 20171228
  401. TAMOXIFEN CITRATE [Suspect]
     Active Substance: TAMOXIFEN CITRATE
     Dosage: 20 MG; (CUMULATIVE DOSE TO FIRST REACTION: 11420.833 MG)
     Route: 042
     Dates: start: 20170623, end: 20171228
  402. TRASTUZUMAB DERUXTECAN [Suspect]
     Active Substance: TRASTUZUMAB DERUXTECAN
     Indication: HER2 positive breast cancer
     Dosage: 452 MG EVERY 3 WEEK
     Route: 042
     Dates: start: 20161202, end: 20170203
  403. TRASTUZUMAB DERUXTECAN [Suspect]
     Active Substance: TRASTUZUMAB DERUXTECAN
     Dosage: 420 MG EVERY 3 WEEK
     Route: 042
  404. TRASTUZUMAB DERUXTECAN [Suspect]
     Active Substance: TRASTUZUMAB DERUXTECAN
     Dosage: 440 MG EVERY 3 WEEK
     Route: 042
     Dates: start: 20170224, end: 20170407
  405. TRASTUZUMAB DERUXTECAN [Suspect]
     Active Substance: TRASTUZUMAB DERUXTECAN
     Dosage: 452 MG EVERY 3 WEEK
     Route: 042
     Dates: start: 20161111, end: 20170519
  406. TRASTUZUMAB DERUXTECAN [Suspect]
     Active Substance: TRASTUZUMAB DERUXTECAN
     Dosage: 473 MG EVERY 3 WEEK
     Route: 042
     Dates: start: 20170428, end: 20170519
  407. TRASTUZUMAB DERUXTECAN [Suspect]
     Active Substance: TRASTUZUMAB DERUXTECAN
     Dosage: 452 MG EVERY 3 WEEK
     Route: 042
     Dates: start: 20180831
  408. TRASTUZUMAB DERUXTECAN [Suspect]
     Active Substance: TRASTUZUMAB DERUXTECAN
     Dosage: 441 MG EVERY 3 WEEK
     Route: 042
     Dates: start: 20160907, end: 20160926
  409. TRASTUZUMAB DERUXTECAN [Suspect]
     Active Substance: TRASTUZUMAB DERUXTECAN
     Dosage: 473 MG EVERY 3 WEEK
     Route: 042
     Dates: start: 20170612, end: 20171228
  410. TRASTUZUMAB DERUXTECAN [Suspect]
     Active Substance: TRASTUZUMAB DERUXTECAN
     Dosage: 473 MG EVERY 3 WEEK
     Route: 042
     Dates: start: 20170519, end: 20171228
  411. FAM-TRASTUZUMAB DERUXTECAN-NXKI [Suspect]
     Active Substance: FAM-TRASTUZUMAB DERUXTECAN-NXKI
     Indication: HER2 positive breast cancer
     Dosage: 440 MILLIGRAM, EVERY 3 WEEKS
     Route: 042
     Dates: start: 20170224, end: 20170407
  412. FAM-TRASTUZUMAB DERUXTECAN-NXKI [Suspect]
     Active Substance: FAM-TRASTUZUMAB DERUXTECAN-NXKI
     Dosage: 420 MILLIGRAM, EVERY 3 WEEKS
     Route: 042
  413. FAM-TRASTUZUMAB DERUXTECAN-NXKI [Suspect]
     Active Substance: FAM-TRASTUZUMAB DERUXTECAN-NXKI
     Dosage: 452 MILLIGRAM, EVERY 3 WEEKS
     Route: 042
     Dates: start: 20161202, end: 20170203
  414. FAM-TRASTUZUMAB DERUXTECAN-NXKI [Suspect]
     Active Substance: FAM-TRASTUZUMAB DERUXTECAN-NXKI
     Dosage: 473 MILLIGRAM, EVERY 3 WEEKS
     Route: 042
     Dates: start: 20170612, end: 20171228
  415. FAM-TRASTUZUMAB DERUXTECAN-NXKI [Suspect]
     Active Substance: FAM-TRASTUZUMAB DERUXTECAN-NXKI
     Dosage: 441 MILLIGRAM, EVERY 3 WEEKS
     Route: 042
     Dates: start: 20160907, end: 20160926
  416. FAM-TRASTUZUMAB DERUXTECAN-NXKI [Suspect]
     Active Substance: FAM-TRASTUZUMAB DERUXTECAN-NXKI
     Dosage: 452 MILLIGRAM, EVERY 3 WEEKS
     Route: 042
     Dates: start: 20161111, end: 20170519
  417. FAM-TRASTUZUMAB DERUXTECAN-NXKI [Suspect]
     Active Substance: FAM-TRASTUZUMAB DERUXTECAN-NXKI
     Dosage: 473 MILLIGRAM, EVERY 3 WEEKS
     Route: 042
     Dates: start: 20170519, end: 20171228
  418. FAM-TRASTUZUMAB DERUXTECAN-NXKI [Suspect]
     Active Substance: FAM-TRASTUZUMAB DERUXTECAN-NXKI
     Dosage: 452 MILLIGRAM, EVERY 3 WEEKS
     Route: 042
     Dates: start: 20180831
  419. FAM-TRASTUZUMAB DERUXTECAN-NXKI [Suspect]
     Active Substance: FAM-TRASTUZUMAB DERUXTECAN-NXKI
     Dosage: 473 MILLIGRAM, EVERY 3 WEEKS
     Route: 042
     Dates: start: 20170428, end: 20170519
  420. ADO-TRASTUZUMAB EMTANSINE [Suspect]
     Active Substance: ADO-TRASTUZUMAB EMTANSINE
     Indication: HER2 positive breast cancer
     Dosage: 280 MG, EVERY 3 WEEKS (CUMULATIVE DOSE: 7440.5557MG )
     Route: 041
     Dates: start: 20180131
  421. ADO-TRASTUZUMAB EMTANSINE [Suspect]
     Active Substance: ADO-TRASTUZUMAB EMTANSINE
     Indication: Breast cancer metastatic
     Dosage: 280 MG, EVERY 1 DAY (INFUSION, SOLUTION) (DOSE FORM: 293) CUMULATIVE DOSE TO FIRST REACTION: 14420.0
     Route: 042
     Dates: start: 20180131, end: 20180131
  422. ADO-TRASTUZUMAB EMTANSINE [Suspect]
     Active Substance: ADO-TRASTUZUMAB EMTANSINE
     Dosage: 280 MILLIGRAM EVERY 3 WEEKS (DOSE FORM: 230; CUMULATIVE DOSE: 7440.5557MG)
     Route: 042
     Dates: start: 20180131, end: 20180131
  423. ADO-TRASTUZUMAB EMTANSINE [Suspect]
     Active Substance: ADO-TRASTUZUMAB EMTANSINE
     Dosage: 280 MILLIGRAM (START 31-JAN-2018)
     Route: 042
     Dates: start: 20180131, end: 20180131
  424. ADO-TRASTUZUMAB EMTANSINE [Suspect]
     Active Substance: ADO-TRASTUZUMAB EMTANSINE
     Dosage: 280 MG (DOSE FORM:293)
     Route: 042
     Dates: start: 20180131, end: 20180131
  425. ADO-TRASTUZUMAB EMTANSINE [Suspect]
     Active Substance: ADO-TRASTUZUMAB EMTANSINE
     Dosage: 280 MG, Q3W (DOSE FORM: 230)
     Route: 042
     Dates: start: 20180131, end: 20180131
  426. ADO-TRASTUZUMAB EMTANSINE [Suspect]
     Active Substance: ADO-TRASTUZUMAB EMTANSINE
     Dosage: UNK; ; (DOSE FORM: 230)
     Route: 042
     Dates: start: 20180131
  427. ADO-TRASTUZUMAB EMTANSINE [Suspect]
     Active Substance: ADO-TRASTUZUMAB EMTANSINE
     Dosage: 430 MILLIGRAM, 3 WEEKS
     Route: 042
     Dates: start: 20170724, end: 20180407
  428. ADO-TRASTUZUMAB EMTANSINE [Suspect]
     Active Substance: ADO-TRASTUZUMAB EMTANSINE
     Dosage: 420 MILLIGRAM, 3 WEEKS (CUMULATIVE DOSE: 940MG)
     Route: 042
     Dates: start: 20160907, end: 20160926
  429. ADO-TRASTUZUMAB EMTANSINE [Suspect]
     Active Substance: ADO-TRASTUZUMAB EMTANSINE
     Dosage: 420 MILLIGRAM, 3 WEEKS
     Route: 042
     Dates: start: 20160609, end: 20160609
  430. ADO-TRASTUZUMAB EMTANSINE [Suspect]
     Active Substance: ADO-TRASTUZUMAB EMTANSINE
     Dosage: 430 MILLIGRAM, 3 WEEKS, CUMULATIVE DOSE TO FIRST REACTION: 7011 MG
     Route: 042
     Dates: start: 20170724, end: 20180407
  431. ADO-TRASTUZUMAB EMTANSINE [Suspect]
     Active Substance: ADO-TRASTUZUMAB EMTANSINE
     Dosage: 441 MILLIGRAM, 3 WEEKS, CUMULATIVE DOSE TO FIRST REACTION: 7011 MG
     Route: 042
     Dates: start: 20160202, end: 20160203
  432. ADO-TRASTUZUMAB EMTANSINE [Suspect]
     Active Substance: ADO-TRASTUZUMAB EMTANSINE
     Dosage: 441 MILLIGRAM, 3 WEEKS, CUMULATIVE DOSE TO FIRST REACTION: 7011 MG
     Route: 042
     Dates: start: 20180831, end: 20180831
  433. ADO-TRASTUZUMAB EMTANSINE [Suspect]
     Active Substance: ADO-TRASTUZUMAB EMTANSINE
     Dosage: 420 MILLIGRAM, 3 WEEKS, CUMULATIVE DOSE TO FIRST REACTION: 7011 MG
     Route: 042
     Dates: start: 20160907, end: 20160926
  434. ADO-TRASTUZUMAB EMTANSINE [Suspect]
     Active Substance: ADO-TRASTUZUMAB EMTANSINE
     Dosage: 280 MILLIGRAM EVERY 3 WEEKS (DOSE FORM: 230; CUMULATIVE DOSE: 7440.5557MG), CUMULATIVE DOSE TO FIRST
     Route: 042
     Dates: start: 20160609, end: 20160609
  435. ADO-TRASTUZUMAB EMTANSINE [Suspect]
     Active Substance: ADO-TRASTUZUMAB EMTANSINE
     Dosage: 430MG, ONCE EVERY 3 WK (CUMULATIVE DOSE: 7514.7617MG )
     Route: 042
     Dates: start: 20170724, end: 20180407
  436. ADO-TRASTUZUMAB EMTANSINE [Suspect]
     Active Substance: ADO-TRASTUZUMAB EMTANSINE
     Dosage: 441 MG, ONCE EVERY 3 WK (CUMULATIVE DOSE: 3590.125MG )
     Route: 042
     Dates: start: 20160202, end: 20160203
  437. ADO-TRASTUZUMAB EMTANSINE [Suspect]
     Active Substance: ADO-TRASTUZUMAB EMTANSINE
     Dosage: 280 MG, ONCE EVERY 3 WK (CUMULATIVE DOSE: 573.3333MG)
     Route: 042
     Dates: start: 20160609, end: 20160609
  438. ADO-TRASTUZUMAB EMTANSINE [Suspect]
     Active Substance: ADO-TRASTUZUMAB EMTANSINE
     Dosage: MOST RECENT DOSE 31/JAN/2018
     Route: 042
     Dates: start: 20180131
  439. ADO-TRASTUZUMAB EMTANSINE [Suspect]
     Active Substance: ADO-TRASTUZUMAB EMTANSINE
     Dosage: 420 MILLIGRAM, 3 WEEKS (CUMULATIVE DOSE TO FIRST REACTION: 7514.7617 MG)
     Route: 042
     Dates: start: 20160907, end: 20160926
  440. ADO-TRASTUZUMAB EMTANSINE [Suspect]
     Active Substance: ADO-TRASTUZUMAB EMTANSINE
     Dosage: 441 MG, ONCE EVERY 3 WK (CUMULATIVE DOSE TO FIRST REACTION: 7514.7617 MG)
     Route: 042
     Dates: start: 20160202, end: 20160203
  441. ADO-TRASTUZUMAB EMTANSINE [Suspect]
     Active Substance: ADO-TRASTUZUMAB EMTANSINE
     Dosage: 567 MILLIGRAM, ONCE A DAY (LOADING DOSE); (CUMULATIVE DOSE TO FIRST REACTION: 7514.7617 MG)
     Route: 042
     Dates: start: 20160609, end: 20160609
  442. ADO-TRASTUZUMAB EMTANSINE [Suspect]
     Active Substance: ADO-TRASTUZUMAB EMTANSINE
     Indication: HER2 positive breast cancer
     Dosage: 280 MG, ONCE EVERY 3 WK
     Route: 042
     Dates: start: 20180131, end: 20180131
  443. ADO-TRASTUZUMAB EMTANSINE [Suspect]
     Active Substance: ADO-TRASTUZUMAB EMTANSINE
     Indication: Breast cancer metastatic
     Dosage: 430 MG, ONCE EVERY 3 WK (CUMULATIVE DOSE TO FIRST REACTION: 7514.7617 MG)
     Route: 042
     Dates: start: 20170724, end: 20180407
  444. ADO-TRASTUZUMAB EMTANSINE [Suspect]
     Active Substance: ADO-TRASTUZUMAB EMTANSINE
     Dosage: 420 MG, ONCE EVERY 3 WK
     Route: 042
     Dates: start: 20160907, end: 20160926
  445. ADO-TRASTUZUMAB EMTANSINE [Suspect]
     Active Substance: ADO-TRASTUZUMAB EMTANSINE
     Dosage: 280 MG, ONCE EVERY 3 WK
     Route: 042
     Dates: start: 20160609, end: 20160609
  446. ADO-TRASTUZUMAB EMTANSINE [Suspect]
     Active Substance: ADO-TRASTUZUMAB EMTANSINE
     Dosage: 441 MG, ONCE EVERY 3 WK
     Route: 042
     Dates: start: 20160202, end: 20160203
  447. ADO-TRASTUZUMAB EMTANSINE [Suspect]
     Active Substance: ADO-TRASTUZUMAB EMTANSINE
     Dosage: 451.5MG EVERY 3 WEEKS (THERAPY START DATE: 02-DEC-2016 AND THERAPY END DATE: 03-FEB-2017)
     Route: 042
  448. ADO-TRASTUZUMAB EMTANSINE [Suspect]
     Active Substance: ADO-TRASTUZUMAB EMTANSINE
     Dosage: 840MG EVERY WEEK (END DATE: 31-JAN-2018)
     Route: 042
  449. ADO-TRASTUZUMAB EMTANSINE [Suspect]
     Active Substance: ADO-TRASTUZUMAB EMTANSINE
     Dosage: 280 MG, ONCE EVERY 3 WK (CUMULATIVE DOSE TO FIRST REACTION: 7440.5557 MG)
     Route: 042
     Dates: start: 20180131, end: 20180131
  450. ADO-TRASTUZUMAB EMTANSINE [Suspect]
     Active Substance: ADO-TRASTUZUMAB EMTANSINE
     Dosage: 280 MG, ONCE EVERY 3 WK (CUMULATIVE DOSE TO FIRST REACTION: 573.3333 MG)
     Route: 042
     Dates: start: 20160609, end: 20160609
  451. ADO-TRASTUZUMAB EMTANSINE [Suspect]
     Active Substance: ADO-TRASTUZUMAB EMTANSINE
     Dosage: 441 MG, ONCE EVERY 3 WK ((CUMULATIVE DOSE TO FIRST REACTION: 3590.125 MG)
     Route: 042
     Dates: start: 20160202, end: 20160203
  452. CALCIUM CARBONATE\CHOLECALCIFEROL [Concomitant]
     Active Substance: CALCIUM CARBONATE\CHOLECALCIFEROL
     Indication: Product used for unknown indication
     Dosage: 0.5 UNK, QD
     Route: 048
     Dates: start: 20170621
  453. CALCIUM CARBONATE\CHOLECALCIFEROL [Concomitant]
     Active Substance: CALCIUM CARBONATE\CHOLECALCIFEROL
     Dosage: UNK UNK, QD (0.5 UNK, QD, START 21-JUN-2017) (DOSE FORM: 245)
     Route: 048
     Dates: start: 20170621, end: 20170621
  454. CALCIUM CARBONATE\CHOLECALCIFEROL [Concomitant]
     Active Substance: CALCIUM CARBONATE\CHOLECALCIFEROL
     Dosage: UNK, QD
     Route: 048
     Dates: start: 20170621
  455. CALCIUM CARBONATE\CHOLECALCIFEROL [Concomitant]
     Active Substance: CALCIUM CARBONATE\CHOLECALCIFEROL
     Dosage: 1, PER 0.5 DAY (DOSE FORM: UNKNOWN)
     Route: 048
     Dates: start: 20170621
  456. CALCIUM CARBONATE\CHOLECALCIFEROL [Concomitant]
     Active Substance: CALCIUM CARBONATE\CHOLECALCIFEROL
     Dosage: 2, PER 0.5 DAY (DOSE FORM: 230)
     Route: 048
     Dates: start: 20170621
  457. CALCIUM CARBONATE\CHOLECALCIFEROL [Concomitant]
     Active Substance: CALCIUM CARBONATE\CHOLECALCIFEROL
     Dosage: 0.5 UNK, QD (2, PER 0.5 DAY (DOSE FORM: 230); DOSE FORM: 245
     Route: 048
     Dates: start: 20170621
  458. CALCIUM CARBONATE\CHOLECALCIFEROL [Concomitant]
     Active Substance: CALCIUM CARBONATE\CHOLECALCIFEROL
     Dosage: UNK, QD (0.5 UNK, QD);
     Route: 048
     Dates: start: 20170621
  459. CALCIUM CARBONATE\CHOLECALCIFEROL [Concomitant]
     Active Substance: CALCIUM CARBONATE\CHOLECALCIFEROL
     Dosage: UNK, QD; ;
     Route: 048
     Dates: start: 20170621
  460. CALCIUM CARBONATE\CHOLECALCIFEROL [Concomitant]
     Active Substance: CALCIUM CARBONATE\CHOLECALCIFEROL
     Dosage: UNK UNK, QD (0.5 UNK, QD, START 21-JUN-2017)
     Dates: start: 20170621
  461. CALCIUM CARBONATE\CHOLECALCIFEROL [Concomitant]
     Active Substance: CALCIUM CARBONATE\CHOLECALCIFEROL
     Indication: Product used for unknown indication
     Dosage: 0.5 UNK DAILY
     Route: 048
  462. CALCIUM CARBONATE\CHOLECALCIFEROL [Concomitant]
     Active Substance: CALCIUM CARBONATE\CHOLECALCIFEROL
     Dosage: PER 0.5 DAY
     Route: 048
     Dates: start: 20170621
  463. CALCIUM CARBONATE\CHOLECALCIFEROL [Concomitant]
     Active Substance: CALCIUM CARBONATE\CHOLECALCIFEROL
     Dosage: 0.5 DAILY TWO TIMES A DAY
     Route: 048
     Dates: start: 20170621
  464. CALCIUM CARBONATE\CHOLECALCIFEROL [Concomitant]
     Active Substance: CALCIUM CARBONATE\CHOLECALCIFEROL
     Dosage: EVERY 1 DAY
     Route: 048
     Dates: start: 20170621
  465. AMOXICILLIN [Concomitant]
     Active Substance: AMOXICILLIN
     Indication: Product used for unknown indication
     Dosage: UNK, QD
     Route: 048
     Dates: start: 201712, end: 201712
  466. AMOXICILLIN [Concomitant]
     Active Substance: AMOXICILLIN
     Dosage: 1, QD
     Route: 048
     Dates: start: 201712, end: 201712
  467. AMOXICILLIN [Concomitant]
     Active Substance: AMOXICILLIN
     Dosage: UNKNOWN
     Route: 048
     Dates: start: 201712, end: 201712
  468. AMOXICILLIN [Concomitant]
     Active Substance: AMOXICILLIN
     Dosage: UNK, ONCE A DAY
     Route: 048
     Dates: start: 201712
  469. AMOXICILLIN [Concomitant]
     Active Substance: AMOXICILLIN
     Dosage: DAILY
     Route: 048
     Dates: start: 201712, end: 201712
  470. AMOXICILLIN [Concomitant]
     Active Substance: AMOXICILLIN
     Dosage: UNK, QD
     Dates: start: 201712, end: 201712
  471. HERBALS\SENNOSIDES [Concomitant]
     Active Substance: HERBALS\SENNOSIDES
     Indication: HER2 positive breast cancer
     Dosage: 15 MILLIGRAM, ONCE A DAY
     Dates: start: 20160722, end: 20161011
  472. HERBALS\SENNOSIDES [Concomitant]
     Active Substance: HERBALS\SENNOSIDES
     Dosage: 15 MILLIGRAM, ONCE A DAY
     Dates: start: 20160722
  473. CASSIA SENNA FRUIT EXTRACT [Concomitant]
     Dosage: 15 MILLIGRAM, QD
     Route: 048
     Dates: start: 20160722
  474. CASSIA SENNA FRUIT EXTRACT [Concomitant]
     Dosage: 15 MILLIGRAM, QD (CUMULATIVE DOSE: 15MG)
     Route: 065
     Dates: start: 20160722
  475. CHLORPHENIRAMINE MALEATE [Concomitant]
     Active Substance: CHLORPHENIRAMINE MALEATE
     Indication: Product used for unknown indication
     Dosage: 10 MILLIGRAM (28-SEP-2016)
     Route: 042
     Dates: start: 20160928, end: 20170724
  476. CHLORPHENIRAMINE MALEATE [Concomitant]
     Active Substance: CHLORPHENIRAMINE MALEATE
     Dosage: 10 MILLIGRAM (START 07-SEP-2016)
     Route: 042
     Dates: start: 20160907, end: 20160907
  477. CHLORPHENIRAMINE MALEATE [Concomitant]
     Active Substance: CHLORPHENIRAMINE MALEATE
     Dosage: 10 MG
     Route: 042
     Dates: start: 20160928, end: 20170724
  478. CHLORPHENIRAMINE MALEATE [Concomitant]
     Active Substance: CHLORPHENIRAMINE MALEATE
     Dosage: 10 MILLIGRAM/10 MG
     Route: 042
     Dates: start: 20160907, end: 20160907
  479. CHLORPHENIRAMINE MALEATE [Concomitant]
     Active Substance: CHLORPHENIRAMINE MALEATE
     Dosage: 10 MILLIGRAM
     Dates: start: 20160928, end: 20170724
  480. CHLORPHENIRAMINE MALEATE [Concomitant]
     Active Substance: CHLORPHENIRAMINE MALEATE
     Dosage: 10 UNK
     Route: 042
     Dates: start: 20160928, end: 20170724
  481. CHLORPHENIRAMINE MALEATE [Concomitant]
     Active Substance: CHLORPHENIRAMINE MALEATE
     Dosage: 10 MG;
     Route: 042
     Dates: start: 20160907, end: 20170724
  482. CHLORPHENIRAMINE MALEATE [Concomitant]
     Active Substance: CHLORPHENIRAMINE MALEATE
     Indication: Product used for unknown indication
     Dosage: 10 MG, QD
     Route: 042
     Dates: start: 20160907, end: 20160907
  483. CHLORPHENIRAMINE MALEATE [Concomitant]
     Active Substance: CHLORPHENIRAMINE MALEATE
     Dosage: 10 MG;
     Route: 042
     Dates: start: 20160928, end: 20170724
  484. CHLORPHENIRAMINE MALEATE [Concomitant]
     Active Substance: CHLORPHENIRAMINE MALEATE
     Dosage: UNK MG
     Route: 042
     Dates: start: 20160928, end: 20170724
  485. CHLORPHENIRAMINE MALEATE [Concomitant]
     Active Substance: CHLORPHENIRAMINE MALEATE
     Dosage: 50 MG, ONCE EVERY 8 HR
     Dates: start: 20170902
  486. CIPROFLOXACIN [Concomitant]
     Active Substance: CIPROFLOXACIN
     Indication: Product used for unknown indication
     Dosage: UNK
     Route: 065
     Dates: start: 20161009, end: 20161009
  487. CIPROFLOXACIN [Concomitant]
     Active Substance: CIPROFLOXACIN
     Dosage: UNK UNK, QD;
     Route: 065
     Dates: start: 20161009, end: 20161009
  488. CIPROFLOXACIN [Concomitant]
     Active Substance: CIPROFLOXACIN
     Dosage: UNK (START 09-OCT-2016); ;
     Dates: start: 20161009
  489. CIPROFLOXACIN [Concomitant]
     Active Substance: CIPROFLOXACIN
     Dosage: UNK (START 09-OCT-2016); ;
     Route: 065
     Dates: start: 20161009, end: 20161009
  490. CIPROFLOXACIN [Concomitant]
     Active Substance: CIPROFLOXACIN
     Dosage: UNK
     Dates: start: 20160109, end: 20160109
  491. CIPROFLOXACIN HYDROCHLORIDE [Concomitant]
     Active Substance: CIPROFLOXACIN HYDROCHLORIDE
     Indication: Product used for unknown indication
     Dosage: 15 MG, QD
     Route: 048
  492. CIPROFLOXACIN HYDROCHLORIDE [Concomitant]
     Active Substance: CIPROFLOXACIN HYDROCHLORIDE
     Dosage: 15 MG
     Route: 065
  493. CLARITHROMYCIN [Concomitant]
     Active Substance: CLARITHROMYCIN
     Indication: Product used for unknown indication
     Dosage: 500 MILLIGRAM
     Route: 048
     Dates: start: 20180214, end: 20180301
  494. CLARITHROMYCIN [Concomitant]
     Active Substance: CLARITHROMYCIN
     Dosage: 500 MILLIGRAM (START 14-FEB-2018)
     Route: 048
     Dates: start: 20180301, end: 20180301
  495. CLARITHROMYCIN [Concomitant]
     Active Substance: CLARITHROMYCIN
     Dosage: 500 MILLIGRAM (START 14-FEB-2018)
     Dates: start: 20180301
  496. CLARITHROMYCIN [Concomitant]
     Active Substance: CLARITHROMYCIN
     Dosage: 500 MILLIGRAM
     Route: 048
     Dates: start: 20180214, end: 20180301
  497. CLARITHROMYCIN [Concomitant]
     Active Substance: CLARITHROMYCIN
     Dosage: 500 MILLIGRAM (START 14-FEB-2018)
     Route: 048
     Dates: start: 20180301
  498. CLARITHROMYCIN [Concomitant]
     Active Substance: CLARITHROMYCIN
     Dosage: 500 MG
     Dates: start: 20180214, end: 20180301
  499. CLARITHROMYCIN LACTOBIONATE [Concomitant]
     Active Substance: CLARITHROMYCIN LACTOBIONATE
     Indication: Product used for unknown indication
     Dosage: 500 MG
     Route: 048
     Dates: start: 20180214, end: 20180301
  500. CLARITHROMYCIN LACTOBIONATE [Concomitant]
     Active Substance: CLARITHROMYCIN LACTOBIONATE
     Dosage: 500 MG
     Route: 048
     Dates: start: 20180214, end: 20180301
  501. ENOXAPARIN SODIUM [Concomitant]
     Active Substance: ENOXAPARIN SODIUM
     Indication: Product used for unknown indication
     Dosage: UNK
     Route: 065
     Dates: start: 20160825, end: 20160914
  502. ENOXAPARIN SODIUM [Concomitant]
     Active Substance: ENOXAPARIN SODIUM
     Dosage: 40 MG, QD (CUMULATIVE DOSE OF FIRST REACTION: 51121.668 MG)
     Route: 065
     Dates: start: 20160723, end: 20160723
  503. ENOXAPARIN SODIUM [Concomitant]
     Active Substance: ENOXAPARIN SODIUM
     Dosage: UNK (START 25-AUG-2016)
     Dates: start: 20160825
  504. ENOXAPARIN SODIUM [Concomitant]
     Active Substance: ENOXAPARIN SODIUM
     Dosage: 110 MG, QD, UNK (START 25-AUG-2016) (CUMULATIVE DOSE OF FIRST REACTION: 136954.58 MG)
     Route: 058
     Dates: start: 20160825, end: 20160914
  505. ENOXAPARIN SODIUM [Concomitant]
     Active Substance: ENOXAPARIN SODIUM
     Dosage: 40 MG, QD
     Dates: start: 20160723, end: 20160723
  506. ENOXAPARIN SODIUM [Concomitant]
     Active Substance: ENOXAPARIN SODIUM
     Dosage: 110 MILLIGRAM, QD
     Dates: start: 20160825, end: 20160914
  507. ENOXAPARIN SODIUM [Concomitant]
     Active Substance: ENOXAPARIN SODIUM
     Dosage: UNK (START 23-JUL-2016)
     Dates: start: 20160723, end: 20160723
  508. ENOXAPARIN SODIUM [Concomitant]
     Active Substance: ENOXAPARIN SODIUM
     Dosage: 110 MILLIGRAM, QD (CUMULATIVE DOSE TO FIRST REACTION: 3740.0 MG)
     Route: 065
     Dates: start: 20160825, end: 20160914
  509. ENOXAPARIN SODIUM [Concomitant]
     Active Substance: ENOXAPARIN SODIUM
     Dosage: 40 MG, QD (CUMULATIVE DOSE TO FIRST REACTION: 40.0 MG)
     Dates: start: 20160723, end: 20160723
  510. CODEINE [Concomitant]
     Active Substance: CODEINE
     Indication: Product used for unknown indication
     Dosage: 10 MILLILITER, START 19-JUN-2017
     Route: 048
     Dates: start: 20170619, end: 20170619
  511. CODEINE [Concomitant]
     Active Substance: CODEINE
     Dosage: 10 MILLIGRAM
     Route: 048
     Dates: start: 20170619, end: 20170619
  512. CODEINE [Concomitant]
     Active Substance: CODEINE
     Dosage: 10 MG
     Route: 048
     Dates: start: 20170619, end: 20170619
  513. CODEINE [Concomitant]
     Active Substance: CODEINE
     Dosage: 10 ML
     Dates: start: 20170619, end: 20170619
  514. CODEINE [Concomitant]
     Active Substance: CODEINE
     Dosage: UNK
     Route: 048
     Dates: start: 20170619, end: 20170619
  515. CHLOROFORM\CODEINE PHOSPHATE\DRIMIA MARITIMA BULB [Concomitant]
     Active Substance: CHLOROFORM\CODEINE PHOSPHATE\DRIMIA MARITIMA BULB
     Indication: Product used for unknown indication
     Dosage: 10 ML
     Route: 048
     Dates: start: 20170619, end: 20170619
  516. CHLOROFORM\CODEINE PHOSPHATE\DRIMIA MARITIMA BULB [Concomitant]
     Active Substance: CHLOROFORM\CODEINE PHOSPHATE\DRIMIA MARITIMA BULB
     Dosage: 10 MILLILITER
     Route: 048
     Dates: start: 20170619, end: 20170619
  517. CHLOROFORM\CODEINE PHOSPHATE\DRIMIA MARITIMA BULB [Concomitant]
     Active Substance: CHLOROFORM\CODEINE PHOSPHATE\DRIMIA MARITIMA BULB
     Dosage: 10 ML, QD
     Route: 048
     Dates: start: 20170619, end: 20170619
  518. CHLOROFORM\CODEINE PHOSPHATE\DRIMIA MARITIMA BULB [Concomitant]
     Active Substance: CHLOROFORM\CODEINE PHOSPHATE\DRIMIA MARITIMA BULB
     Dosage: 10 ML
     Route: 048
     Dates: start: 20170609, end: 20170619
  519. CHLOROFORM\CODEINE PHOSPHATE\DRIMIA MARITIMA BULB [Concomitant]
     Active Substance: CHLOROFORM\CODEINE PHOSPHATE\DRIMIA MARITIMA BULB
     Dosage: 10 ML
     Route: 048
     Dates: start: 20170609, end: 20170619
  520. CHLOROFORM\CODEINE PHOSPHATE\DRIMIA MARITIMA BULB [Concomitant]
     Active Substance: CHLOROFORM\CODEINE PHOSPHATE\DRIMIA MARITIMA BULB
     Dosage: UNK
     Route: 065
     Dates: start: 20170609, end: 20170609
  521. AMOXICILLIN\CLAVULANATE POTASSIUM [Concomitant]
     Active Substance: AMOXICILLIN\CLAVULANATE POTASSIUM
     Indication: Product used for unknown indication
     Dosage: 625 MILLIGRAM, 3/DAY
     Route: 065
     Dates: start: 20180215, end: 20180301
  522. AMOXICILLIN\CLAVULANATE POTASSIUM [Concomitant]
     Active Substance: AMOXICILLIN\CLAVULANATE POTASSIUM
     Dosage: 1.2 GRAM, BID
     Route: 048
     Dates: start: 20180214, end: 20180214
  523. AMOXICILLIN\CLAVULANATE POTASSIUM [Concomitant]
     Active Substance: AMOXICILLIN\CLAVULANATE POTASSIUM
     Dosage: 1875 MG, QD [625 MILLIGRAM, TID (625 MILLIGRAM 3/DAY) (START 15-FEB-2018)]
     Route: 065
     Dates: start: 20180301
  524. AMOXICILLIN\CLAVULANATE POTASSIUM [Concomitant]
     Active Substance: AMOXICILLIN\CLAVULANATE POTASSIUM
     Dosage: 2.4 MG QD [1.2 GRAM, BID (START 14-FEB-2018)]
     Route: 042
     Dates: start: 20180214
  525. AMOXICILLIN\CLAVULANATE POTASSIUM [Concomitant]
     Active Substance: AMOXICILLIN\CLAVULANATE POTASSIUM
     Dosage: 1875 MILLIGRAM, QD (START 15-FEB-2018)
     Dates: start: 20180301, end: 20180301
  526. AMOXICILLIN\CLAVULANATE POTASSIUM [Concomitant]
     Active Substance: AMOXICILLIN\CLAVULANATE POTASSIUM
     Dosage: 1875 MILLIGRAM, QD (START 14-FEB-2018)
     Route: 065
     Dates: start: 20180214, end: 20180214
  527. AMOXICILLIN\CLAVULANATE POTASSIUM [Concomitant]
     Active Substance: AMOXICILLIN\CLAVULANATE POTASSIUM
     Dosage: 1.2 GRAM, BID
     Route: 042
     Dates: start: 20180214, end: 20180214
  528. AMOXICILLIN\CLAVULANATE POTASSIUM [Concomitant]
     Active Substance: AMOXICILLIN\CLAVULANATE POTASSIUM
     Dosage: 625 MILLIGRAM, TID (625 MILLIGRAM 3/DAY) (START 15-FEB-2018)
     Route: 065
     Dates: start: 20180215, end: 20180301
  529. AMOXICILLIN\CLAVULANATE POTASSIUM [Concomitant]
     Active Substance: AMOXICILLIN\CLAVULANATE POTASSIUM
     Dosage: 1.2 GRAM, BID (START 14-FEB-2018)
     Route: 042
     Dates: start: 20180214, end: 20180214
  530. AMOXICILLIN\CLAVULANATE POTASSIUM [Concomitant]
     Active Substance: AMOXICILLIN\CLAVULANATE POTASSIUM
     Dosage: 1875 MILLIGRAM, QD (START 15-FEB-2018)
     Route: 065
     Dates: start: 20180215, end: 20180301
  531. AMOXICILLIN\CLAVULANATE POTASSIUM [Concomitant]
     Active Substance: AMOXICILLIN\CLAVULANATE POTASSIUM
     Dosage: 2.4 GRAM (START 14-FEB-2018)
     Route: 042
     Dates: start: 20180214, end: 20180214
  532. AMOXICILLIN\CLAVULANATE POTASSIUM [Concomitant]
     Active Substance: AMOXICILLIN\CLAVULANATE POTASSIUM
     Dosage: 2.4 G, QD, 2.4 GRAM (START 14-FEB-2018)
     Route: 042
     Dates: start: 20180214, end: 20180301
  533. AMOXICILLIN\CLAVULANATE POTASSIUM [Concomitant]
     Active Substance: AMOXICILLIN\CLAVULANATE POTASSIUM
     Dosage: 625 MG, TID (625 MILLIGRAM, 3/DAY)
     Dates: start: 20180215, end: 20180301
  534. AMOXICILLIN\CLAVULANATE POTASSIUM [Concomitant]
     Active Substance: AMOXICILLIN\CLAVULANATE POTASSIUM
     Dosage: 1875 MILLIGRAM, QD (START 14-FEB-2018)
     Route: 065
     Dates: start: 20180214, end: 20180214
  535. AMOXICILLIN\CLAVULANATE POTASSIUM [Concomitant]
     Active Substance: AMOXICILLIN\CLAVULANATE POTASSIUM
     Dosage: 2.4 G, BID (START 14-FEB-2018)
     Route: 042
     Dates: start: 20180214, end: 20180214
  536. AMOXICILLIN\CLAVULANATE POTASSIUM [Concomitant]
     Active Substance: AMOXICILLIN\CLAVULANATE POTASSIUM
     Dosage: 4.8 G (1.2 GRAM, BID (START 14-FEB-2018);
     Route: 042
     Dates: end: 20180214
  537. AMOXICILLIN\CLAVULANATE POTASSIUM [Concomitant]
     Active Substance: AMOXICILLIN\CLAVULANATE POTASSIUM
     Dosage: 1 G
     Dates: start: 20180214, end: 20180214
  538. AMOXICILLIN\CLAVULANATE POTASSIUM [Concomitant]
     Active Substance: AMOXICILLIN\CLAVULANATE POTASSIUM
     Dosage: 2 G
     Dates: start: 20180214, end: 20180301
  539. AMOXICILLIN\CLAVULANATE POTASSIUM [Concomitant]
     Active Substance: AMOXICILLIN\CLAVULANATE POTASSIUM
     Dosage: 625 MG, Q8HR
     Dates: start: 20180301
  540. AMOXICILLIN\CLAVULANATE POTASSIUM [Concomitant]
     Active Substance: AMOXICILLIN\CLAVULANATE POTASSIUM
     Dosage: 5 G
     Dates: start: 20180214
  541. AMOXICILLIN\CLAVULANATE POTASSIUM [Concomitant]
     Active Substance: AMOXICILLIN\CLAVULANATE POTASSIUM
     Dosage: 625 MILLIGRAM, TID
     Dates: start: 20180301
  542. AMOXICILLIN\CLAVULANATE POTASSIUM [Concomitant]
     Active Substance: AMOXICILLIN\CLAVULANATE POTASSIUM
     Dosage: 4.8 GRAM, BID
     Route: 042
     Dates: start: 20180214
  543. AMOXICILLIN\CLAVULANATE POTASSIUM [Concomitant]
     Active Substance: AMOXICILLIN\CLAVULANATE POTASSIUM
     Dosage: 2.4 GRAM (START 14-FEB-2018)
     Dates: end: 20180214
  544. AMOXICILLIN\CLAVULANATE POTASSIUM [Concomitant]
     Active Substance: AMOXICILLIN\CLAVULANATE POTASSIUM
     Dosage: 2.4 GRAM, BID (1.2 GRAM, BID (START 14-FEB-2018)
     Route: 042
     Dates: start: 20180214, end: 20180214
  545. AMOXICILLIN\CLAVULANATE POTASSIUM [Concomitant]
     Active Substance: AMOXICILLIN\CLAVULANATE POTASSIUM
     Dosage: 625 MILLIGRAM, TID
     Dates: start: 20180301
  546. AMOXICILLIN\CLAVULANATE POTASSIUM [Concomitant]
     Active Substance: AMOXICILLIN\CLAVULANATE POTASSIUM
     Dosage: 625 MILLIGRAM, TID
     Dates: start: 20180215, end: 20180215
  547. AMOXICILLIN\CLAVULANATE POTASSIUM [Concomitant]
     Active Substance: AMOXICILLIN\CLAVULANATE POTASSIUM
     Dosage: 4.8 GRAM, BID
     Route: 048
     Dates: start: 20180214
  548. AMOXICILLIN\CLAVULANATE POTASSIUM [Concomitant]
     Active Substance: AMOXICILLIN\CLAVULANATE POTASSIUM
     Dosage: 1.2 GRAM, BID (START 14-FEB-2018)
     Route: 042
     Dates: start: 20180214, end: 20180214
  549. AMOXICILLIN\CLAVULANATE POTASSIUM [Concomitant]
     Active Substance: AMOXICILLIN\CLAVULANATE POTASSIUM
     Dosage: 2 G
     Dates: start: 20180214, end: 20180301
  550. AMOXICILLIN\CLAVULANATE POTASSIUM [Concomitant]
     Active Substance: AMOXICILLIN\CLAVULANATE POTASSIUM
     Dosage: 5 MG, BID
     Dates: start: 20180214
  551. AMOXICILLIN\CLAVULANATE POTASSIUM [Concomitant]
     Active Substance: AMOXICILLIN\CLAVULANATE POTASSIUM
     Dosage: 625 MILLIGRAM, TID (CUMULATIVE DOSE TO FIRST REACTION: 1100703.1 MG)
     Dates: start: 20180301
  552. AMOXICILLIN\CLAVULANATE POTASSIUM [Concomitant]
     Active Substance: AMOXICILLIN\CLAVULANATE POTASSIUM
     Dosage: 2.4 GRAM, QD (CUMULATIVE DOSE TO FIRST REACTION: 1372.9 G)
     Route: 042
     Dates: start: 20180214, end: 20180301
  553. AMOXICILLIN\CLAVULANATE POTASSIUM [Concomitant]
     Active Substance: AMOXICILLIN\CLAVULANATE POTASSIUM
     Dosage: 1875 MILLIGRAM, QD (CUMULATIVE DOSE TO FIRST REACTION: 1100703.1 MG)
     Route: 065
     Dates: start: 20180301
  554. AMOXICILLIN\CLAVULANATE POTASSIUM [Concomitant]
     Active Substance: AMOXICILLIN\CLAVULANATE POTASSIUM
     Dosage: 1875 MILLIGRAM, QD (CUMULATIVE DOSE TO FIRST REACTION: 1074453.1  MG)
     Dates: start: 20180215, end: 20180301
  555. AMOXICILLIN\CLAVULANATE POTASSIUM [Concomitant]
     Active Substance: AMOXICILLIN\CLAVULANATE POTASSIUM
     Dosage: 4.8 GRAM, BID (CUMULATIVE DOSE TO FIRST REACTION: 5491.6 G)
     Route: 048
     Dates: start: 20180214
  556. AMOXICILLIN\CLAVULANATE POTASSIUM [Concomitant]
     Active Substance: AMOXICILLIN\CLAVULANATE POTASSIUM
     Dosage: 5625MG(625MG, TID (625 MILLIGRAM 3/DAY)
     Route: 065
     Dates: end: 20180301
  557. AMOXICILLIN\CLAVULANATE POTASSIUM [Concomitant]
     Active Substance: AMOXICILLIN\CLAVULANATE POTASSIUM
     Dosage: 625 MG, EVERY 1 DAY
     Route: 042
     Dates: start: 20180215, end: 20180301
  558. AMOXICILLIN\CLAVULANATE POTASSIUM [Concomitant]
     Active Substance: AMOXICILLIN\CLAVULANATE POTASSIUM
     Dosage: 2.4 G, EVERY 1 DAY
     Dates: start: 20180214
  559. AMOXICILLIN\CLAVULANATE POTASSIUM [Concomitant]
     Active Substance: AMOXICILLIN\CLAVULANATE POTASSIUM
     Dosage: 625 MILLIGRAM, TID (625 MILLIGRAM 3/DAY) (START 15-FEB-2018)
     Route: 065
     Dates: start: 20180215, end: 20180301
  560. AMOXICILLIN\CLAVULANATE POTASSIUM [Concomitant]
     Active Substance: AMOXICILLIN\CLAVULANATE POTASSIUM
     Dosage: 625 MG, QD
     Route: 065
     Dates: start: 20180301
  561. AMOXICILLIN\CLAVULANATE POTASSIUM [Concomitant]
     Active Substance: AMOXICILLIN\CLAVULANATE POTASSIUM
     Dosage: 8 GRAM, BID
     Route: 065
     Dates: start: 20180214
  562. COTRIMOXAZOLE [Concomitant]
     Active Substance: SULFAMETHOXAZOLE\TRIMETHOPRIM
     Indication: Product used for unknown indication
     Dosage: 483 MG, EVERY 1 DAY (CUMULATIVE DOSE OF FIRST REACTION: 348243.0 MG)
     Route: 048
     Dates: start: 20180131, end: 20180131
  563. COTRIMOXAZOLE [Concomitant]
     Active Substance: SULFAMETHOXAZOLE\TRIMETHOPRIM
     Dosage: 483 MG, EVERY 1 DAY (PHARMACEUTICAL DOSE FORM: 245) (CUMULATIVE DOSE: 269534.12 MG)
     Route: 065
     Dates: start: 20180131, end: 20180131
  564. COTRIMOXAZOLE [Concomitant]
     Active Substance: SULFAMETHOXAZOLE\TRIMETHOPRIM
     Dosage: 483 MG
     Route: 048
     Dates: start: 20180131, end: 20180131
  565. COTRIMOXAZOLE [Concomitant]
     Active Substance: SULFAMETHOXAZOLE\TRIMETHOPRIM
     Dosage: 483 MG, QD (DOSE FORM: 245)
     Route: 048
     Dates: start: 20180131, end: 20180131
  566. COTRIMOXAZOLE [Concomitant]
     Active Substance: SULFAMETHOXAZOLE\TRIMETHOPRIM
     Dosage: 483 MG, 1X/DAY
     Dates: start: 20180131, end: 20180131
  567. COTRIMOXAZOLE [Concomitant]
     Active Substance: SULFAMETHOXAZOLE\TRIMETHOPRIM
     Indication: Product used for unknown indication
     Dosage: 483 MG (CUMULATIVE DOSE: 348243.0 MG)
     Route: 048
     Dates: start: 20180131, end: 20180131
  568. COTRIMOXAZOLE [Concomitant]
     Active Substance: SULFAMETHOXAZOLE\TRIMETHOPRIM
     Dosage: 483 MG (CUMULATIVE DOSE: 1932 MG)
     Dates: start: 20180131, end: 20180131
  569. CYCLIZINE [Concomitant]
     Active Substance: CYCLIZINE
     Indication: Product used for unknown indication
     Dosage: 50 MILLIGRAM, TID
     Route: 048
     Dates: start: 20170902
  570. CYCLIZINE [Concomitant]
     Active Substance: CYCLIZINE
     Dosage: 150 MILLIGRAM, QD (START 02-SEP-2017)
     Route: 048
     Dates: start: 20170902
  571. CYCLIZINE [Concomitant]
     Active Substance: CYCLIZINE
     Dosage: 50 MILLIGRAM, TID (50 MILLIGRAM 3/DAY, START 02-SEP-2017 )
     Route: 048
     Dates: start: 20170902
  572. CYCLIZINE [Concomitant]
     Active Substance: CYCLIZINE
     Dosage: 150 MG, QD
     Route: 048
     Dates: start: 20170902
  573. CYCLIZINE [Concomitant]
     Active Substance: CYCLIZINE
     Dosage: 50 MILLIGRAM, TID (50 MILLIGRAM 3/DAY, START 02-SEP-2017)
     Route: 048
     Dates: start: 20170902
  574. CYCLIZINE [Concomitant]
     Active Substance: CYCLIZINE
     Dosage: 50 MG, TID, (3/DAY)
     Route: 048
     Dates: start: 20170902
  575. CYCLIZINE [Concomitant]
     Active Substance: CYCLIZINE
     Dosage: 150 MG, QD (CUMULATIVE DOSE TO FIRST REACTION: 61050.0 MG)
     Route: 048
     Dates: start: 20170902
  576. DEXAMETHASONE [Concomitant]
     Active Substance: DEXAMETHASONE
     Dosage: 2 MILLIGRAM, QD (CUMULATIVE DOSE OF FIRST REACTION: 1078 MG)
     Route: 048
     Dates: start: 20170902, end: 20180110
  577. DEXAMETHASONE [Concomitant]
     Active Substance: DEXAMETHASONE
     Dosage: 8 MILLIGRAM (CUMULATIVE DOSE OF FIRST REACTION: 1078 MG)
     Route: 042
     Dates: start: 20170616, end: 20170616
  578. DEXAMETHASONE [Concomitant]
     Active Substance: DEXAMETHASONE
     Dosage: 4 MILLIGRAM, QD, START 10-JAN-2018
     Route: 048
     Dates: start: 20180110
  579. DEXAMETHASONE [Concomitant]
     Active Substance: DEXAMETHASONE
     Dosage: 2 MILLIGRAM, QD, START 11-JAN-2018 (CUMULATIVE DOSE OF FIRST REACTION: 1078 MG)
     Route: 048
     Dates: start: 20200111
  580. DEXAMETHASONE [Concomitant]
     Active Substance: DEXAMETHASONE
     Dosage: 4 MG, BID
     Route: 048
     Dates: start: 20170616, end: 20170902
  581. DEXAMETHASONE [Concomitant]
     Active Substance: DEXAMETHASONE
     Dosage: 8 MILLIGRAM, QD
     Route: 048
     Dates: start: 20160803, end: 20160805
  582. DEXAMETHASONE [Concomitant]
     Active Substance: DEXAMETHASONE
     Dosage: 8 MILLIGRAM (CUMULATIVE DOSE TO FIRST REACTION: 1078 MG)
     Route: 048
     Dates: start: 20160610, end: 20160611
  583. DEXAMETHASONE [Concomitant]
     Active Substance: DEXAMETHASONE
     Dosage: 4 MILLIGRAM, BID
     Route: 048
     Dates: start: 20160722, end: 20160723
  584. DEXAMETHASONE [Concomitant]
     Active Substance: DEXAMETHASONE
     Dosage: 1 DOSAGE FORM, QD (CUMULATIVE DOSE: 14DF)
     Route: 048
     Dates: start: 20190805, end: 201909
  585. DEXAMETHASONE [Concomitant]
     Active Substance: DEXAMETHASONE
     Dosage: 8 MILLIGRAM, QD, START 03-AUG-2016
     Route: 042
     Dates: start: 20160803, end: 20160805
  586. DEXAMETHASONE [Concomitant]
     Active Substance: DEXAMETHASONE
     Dosage: 8 MILLIGRAM (CUMULATIVE DOSE OF FIRST REACTION: 1078 MG)
     Route: 048
     Dates: start: 20160610, end: 20160611
  587. DEXAMETHASONE [Concomitant]
     Active Substance: DEXAMETHASONE
     Dosage: 8 MG, QD (CUMULATIVE DOSE OF FIRST REACTION: 1078 MG)
     Route: 048
     Dates: start: 20160610, end: 20160610
  588. DEXAMETHASONE [Concomitant]
     Active Substance: DEXAMETHASONE
     Dosage: 2 MILLIGRAM, QD, START 11-JAN-2020
     Route: 048
     Dates: start: 20200111
  589. DEXAMETHASONE [Concomitant]
     Active Substance: DEXAMETHASONE
     Dosage: 1 DOSAGE FORM, QD, START 05-AUG-2016  (CUMULATIVE DOSE OF FIRST REACTION: 1078 MG)
     Route: 048
     Dates: start: 20160805, end: 201609
  590. DEXAMETHASONE [Concomitant]
     Active Substance: DEXAMETHASONE
     Dosage: 1 DF, QD (CUMULATIVE DOSE OF FIRST REACTION: 1078 MG)
     Route: 048
     Dates: start: 20190805, end: 201909
  591. DEXAMETHASONE [Concomitant]
     Active Substance: DEXAMETHASONE
     Dosage: 8 UNK; (DOSE FORM: 32)
     Dates: start: 20160610, end: 20160611
  592. DEXAMETHASONE [Concomitant]
     Active Substance: DEXAMETHASONE
     Dosage: 4 MG, BID (DOSE FORM: 32)
     Route: 048
     Dates: start: 20170616, end: 20170902
  593. DEXAMETHASONE [Concomitant]
     Active Substance: DEXAMETHASONE
     Dosage: 8 UNK; (DOSE FORM: 32)
     Route: 042
     Dates: start: 20170616, end: 20170616
  594. DEXAMETHASONE [Concomitant]
     Active Substance: DEXAMETHASONE
     Dosage: 2 MG, QD (DOSE FORM: 32) (CUMULATIVE DOSE OF FIRST REACTION: 1078 MG)
     Dates: start: 20170902, end: 20180110
  595. DEXAMETHASONE [Concomitant]
     Active Substance: DEXAMETHASONE
     Dosage: 4 MG, QD (DOSE FORM: 32) (CUMULATIVE DOSE OF FIRST REACTION: 1078 MG)
     Route: 048
     Dates: start: 20180110
  596. DEXAMETHASONE [Concomitant]
     Active Substance: DEXAMETHASONE
     Dosage: 8 MG, QD (DOSE FORM: 32) (CUMULATIVE DOSE OF FIRST REACTION: 1078 MG)
     Route: 042
     Dates: start: 20160803, end: 20160805
  597. DEXAMETHASONE [Concomitant]
     Active Substance: DEXAMETHASONE
     Dosage: 2 MG, QD (DOSE FORM: 32)
     Route: 048
     Dates: start: 20200111
  598. DEXAMETHASONE [Concomitant]
     Active Substance: DEXAMETHASONE
     Dosage: 40 MG, BID (DOSE FORM: 32)
     Route: 048
     Dates: start: 20160722, end: 20160723
  599. DEXAMETHASONE [Concomitant]
     Active Substance: DEXAMETHASONE
     Dosage: 1 DF (DOSE FORM: 32)/1 DOSAGE FORM, QD (CUMULATIVE DOSE OF FIRST REACTION: 1078 MG)
     Route: 048
     Dates: start: 20160805, end: 201609
  600. DEXAMETHASONE [Concomitant]
     Active Substance: DEXAMETHASONE
     Dosage: 1 DOSAGE FORM, QD
     Route: 048
     Dates: start: 20160805, end: 201609
  601. DEXAMETHASONE [Concomitant]
     Active Substance: DEXAMETHASONE
     Dosage: 4 MG, 2X/DAY
     Route: 042
     Dates: start: 20160722, end: 20160723
  602. DEXAMETHASONE [Concomitant]
     Active Substance: DEXAMETHASONE
     Dosage: 2 MG, 1X/DAY
     Route: 042
     Dates: start: 20180111
  603. DEXAMETHASONE [Concomitant]
     Active Substance: DEXAMETHASONE
     Dosage: 8 MILLIGRAM
     Dates: start: 20160610, end: 20160611
  604. DEXAMETHASONE [Concomitant]
     Active Substance: DEXAMETHASONE
     Dosage: 2 MILLIGRAM, QD
     Route: 048
     Dates: start: 20200111
  605. DEXAMETHASONE [Concomitant]
     Active Substance: DEXAMETHASONE
     Dosage: 1 DOSAGE FORM, QD
     Route: 048
     Dates: start: 20190805, end: 201909
  606. DEXAMETHASONE [Concomitant]
     Active Substance: DEXAMETHASONE
     Dosage: 4 MILLIGRAM, BID
     Route: 048
     Dates: start: 20170616, end: 20170902
  607. DEXAMETHASONE [Concomitant]
     Active Substance: DEXAMETHASONE
     Dosage: 40 MILLIGRAM, Q12H
     Route: 048
     Dates: start: 20160722, end: 20160723
  608. DEXAMETHASONE [Concomitant]
     Active Substance: DEXAMETHASONE
     Dosage: 4 MILLIGRAM, BID (CUMULATIVE DOSE OF FIRST REACTION: 1078 MG)
     Route: 048
     Dates: start: 20160722, end: 20160723
  609. DEXAMETHASONE [Concomitant]
     Active Substance: DEXAMETHASONE
     Dosage: 40 MILLIGRAM, BID, START 22-JUL-2016 (CUMULATIVE DOSE OF FIRST REACTION: 1078 MG)
     Route: 048
     Dates: start: 20160722, end: 20160723
  610. DEXAMETHASONE [Concomitant]
     Active Substance: DEXAMETHASONE
     Dosage: 4 MILLIGRAM, BID, START 16-JUN-2017
     Route: 048
     Dates: end: 20170902
  611. DEXAMETHASONE [Concomitant]
     Active Substance: DEXAMETHASONE
     Dosage: 8 MILLIGRAM
     Dates: start: 20170616, end: 20170616
  612. DEXAMETHASONE [Concomitant]
     Active Substance: DEXAMETHASONE
     Dosage: 1 DOSAGE FORM, QD (CUMULATIVE DOSE TO FIRST REACTION: 1109.0 {DF})
     Route: 048
     Dates: start: 20190805, end: 201909
  613. DEXAMETHASONE [Concomitant]
     Active Substance: DEXAMETHASONE
     Dosage: 4 MILLIGRAM, QD (CUMULATIVE DOSE TO FIRST REACTION: 1109.0 {DF})
     Route: 048
     Dates: start: 20180110
  614. DEXAMETHASONE [Concomitant]
     Active Substance: DEXAMETHASONE
     Dosage: 1 DF
     Dates: start: 20160805, end: 201909
  615. DEXAMETHASONE [Concomitant]
     Active Substance: DEXAMETHASONE
     Dosage: 8 MILLIGRAMS, QD; ; (CUMULATIVE DOSE TO FIRST REACTION: 16 MG)
     Dates: start: 20160803, end: 20160805
  616. DEXAMETHASONE [Concomitant]
     Active Substance: DEXAMETHASONE
     Dosage: UNK
     Dates: start: 20160616, end: 20160616
  617. DEXAMETHASONE [Concomitant]
     Active Substance: DEXAMETHASONE
     Dosage: 2 MG, EVERY 1 DAY
     Dates: start: 201609
  618. DEXAMETHASONE [Concomitant]
     Active Substance: DEXAMETHASONE
     Dosage: 2 MG, EVERY 1 DAY
     Dates: start: 20200111
  619. DEXAMETHASONE [Concomitant]
     Active Substance: DEXAMETHASONE
     Dosage: 2 MG, EVERY 1 DAY (2 MILLIGRAM, QD, START 11-JAN-2018)
     Dates: start: 20160722, end: 20160805
  620. DEXAMETHASONE [Concomitant]
     Active Substance: DEXAMETHASONE
     Dosage: UNK
     Dates: start: 20170902, end: 20180110
  621. DEXAMETHASONE [Concomitant]
     Active Substance: DEXAMETHASONE
     Dosage: 8 MG, QD; ; (CUMULATIVE DOSE TO FIRST REACTION: 16 MG)
     Dates: start: 20160610, end: 20160611
  622. DEXAMETHASONE [Concomitant]
     Active Substance: DEXAMETHASONE
     Dosage: 4 MG, TWICE DAILY (CUMULATIVE DOSE OF FIRST REACTION: 1078 MG)
     Route: 042
     Dates: start: 20160722, end: 20160723
  623. DEXAMETHASONE [Concomitant]
     Active Substance: DEXAMETHASONE
     Dosage: 4 MG; EVERY 12 HOURS (CUMULATIVE DOSE TO FIRST REACTION: 16 MG)
     Dates: start: 20170616, end: 20170902
  624. DEXAMETHASONE [Concomitant]
     Active Substance: DEXAMETHASONE
     Dosage: 110 MG, QD
     Dates: start: 20160825, end: 20160914
  625. DEXAMETHASONE [Concomitant]
     Active Substance: DEXAMETHASONE
     Dosage: 400 MG
     Dates: start: 20160723, end: 20160723
  626. DICLOFENAC POTASSIUM [Concomitant]
     Active Substance: DICLOFENAC POTASSIUM
     Indication: Product used for unknown indication
     Dosage: UNK UNK, QD/ DAILY
     Route: 048
     Dates: start: 20160722, end: 20160723
  627. DICLOFENAC POTASSIUM [Concomitant]
     Active Substance: DICLOFENAC POTASSIUM
     Dosage: UNK
  628. BENZYDAMINE [Concomitant]
     Active Substance: BENZYDAMINE
     Indication: Product used for unknown indication
     Dosage: UNK, QD (CUMULATIVE DOSE TO FIRST REACTION: 2350 MG)
     Route: 048
     Dates: start: 20160722, end: 20160723
  629. BENZYDAMINE [Concomitant]
     Active Substance: BENZYDAMINE
     Dosage: UNK (CUMULATIVE DOSE TO FIRST REACTION: 2350 MG)
     Route: 065
     Dates: start: 20160722, end: 20170619
  630. BENZYDAMINE [Concomitant]
     Active Substance: BENZYDAMINE
     Dosage: 110 MG (CUMULATIVE DOSE TO FIRST REACTION: 3740.0 MG)
     Dates: start: 20160825, end: 20160914
  631. BENZYDAMINE [Concomitant]
     Active Substance: BENZYDAMINE
     Dosage: 40 MG, QD
     Dates: start: 20160723, end: 20160723
  632. BENZYDAMINE [Concomitant]
     Active Substance: BENZYDAMINE
     Dosage: UNK, QD (CUMULATIVE DOSE TO FIRST REACTION: 2350 MG)
     Route: 065
     Dates: start: 20160722, end: 20160723
  633. BENZYDAMINE [Concomitant]
     Active Substance: BENZYDAMINE
     Dosage: UNK
     Dates: start: 20160722, end: 20160723
  634. DOCUSATE [Concomitant]
     Active Substance: DOCUSATE
     Indication: Product used for unknown indication
     Dosage: UNK
     Dates: start: 20160722, end: 20160724
  635. DOCUSATE [Concomitant]
     Active Substance: DOCUSATE
     Dosage: 20 MG, QD
     Route: 048
     Dates: start: 20160722, end: 20160724
  636. DOCUSATE [Concomitant]
     Active Substance: DOCUSATE
     Dosage: 20 MG, 1X/DAY (CUMULATIVE DOSE TO FIRST REACTION: 60 MG)
     Dates: start: 20160722, end: 20160724
  637. DOCUSATE [Concomitant]
     Active Substance: DOCUSATE
     Dosage: 20 MG, 1X/DAY
     Dates: start: 20160722, end: 20160724
  638. DOCUSATE [Concomitant]
     Active Substance: DOCUSATE
     Dosage: 20 MILLIGRAM, QD (CUMULATIVE DOSE TO FIRST REACTION: 20.0 MG)
     Dates: start: 20160722, end: 20160724
  639. DOCUSATE [Concomitant]
     Active Substance: DOCUSATE
     Dosage: UNK; ;
  640. ENOXAPARIN [Concomitant]
     Active Substance: ENOXAPARIN
     Indication: Product used for unknown indication
     Dosage: 40 MG, QD (CUMULATIVE DOSE TO FIRST REACTION: 29880.0 MG)
     Route: 058
     Dates: start: 20180105, end: 20180117
  641. ENOXAPARIN [Concomitant]
     Active Substance: ENOXAPARIN
     Dosage: 1200 MILLIGRAM, QD (START 12-FEB-2018)
     Route: 058
     Dates: start: 20180212, end: 20180212
  642. ENOXAPARIN [Concomitant]
     Active Substance: ENOXAPARIN
     Dosage: 40 MILLIGRAM, QD, START 14-FEB-2018
     Route: 058
     Dates: start: 20180214, end: 20180218
  643. ENOXAPARIN [Concomitant]
     Active Substance: ENOXAPARIN
     Dosage: 40 MG, QD
     Route: 058
     Dates: start: 20170616, end: 20170623
  644. ENOXAPARIN [Concomitant]
     Active Substance: ENOXAPARIN
     Dosage: 40 MG, QD
     Route: 058
     Dates: start: 20160817, end: 20160914
  645. ENOXAPARIN [Concomitant]
     Active Substance: ENOXAPARIN
     Dosage: 120 MG, QD
     Route: 058
  646. ENOXAPARIN [Concomitant]
     Active Substance: ENOXAPARIN
     Dosage: 120 MG, QD(CUMULATIVE DOSE TO FIRST REACTION: 85080.0 MG)
     Route: 058
     Dates: start: 20180212, end: 20180212
  647. ENOXAPARIN [Concomitant]
     Active Substance: ENOXAPARIN
     Dosage: UNK UNK, QD
     Route: 058
     Dates: start: 20180214, end: 20180218
  648. ENOXAPARIN [Concomitant]
     Active Substance: ENOXAPARIN
     Dosage: 40 MG, QD (CUMULATIVE DOSE: 22881.666 MG) DAILY
     Route: 058
     Dates: start: 20180214, end: 20180218
  649. ENOXAPARIN [Concomitant]
     Active Substance: ENOXAPARIN
     Dosage: 40 MG, QD (CUMULATIVE DOSE: 21281.666 MG)
     Route: 058
     Dates: start: 20180105, end: 20180117
  650. ENOXAPARIN [Concomitant]
     Active Substance: ENOXAPARIN
     Dosage: 40 MG, QD (CUMULATIVE DOSE: 1040.0 MG)
     Route: 058
     Dates: start: 20160817, end: 20160914
  651. ENOXAPARIN [Concomitant]
     Active Substance: ENOXAPARIN
     Dosage: UNK
     Route: 058
     Dates: start: 20180214, end: 20180218
  652. ENOXAPARIN [Concomitant]
     Active Substance: ENOXAPARIN
     Dosage: 40 MILLIGRAM
     Route: 058
     Dates: start: 20160817, end: 20160914
  653. ENOXAPARIN [Concomitant]
     Active Substance: ENOXAPARIN
     Dosage: 1200 MILLIGRAM, QD (CUMULATIVE DOSE: 684050.0 MG)
     Route: 058
     Dates: start: 20180212, end: 20180212
  654. ENOXAPARIN [Concomitant]
     Active Substance: ENOXAPARIN
     Dosage: UNK; ;
     Route: 065
     Dates: start: 20160623, end: 20160623
  655. ENOXAPARIN [Concomitant]
     Active Substance: ENOXAPARIN
     Dosage: 40 MG
     Route: 058
     Dates: start: 20180105, end: 20180117
  656. ENOXAPARIN [Concomitant]
     Active Substance: ENOXAPARIN
     Dosage: 40 MILLIGRAM, QD (CUMULATIVE DOSE: 13160.0 MG)
     Route: 058
     Dates: start: 20170616, end: 20170623
  657. ENOXAPARIN [Concomitant]
     Active Substance: ENOXAPARIN
     Dosage: 40 MG, QD
     Route: 058
     Dates: start: 20180212, end: 20180212
  658. ENOXAPARIN [Concomitant]
     Active Substance: ENOXAPARIN
     Dosage: 40 MG (CUMULATIVE DOSE: 50121.668 MG)
     Route: 058
     Dates: start: 20160817, end: 20160914
  659. ENOXAPARIN [Concomitant]
     Active Substance: ENOXAPARIN
     Dosage: 1200 MG (CUMULATIVE DOSE: 850800.0 MG)
     Route: 058
     Dates: start: 20180212, end: 20180212
  660. ENOXAPARIN [Concomitant]
     Active Substance: ENOXAPARIN
     Dosage: DAILY (CUMULATIVE DOSE: 28280.0 MG)
     Route: 058
     Dates: start: 20180214, end: 20180214
  661. ENOXAPARIN [Concomitant]
     Active Substance: ENOXAPARIN
     Dosage: 40 MG (CUMULATIVE DOSE: 29880.0 MG)
     Route: 058
     Dates: start: 20180105, end: 20180117
  662. ENOXAPARIN [Concomitant]
     Active Substance: ENOXAPARIN
     Dosage: 40 MG (CUMULATIVE DOSE: 49801.668 MG)
     Route: 058
     Dates: start: 20160825, end: 20160914
  663. ENOXAPARIN [Concomitant]
     Active Substance: ENOXAPARIN
     Dosage: 40 MG (CUMULATIVE DOSE: 38001.668 MG)
     Route: 058
     Dates: start: 20170616, end: 20170623
  664. ENOXAPARIN [Concomitant]
     Active Substance: ENOXAPARIN
     Dosage: 40 MILLIGRAM, QD, CUMULATIVE DOSE TO FIRST REACTION: 1360.0 MG
     Route: 058
     Dates: start: 20160825, end: 20160914
  665. ENOXAPARIN [Concomitant]
     Active Substance: ENOXAPARIN
     Dosage: 40 MILLIGRAM, QD, CUMULATIVE DOSE TO FIRST REACTION: 13160.0 MG
     Route: 058
     Dates: start: 20160616, end: 20160623
  666. ENOXAPARIN [Concomitant]
     Active Substance: ENOXAPARIN
     Dosage: 120 MG, QD (CUMULATIVE DOSE TO FIRST REACTION: 68645.0 MG)
     Route: 058
     Dates: start: 20180214, end: 20180218
  667. ENOXAPARIN [Concomitant]
     Active Substance: ENOXAPARIN
     Dosage: UNK
     Route: 058
     Dates: start: 20160723, end: 20180218
  668. ENOXAPARIN [Concomitant]
     Active Substance: ENOXAPARIN
     Dosage: UNK
     Route: 058
     Dates: start: 20160723, end: 20180218
  669. ENOXAPARIN [Concomitant]
     Active Substance: ENOXAPARIN
     Dosage: UNK
     Route: 058
     Dates: start: 20160825, end: 20160914
  670. ENOXAPARIN [Concomitant]
     Active Substance: ENOXAPARIN
     Dosage: 120 MG, EVERY 1 DAY (CUMULATIVE DOSE TO FIRST REACTION: 3320 MG)
     Dates: start: 20180212, end: 20180212
  671. ENOXAPARIN [Concomitant]
     Active Substance: ENOXAPARIN
     Dosage: 1200 MG, EVERY 1 DAY
     Route: 058
     Dates: start: 20180212, end: 20180212
  672. ENOXAPARIN [Concomitant]
     Active Substance: ENOXAPARIN
     Dosage: 40 MG, EVERY 1 DAY (CUMULATIVE DOSE TO FIRST REACTION: 3320 MG)
     Route: 058
     Dates: start: 20180214, end: 20180218
  673. ENOXAPARIN [Concomitant]
     Active Substance: ENOXAPARIN
     Dosage: 40 MG, EVERY 1 DAY (CUMULATIVE DOSE TO FIRST REACTION: 3320 MG)
     Dates: start: 20180105, end: 20180115
  674. ENOXAPARIN [Concomitant]
     Active Substance: ENOXAPARIN
     Dosage: 110 MG, EVERY 1 DAY (CUMULATIVE DOSE TO FIRST REACTION: 3320 MG)
     Dates: start: 20160825, end: 20160914
  675. ENOXAPARIN [Concomitant]
     Active Substance: ENOXAPARIN
     Dosage: 40 MG, EVERY 1 DAY
     Route: 058
     Dates: start: 20160817, end: 20160914
  676. ENOXAPARIN [Concomitant]
     Active Substance: ENOXAPARIN
     Dosage: 40 MG (CUMULATIVE DOSE: 28280.0 MG)
     Route: 065
     Dates: start: 20180214, end: 20180918
  677. ENOXAPARIN [Concomitant]
     Active Substance: ENOXAPARIN
     Dosage: 40 MG, QD (CUMULATIVE DOSE: 50121.668 MG)
     Route: 058
     Dates: start: 20160817, end: 20160914
  678. ENOXAPARIN [Concomitant]
     Active Substance: ENOXAPARIN
     Dosage: UNK
     Route: 065
     Dates: start: 20180214, end: 20180918
  679. ENOXAPARIN SODIUM [Concomitant]
     Active Substance: ENOXAPARIN SODIUM
     Dosage: UNK; ;
     Dates: start: 20160723, end: 20160723
  680. ENOXAPARIN SODIUM [Concomitant]
     Active Substance: ENOXAPARIN SODIUM
     Dosage: 40 MG, QD
     Route: 058
     Dates: start: 20160817, end: 20160914
  681. ENOXAPARIN SODIUM [Concomitant]
     Active Substance: ENOXAPARIN SODIUM
     Dosage: 1200 MG, QD
     Route: 058
     Dates: start: 20180212, end: 20180212
  682. ENOXAPARIN SODIUM [Concomitant]
     Active Substance: ENOXAPARIN SODIUM
     Dosage: 40 MG, QD
     Route: 058
     Dates: start: 20180105, end: 20180117
  683. ENOXAPARIN SODIUM [Concomitant]
     Active Substance: ENOXAPARIN SODIUM
     Dosage: 40 MG, QD
     Route: 058
     Dates: start: 20170616, end: 20170623
  684. ENOXAPARIN SODIUM [Concomitant]
     Active Substance: ENOXAPARIN SODIUM
     Dosage: UNK UNK, QD;
     Route: 058
     Dates: start: 20180214, end: 20180218
  685. ENOXAPARIN SODIUM [Concomitant]
     Active Substance: ENOXAPARIN SODIUM
     Dosage: UNK; ;
     Dates: start: 20160825, end: 20160914
  686. ENOXAPARIN SODIUM [Concomitant]
     Active Substance: ENOXAPARIN SODIUM
     Dosage: 40 MG, QD
     Route: 058
     Dates: start: 20180214, end: 20180218
  687. ENOXAPARIN SODIUM [Concomitant]
     Active Substance: ENOXAPARIN SODIUM
     Dosage: 120 MG, QD
     Route: 058
  688. FILGRASTIM [Concomitant]
     Active Substance: FILGRASTIM
     Indication: Product used for unknown indication
     Dosage: 300 MICROGRAM (START 31-JUL-2016)
     Route: 065
     Dates: start: 20160731, end: 20161112
  689. FILGRASTIM [Concomitant]
     Active Substance: FILGRASTIM
     Dosage: 300 MICROGRAM
     Route: 065
     Dates: start: 20160731, end: 20161112
  690. FILGRASTIM [Concomitant]
     Active Substance: FILGRASTIM
     Dosage: 300 MICROGRAM
     Route: 065
     Dates: start: 20160731, end: 20161112
  691. FILGRASTIM [Concomitant]
     Active Substance: FILGRASTIM
     Dosage: UNK
     Route: 065
     Dates: start: 20161009, end: 20161017
  692. GENTAMICIN [Concomitant]
     Active Substance: GENTAMICIN
     Indication: Product used for unknown indication
     Dosage: 400 MILLIGRAM, BID
     Route: 042
     Dates: start: 20180212, end: 20180212
  693. GENTAMICIN [Concomitant]
     Active Substance: GENTAMICIN
     Dosage: 375MG, QD (375MG, QD, START 09-OCT-2016)
     Route: 042
     Dates: start: 20161009, end: 20161009
  694. GENTAMICIN [Concomitant]
     Active Substance: GENTAMICIN
     Dosage: 800 MG (400 MG, BID), 800 MILLIGRAM, QD (START DATE: 12-FEB-2018)
     Route: 042
     Dates: start: 20180212, end: 20180212
  695. GENTAMICIN [Concomitant]
     Active Substance: GENTAMICIN
     Dosage: 800 MILLIGRAM, BID(400 MG, BID,START12-FEB-2018
     Route: 042
     Dates: start: 20180212, end: 20180212
  696. GENTAMICIN [Concomitant]
     Active Substance: GENTAMICIN
     Dosage: 400 MG, BID
     Route: 042
     Dates: start: 20180212, end: 20180212
  697. GENTAMICIN [Concomitant]
     Active Substance: GENTAMICIN
     Dosage: 800 MILLIGRAM, BID 400 MILLIGRAM, BID, 12-FEB-2018 )
     Route: 042
     Dates: start: 20180212, end: 20180212
  698. GENTAMICIN [Concomitant]
     Active Substance: GENTAMICIN
     Dosage: 375 MG, QD (CUMULATIVE DOSE TO FIRST REACTION: 1175 MG)
     Dates: start: 20161009, end: 20161009
  699. GENTAMICIN [Concomitant]
     Active Substance: GENTAMICIN
     Dosage: 800 MG (400 MG, BID), 800 MILLIGRAM, QD (START DATE: 12-FEB-2018)
     Dates: start: 20180212, end: 20180212
  700. GENTAMICIN [Concomitant]
     Active Substance: GENTAMICIN
     Dosage: 375 MG, QD
     Dates: start: 20161009, end: 20161009
  701. HYDROCORTISONE [Concomitant]
     Active Substance: HYDROCORTISONE
     Indication: Product used for unknown indication
     Dosage: 100 MG
     Route: 042
     Dates: start: 20160928
  702. HYDROCORTISONE [Concomitant]
     Active Substance: HYDROCORTISONE
     Dosage: 100 MG, QD
     Route: 042
     Dates: start: 20160907, end: 20160907
  703. HYDROCORTISONE [Concomitant]
     Active Substance: HYDROCORTISONE
     Dosage: 100 MG
     Route: 042
  704. HYDROCORTISONE [Concomitant]
     Active Substance: HYDROCORTISONE
     Dosage: 500 MG PER 0.5 DAY;
     Route: 058
     Dates: start: 20170617
  705. HYDROCORTISONE [Concomitant]
     Active Substance: HYDROCORTISONE
     Dosage: 1 G;
     Route: 042
     Dates: start: 20170616, end: 20170616
  706. HYDROCORTISONE [Concomitant]
     Active Substance: HYDROCORTISONE
     Dosage: 500 MILLIGRAM PER 0.5 DAY (START: 17-JUN-2017)
     Route: 042
     Dates: start: 20170616, end: 20170616
  707. HYDROCORTISONE [Concomitant]
     Active Substance: HYDROCORTISONE
     Dosage: 500 MG
     Route: 042
     Dates: start: 20170617
  708. HYDROCORTISONE [Concomitant]
     Active Substance: HYDROCORTISONE
     Dosage: 100 MG
     Route: 042
     Dates: start: 20160907, end: 20160907
  709. HYDROCORTISONE [Concomitant]
     Active Substance: HYDROCORTISONE
     Dosage: 100 MILLIGRAM
     Route: 042
     Dates: start: 20160928
  710. HYDROCORTISONE [Concomitant]
     Active Substance: HYDROCORTISONE
     Dosage: 100 MILLIGRAM
     Dates: start: 20160928
  711. HYDROCORTISONE [Concomitant]
     Active Substance: HYDROCORTISONE
     Dosage: 100 MG
     Route: 042
     Dates: start: 20160907, end: 20160907
  712. HYDROCORTISONE [Concomitant]
     Active Substance: HYDROCORTISONE
     Dosage: 500 MG PER 0.5 DAY. (START: 17-JUN-2017);
     Route: 042
     Dates: start: 20170617
  713. HYDROCORTISONE [Concomitant]
     Active Substance: HYDROCORTISONE
     Dosage: 500 MG;
     Route: 042
     Dates: start: 20160616, end: 20160616
  714. HYDROCORTISONE [Concomitant]
     Active Substance: HYDROCORTISONE
     Dosage: 1 G
     Route: 065
     Dates: start: 20160616, end: 20160616
  715. LANSOPRAZOLE [Concomitant]
     Active Substance: LANSOPRAZOLE
     Indication: Product used for unknown indication
     Dosage: 30 MILLIGRAM, QD (CUMULATIVE DOSE: 30 MG)
     Route: 048
     Dates: start: 20161010
  716. LANSOPRAZOLE [Concomitant]
     Active Substance: LANSOPRAZOLE
     Dosage: 30 MILLIGRAM, QD, START 09-AUG-2016 (CUMULATIVE DOSE: 30 MG)
     Route: 048
     Dates: start: 20160809
  717. LANSOPRAZOLE [Concomitant]
     Active Substance: LANSOPRAZOLE
     Dosage: 30 MILLIGRAM, QD (CUMULATIVE DOSE: 30 MG
     Route: 048
     Dates: start: 20160722, end: 20160724
  718. LANSOPRAZOLE [Concomitant]
     Active Substance: LANSOPRAZOLE
     Dosage: 30 MILLIGRAM
     Dates: start: 20160809
  719. LANSOPRAZOLE [Concomitant]
     Active Substance: LANSOPRAZOLE
     Dosage: 30 MG, EVERY 1 DAY (CUMULATIVE DOSE TO FIRST REACTION: 90 MG)
     Dates: start: 20160724
  720. LANSOPRAZOLE [Concomitant]
     Active Substance: LANSOPRAZOLE
     Dosage: 30 MILLIGRAM, QD, START 09-AUG-2016 (CUMULATIVE DOSE TO FIRST REACTION: 90 MG)
     Dates: start: 20160722, end: 20160724
  721. LANSOPRAZOLE [Concomitant]
     Active Substance: LANSOPRAZOLE
     Dosage: 30 MG; (CUMULATIVE DOSE TO FIRST REACTION: 90 MG)
     Dates: start: 20161010
  722. LANSOPRAZOLE [Concomitant]
     Active Substance: LANSOPRAZOLE
     Dosage: 30 MG; ; (CUMULATIVE DOSE TO FIRST REACTION: 90 MG)
     Dates: start: 20160809
  723. LEVETIRACETAM [Concomitant]
     Active Substance: LEVETIRACETAM
     Indication: Product used for unknown indication
     Dosage: 1 G, QD, 1 GRAM (START 16-JUN-2017)
     Route: 042
     Dates: start: 20170616, end: 20170616
  724. LEVETIRACETAM [Concomitant]
     Active Substance: LEVETIRACETAM
     Dosage: 500 MG PER 0.5 DAY
     Route: 058
     Dates: start: 20170617
  725. LEVETIRACETAM [Concomitant]
     Active Substance: LEVETIRACETAM
     Dosage: 1 G, QD (EVERY 1 DAY), 1 GRAM, START 17-JUN-2017
     Route: 048
     Dates: start: 20170617
  726. LEVETIRACETAM [Concomitant]
     Active Substance: LEVETIRACETAM
     Dosage: 1000 MG, QD
     Route: 058
     Dates: start: 20170617
  727. LEVETIRACETAM [Concomitant]
     Active Substance: LEVETIRACETAM
     Dosage: 1 G, EVERY 1 DAY (CUMULATIVE DOSE: 330.0 G)
     Route: 042
     Dates: start: 20170617
  728. LEVETIRACETAM [Concomitant]
     Active Substance: LEVETIRACETAM
     Dosage: 1000 MG (CUMULATIVE DOSE: 330000.0 MG)
     Route: 058
     Dates: start: 20170617
  729. LEVETIRACETAM [Concomitant]
     Active Substance: LEVETIRACETAM
     Dosage: UNK; ;
     Dates: start: 20161009, end: 20161017
  730. LEVETIRACETAM [Concomitant]
     Active Substance: LEVETIRACETAM
     Dosage: 500 MG, BID
     Route: 042
     Dates: start: 20170617
  731. LEVETIRACETAM [Concomitant]
     Active Substance: LEVETIRACETAM
     Dosage: UNK; ;
     Route: 065
     Dates: start: 20161009, end: 20161017
  732. LEVETIRACETAM [Concomitant]
     Active Substance: LEVETIRACETAM
     Dosage: 500 MG, 2X/DAY, 500 MILLIGRAM, BID (START 17-JUN-2017)
     Route: 058
     Dates: start: 20170617
  733. LEVETIRACETAM [Concomitant]
     Active Substance: LEVETIRACETAM
     Dosage: 1 G, EVERY 1 DAY
     Route: 042
     Dates: start: 20161009, end: 20161017
  734. LEVETIRACETAM [Concomitant]
     Active Substance: LEVETIRACETAM
     Dosage: 1 GRAM
     Route: 042
     Dates: start: 20161009, end: 20161017
  735. LEVETIRACETAM [Concomitant]
     Active Substance: LEVETIRACETAM
     Dosage: 1 GRAM
     Route: 042
     Dates: start: 20170616, end: 20170616
  736. LEVETIRACETAM [Concomitant]
     Active Substance: LEVETIRACETAM
     Dosage: 500 MG (CUMULATIVE DOSE: 949041.7 MG)
     Route: 042
     Dates: start: 20170617, end: 20170617
  737. LEVETIRACETAM [Concomitant]
     Active Substance: LEVETIRACETAM
     Dosage: UNK
     Route: 042
     Dates: start: 20170908, end: 20170925
  738. LEVETIRACETAM [Concomitant]
     Active Substance: LEVETIRACETAM
     Dosage: 500 MG (CUMULATIVE DOSE: 949041.7 MG)
     Route: 042
     Dates: start: 20170617
  739. LEVETIRACETAM [Concomitant]
     Active Substance: LEVETIRACETAM
     Dosage: 500 MG, EVERY 12 HOURS, CUMULATIVE DOSE TO FIRST REACTION: 330000.0 MG
     Route: 042
     Dates: start: 20170617, end: 20170617
  740. LEVETIRACETAM [Concomitant]
     Active Substance: LEVETIRACETAM
     Dosage: 500 MG, EVERY 12 HOURS, CUMULATIVE DOSE TO FIRST REACTION: 330000.0 MG
     Route: 042
     Dates: start: 20170617
  741. LEVETIRACETAM [Concomitant]
     Active Substance: LEVETIRACETAM
     Dosage: 500 MILLIGRAM, BID (START 17-JUN-2017)
     Route: 042
     Dates: start: 20170617
  742. LEVETIRACETAM [Concomitant]
     Active Substance: LEVETIRACETAM
     Dosage: 1000 MILLIGRAM, QD (START 17-JUN-2017)
     Route: 048
     Dates: start: 20170617
  743. LEVETIRACETAM [Concomitant]
     Active Substance: LEVETIRACETAM
     Dosage: UNK
     Route: 058
     Dates: start: 20170908, end: 20170925
  744. LEVETIRACETAM [Concomitant]
     Active Substance: LEVETIRACETAM
     Dosage: 1 GRAM
     Dates: start: 20170616, end: 20170616
  745. LEVETIRACETAM [Concomitant]
     Active Substance: LEVETIRACETAM
     Dosage: 1 G (CUMULATIVE DOSE TO FIRST REACTION: 330 G)
     Route: 042
     Dates: start: 20161009, end: 20161017
  746. LEVETIRACETAM [Concomitant]
     Active Substance: LEVETIRACETAM
     Dosage: 500 MILLIGRAM, BID (START 17-JUN-2017) (CUMULATIVE DOSE TO FIRST REACTION: 330 G)
     Route: 042
     Dates: start: 20170616, end: 20170616
  747. LEVETIRACETAM [Concomitant]
     Active Substance: LEVETIRACETAM
     Dosage: 1 G, EVERY 1 DAY (CUMULATIVE DOSE TO FIRST REACTION: 330 G)
     Route: 042
     Dates: start: 20170617
  748. LEVETIRACETAM [Concomitant]
     Active Substance: LEVETIRACETAM
     Dosage: 330 MG (DOSAGE TEXT: UNK;) (CUMULATIVE DOSE TO FIRST REACTION: 330 G)
     Dates: start: 20160109, end: 20160117
  749. LEVETIRACETAM [Concomitant]
     Active Substance: LEVETIRACETAM
     Dosage: 500 MILLIGRAM; (CUMULATIVE DOSE: 474520.84 MG)
     Route: 042
     Dates: start: 20170617, end: 20170617
  750. LEVETIRACETAM [Concomitant]
     Active Substance: LEVETIRACETAM
     Dosage: 1000 MG, QD
     Route: 042
     Dates: start: 20170617
  751. LEVETIRACETAM [Concomitant]
     Active Substance: LEVETIRACETAM
     Dosage: 500 MG, EVERY 12 HOURS, TWICE PER DAY
     Route: 058
     Dates: start: 20170617
  752. LEVETIRACETAM [Concomitant]
     Active Substance: LEVETIRACETAM
     Dosage: 1000 MG, QD
     Route: 048
     Dates: start: 20170617
  753. LEVETIRACETAM [Concomitant]
     Active Substance: LEVETIRACETAM
     Dosage: 500 MG, EVERY 12 HOURS, TWICE PER DAY
     Route: 058
     Dates: start: 20170617
  754. LEVOFLOXACIN [Concomitant]
     Active Substance: LEVOFLOXACIN
     Indication: Product used for unknown indication
     Dosage: UNKNOWN, UNK (START 09-OCT-2016)
     Route: 065
     Dates: start: 20161009, end: 20161017
  755. LEVOFLOXACIN [Concomitant]
     Active Substance: LEVOFLOXACIN
     Dosage: UNK
     Route: 065
     Dates: start: 20161009, end: 20161017
  756. LEVOFLOXACIN [Concomitant]
     Active Substance: LEVOFLOXACIN
     Dosage: UNK; ;
     Dates: start: 20160109, end: 20160117
  757. LEVOMEPROMAZINE [Concomitant]
     Active Substance: LEVOMEPROMAZINE
     Indication: Product used for unknown indication
     Dosage: 6.25 MILLIGRAM (START 17-JUN-2017)
     Route: 058
     Dates: start: 20170617, end: 20170617
  758. LEVOMEPROMAZINE [Concomitant]
     Active Substance: LEVOMEPROMAZINE
     Dosage: UNK
     Route: 065
     Dates: start: 20170908, end: 20170925
  759. LEVOMEPROMAZINE [Concomitant]
     Active Substance: LEVOMEPROMAZINE
     Dosage: 6 MG
     Route: 058
     Dates: start: 20170617, end: 20170617
  760. LEVOMEPROMAZINE [Concomitant]
     Active Substance: LEVOMEPROMAZINE
     Dosage: 6 MG, QD
     Route: 058
     Dates: start: 20170908, end: 20170925
  761. LEVOMEPROMAZINE [Concomitant]
     Active Substance: LEVOMEPROMAZINE
     Dosage: UNK
     Route: 058
     Dates: start: 20170918, end: 20170925
  762. LEVOMEPROMAZINE [Concomitant]
     Active Substance: LEVOMEPROMAZINE
     Dosage: 6 MG (CUMULATIVE DOSE: 5196.25 MG)
     Route: 058
     Dates: start: 20170908, end: 20170925
  763. LEVOMEPROMAZINE [Concomitant]
     Active Substance: LEVOMEPROMAZINE
     Dosage: 6 MG, QD
     Route: 058
     Dates: start: 20170617, end: 20170617
  764. LEVOMEPROMAZINE [Concomitant]
     Active Substance: LEVOMEPROMAZINE
     Dosage: 6 MG CUMULATIVE DOSE TO FIRST REACTION: 2478.0 MG
     Route: 058
     Dates: start: 20170908, end: 20170925
  765. LEVOMEPROMAZINE [Concomitant]
     Active Substance: LEVOMEPROMAZINE
     Dosage: 6.25 MILLIGRAM (START 17-JUN-2017) (CUMULATIVE DOSE TO FIRST REACTION: 108 MG)
     Route: 058
     Dates: start: 20170617, end: 20170617
  766. LEVOMEPROMAZINE [Concomitant]
     Active Substance: LEVOMEPROMAZINE
     Dosage: UNK (START 08-SEP-2017)/6 MILLIGRAM, QD
     Route: 065
     Dates: start: 20170908, end: 20170925
  767. LEVOMEPROMAZINE [Concomitant]
     Active Substance: LEVOMEPROMAZINE
     Dosage: 6.25 MG;
     Route: 058
     Dates: start: 20170617, end: 20170617
  768. LEVOMEPROMAZINE [Concomitant]
     Active Substance: LEVOMEPROMAZINE
     Dosage: 6 MG
     Route: 058
     Dates: start: 20170617, end: 20170617
  769. LEVOMEPROMAZINE [Concomitant]
     Active Substance: LEVOMEPROMAZINE
     Dosage: UNK
     Route: 065
     Dates: start: 20170917, end: 20170917
  770. METOCLOPRAMIDE [Concomitant]
     Active Substance: METOCLOPRAMIDE
     Indication: Product used for unknown indication
     Dosage: 10 MG
     Route: 048
     Dates: start: 20180131
  771. METOCLOPRAMIDE [Concomitant]
     Active Substance: METOCLOPRAMIDE
     Dosage: 10 MG/10 UNK;
     Route: 048
     Dates: start: 20180106, end: 20180106
  772. METOCLOPRAMIDE [Concomitant]
     Active Substance: METOCLOPRAMIDE
     Dosage: 10 MG/10 UNK;
     Route: 048
     Dates: start: 20160610, end: 20161111
  773. METOCLOPRAMIDE [Concomitant]
     Active Substance: METOCLOPRAMIDE
     Dosage: 10 MG
     Route: 048
     Dates: start: 20160610, end: 20161111
  774. METOCLOPRAMIDE [Concomitant]
     Active Substance: METOCLOPRAMIDE
     Dosage: 10 MG
     Route: 048
     Dates: start: 20180106, end: 20180106
  775. METOCLOPRAMIDE [Concomitant]
     Active Substance: METOCLOPRAMIDE
     Dosage: 10 MG
     Route: 048
     Dates: start: 20160610, end: 20161111
  776. MEROPENEM [Concomitant]
     Active Substance: MEROPENEM
     Indication: Product used for unknown indication
     Dosage: 1 GRAM (START 09-AUG-2016)
     Route: 042
     Dates: start: 20160809, end: 20160817
  777. MEROPENEM [Concomitant]
     Active Substance: MEROPENEM
     Dosage: 1 G
     Route: 042
     Dates: start: 20160809, end: 20160817
  778. MEROPENEM [Concomitant]
     Active Substance: MEROPENEM
     Dosage: 1 G
     Dates: start: 20160809, end: 20160817
  779. MORPHINE SULFATE [Concomitant]
     Active Substance: MORPHINE SULFATE
     Dosage: 15 MG, EVERY 12 HOURS
     Route: 048
     Dates: start: 20180213, end: 20180217
  780. MORPHINE SULFATE [Concomitant]
     Active Substance: MORPHINE SULFATE
     Dosage: 15 MG, EVERY 12 HOURS (CUMULATIVE DOSE TO FIRST REACTION: 17131.25 MG)
     Route: 048
     Dates: start: 20180213, end: 20180217
  781. MORPHINE SULFATE [Concomitant]
     Active Substance: MORPHINE SULFATE
     Dosage: 3 MG
     Route: 048
     Dates: start: 20160828
  782. ONDANSETRON [Concomitant]
     Active Substance: ONDANSETRON
     Indication: Product used for unknown indication
     Dosage: 8 MG, TID, (3/D)
     Route: 048
     Dates: start: 20170902
  783. ONDANSETRON [Concomitant]
     Active Substance: ONDANSETRON
     Dosage: 8 MILLIGRAM (8 MILLIGRAM 3/D, START 16-JUN-2017)
     Dates: start: 20170616, end: 20170626
  784. ONDANSETRON [Concomitant]
     Active Substance: ONDANSETRON
     Dosage: 24 MILLIGRAM(24 MG, QD (8 MG, TID)START16-JUN-2017 )
     Route: 048
     Dates: start: 20170616, end: 20170626
  785. ONDANSETRON [Concomitant]
     Active Substance: ONDANSETRON
     Dosage: 72 MILLIGRAM (8 MG, TID), START 16-JUN-2017
     Route: 048
     Dates: start: 20170616, end: 20170626
  786. ONDANSETRON [Concomitant]
     Active Substance: ONDANSETRON
     Dosage: 8 MG, TID
     Route: 048
     Dates: start: 20170616, end: 20170626
  787. ONDANSETRON [Concomitant]
     Active Substance: ONDANSETRON
     Dosage: 8 MG (CUMULATIVE DOSE: 9768MG)
     Dates: start: 20170902
  788. ONDANSETRON [Concomitant]
     Active Substance: ONDANSETRON
     Dosage: 8 MILLIGRAM
     Route: 048
     Dates: start: 20170902
  789. ONDANSETRON [Concomitant]
     Active Substance: ONDANSETRON
     Dosage: 8 MILLIGRAM (8 MILLIGRAM 3/D, START 16-JUN-2017) (CUMULATIVE DOSE TO FIRST REACTION: 792 MG)
     Route: 048
     Dates: start: 20170626
  790. ONDANSETRON [Concomitant]
     Active Substance: ONDANSETRON
     Dosage: 8 MILLIGRAM (8 MILLIGRAM 3/D, START 16-JUN-2017) (CUMULATIVE DOSE TO FIRST REACTION: 792 MG)
     Route: 048
  791. ONDANSETRON [Concomitant]
     Active Substance: ONDANSETRON
     Dosage: 72 MILLIGRAM(8 MG, TID), START 16-JUN-2017 (CUMULATIVE DOSE TO FIRST REACTION: 792 MG)
     Route: 048
     Dates: start: 20170626
  792. ONDANSETRON [Concomitant]
     Active Substance: ONDANSETRON
     Dosage: 24 MILLIGRAM, TID (8 MG, TID) (CUMULATIVE DOSE TO FIRST REACTION: 792 MG)
     Route: 048
     Dates: start: 20160616, end: 20160626
  793. ONDANSETRON [Concomitant]
     Active Substance: ONDANSETRON
     Dosage: 24 MILLIGRAM(24 MG, QD (8 MG, TID)START16-JUN-2017 ) (CUMULATIVE DOSE TO FIRST REACTION: 792 MG)
     Route: 048
     Dates: start: 20170626
  794. ONDANSETRON [Concomitant]
     Active Substance: ONDANSETRON
     Dosage: 8 MG, TID (CUMULATIVE DOSE TO FIRST REACTION: 264 MG)
     Dates: start: 20170616, end: 20170626
  795. ONDANSETRON [Concomitant]
     Active Substance: ONDANSETRON
     Dosage: 8 MILLIGRAM, TID (CUMULATIVE DOSE TO FIRST REACTION: 7896.0 MG)
     Route: 048
     Dates: start: 20170616, end: 20170626
  796. ONDANSETRON [Concomitant]
     Active Substance: ONDANSETRON
     Dosage: 8 MG, EVERY 1 DAY (8 MILLIGRAM (8 MILLIGRAM 3/D, START 02-SEP-2017) (CUMULATIVE DOSE TO FIRST REACTI
     Route: 048
     Dates: start: 20170916, end: 20170926
  797. ONDANSETRON [Concomitant]
     Active Substance: ONDANSETRON
     Dosage: EVERY 8 HOUR (8 MG;) (CUMULATIVE DOSE TO FIRST REACTION: 792 MG)
     Route: 048
     Dates: start: 20170902
  798. ONDANSETRON [Concomitant]
     Active Substance: ONDANSETRON
     Dosage: 8 MILLIGRAM, TID (CUMULATIVE DOSE TO FIRST REACTION: 22801.0 MG)
     Route: 048
     Dates: start: 20170616, end: 20170626
  799. ONDANSETRON [Concomitant]
     Active Substance: ONDANSETRON
     Dosage: 72 MG, QD, 24 MILLIGRAM, TID (8 MG, TID) (CUMULATIVE DOSE TO FIRST REACTION: 94683.0 MG)
     Route: 048
     Dates: start: 20160616, end: 20160626
  800. ONDANSETRON [Concomitant]
     Active Substance: ONDANSETRON
     Dosage: 8 MILLIGRAM, TID (CUMULATIVE DOSE TO FIRST REACTION: 31561.0 MG)
     Route: 048
     Dates: start: 20160616, end: 20160626
  801. ONDANSETRON [Concomitant]
     Active Substance: ONDANSETRON
     Dosage: 8 MG TID (CUMULATIVE DOSE: 20929.0 MG)
     Route: 048
     Dates: start: 20170902
  802. MORPHINE SULFATE [Concomitant]
     Active Substance: MORPHINE SULFATE
     Indication: Product used for unknown indication
     Dosage: 2.5 MILLIGRAM (START 28-AUG-2016) (CUMULATIVE DOSE TO FIRST REACTION: 150 MG)
     Route: 048
     Dates: start: 20160828
  803. MORPHINE SULFATE [Concomitant]
     Active Substance: MORPHINE SULFATE
     Dosage: 3 MG
     Route: 048
     Dates: start: 20160828
  804. MORPHINE SULFATE [Concomitant]
     Active Substance: MORPHINE SULFATE
     Dosage: 2.5 MG;
     Route: 048
  805. MORPHINE SULFATE [Concomitant]
     Active Substance: MORPHINE SULFATE
     Dosage: 2.5 MG (DOSE FORM: 245)
     Route: 048
     Dates: start: 20160828
  806. MORPHINE SULFATE [Concomitant]
     Active Substance: MORPHINE SULFATE
     Dosage: [MORPHINE SULFATE], UNK (START 28-AUG-2016) 2.5 MILLIGRAM (START 28-AUG-2016) (CUMULATIVE DOSE TO FI
     Route: 048
     Dates: start: 20160828
  807. MORPHINE SULFATE [Concomitant]
     Active Substance: MORPHINE SULFATE
     Dosage: 15 MILLIGRAM(15 MG, EVERY 12 HOUR/15 MG, BID), START 13-FEB-2018
     Route: 048
     Dates: start: 20180213, end: 20180217
  808. MORPHINE SULFATE [Concomitant]
     Active Substance: MORPHINE SULFATE
     Dosage: 15 MG, BID (EVERY 12 HOUR/15 MG, BID) (DOSE FORM: 245)
     Route: 048
     Dates: start: 20180213, end: 20180217
  809. MORPHINE SULFATE [Concomitant]
     Active Substance: MORPHINE SULFATE
     Dosage: 15 MILLIGRAM, TWO TIMES A DAY (CUMULATIVE DOSE: 17131.25 MG)
     Route: 048
     Dates: start: 20180213, end: 20180217
  810. MORPHINE SULFATE [Concomitant]
     Active Substance: MORPHINE SULFATE
     Dosage: 15 MG, BID (CUMULATIVE DOSE TO FIRST REACTION: 150 MG)
     Route: 048
     Dates: start: 20180213, end: 20180217
  811. MORPHINE SULFATE [Concomitant]
     Active Substance: MORPHINE SULFATE
     Dosage: 2.5 MILLIGRAM
     Dates: start: 20160828
  812. MORPHINE SULFATE [Concomitant]
     Active Substance: MORPHINE SULFATE
     Dosage: 2.5 MG
     Route: 048
     Dates: start: 20180628
  813. MORPHINE SULFATE [Concomitant]
     Active Substance: MORPHINE SULFATE
     Dosage: 15 MG, EVERY 12 HOURS
     Dates: start: 20180213, end: 20180217
  814. MORPHINE SULFATE [Concomitant]
     Active Substance: MORPHINE SULFATE
     Dosage: 2.5 MG
     Dates: start: 20180213, end: 20180217
  815. OSELTAMIVIR [Concomitant]
     Active Substance: OSELTAMIVIR
     Indication: Product used for unknown indication
     Dosage: 15 MILLIGRAM, BID
     Route: 048
     Dates: start: 20180213, end: 20180217
  816. OSELTAMIVIR [Concomitant]
     Active Substance: OSELTAMIVIR
     Dosage: 30 MG, QD (15 MG, BID)
     Route: 065
     Dates: start: 20180213, end: 20180217
  817. OSELTAMIVIR [Concomitant]
     Active Substance: OSELTAMIVIR
     Dosage: 15 MG, BID
     Route: 065
     Dates: start: 20180213, end: 20180217
  818. OSELTAMIVIR [Concomitant]
     Active Substance: OSELTAMIVIR
     Dosage: 15 MG
     Dates: start: 20180213, end: 20180217
  819. OSELTAMIVIR [Concomitant]
     Active Substance: OSELTAMIVIR
     Dosage: 15 MILLIGRAM, BID (START 13-FEB-2018)
     Route: 048
     Dates: end: 20180218
  820. OSELTAMIVIR [Concomitant]
     Active Substance: OSELTAMIVIR
     Dosage: 30 MILLIGRAM, QD
     Route: 048
     Dates: start: 20180213, end: 20180217
  821. OSELTAMIVIR [Concomitant]
     Active Substance: OSELTAMIVIR
     Dosage: 15 MG, BID (CUMULATIVE DOSE FOR FIRST REACTION: 21240.0 MG)
     Route: 048
     Dates: start: 20180213, end: 20180217
  822. OSELTAMIVIR [Concomitant]
     Active Substance: OSELTAMIVIR
     Dosage: 15 MG, BID (CUMULATIVE DOSE TO FIRST REACTION: 150 MG)
     Route: 048
     Dates: start: 20180213, end: 20180217
  823. OSELTAMIVIR [Concomitant]
     Active Substance: OSELTAMIVIR
     Dosage: 15 MG, BID (CUMULATIVE DOSE TO FIRST REACTION: 17131.25MG)
     Route: 048
     Dates: start: 20180213, end: 20180217
  824. OSELTAMIVIR [Concomitant]
     Active Substance: OSELTAMIVIR
     Dosage: 14 MG, EVERY 12 HOUR
     Route: 048
     Dates: start: 20180213, end: 20180217
  825. OSELTAMIVIR [Concomitant]
     Active Substance: OSELTAMIVIR
     Dosage: 15 MG, EVERY 1 DAY
     Dates: start: 20180213, end: 20180217
  826. OSELTAMIVIR [Concomitant]
     Active Substance: OSELTAMIVIR
     Dosage: 15 MG, BID
     Route: 048
     Dates: start: 20180218
  827. OSELTAMIVIR [Concomitant]
     Active Substance: OSELTAMIVIR
     Dosage: 30 MG, QD (15 MG, BID)
     Route: 048
     Dates: end: 20180218
  828. ACETAMINOPHEN [Concomitant]
     Active Substance: ACETAMINOPHEN
     Indication: Product used for unknown indication
     Dosage: 1 G
     Route: 048
     Dates: start: 20170903
  829. ACETAMINOPHEN [Concomitant]
     Active Substance: ACETAMINOPHEN
     Dosage: 5 G
     Route: 048
     Dates: start: 20160803
  830. ACETAMINOPHEN [Concomitant]
     Active Substance: ACETAMINOPHEN
     Dosage: 1 G, QD (CUMULATIVE DOSE FOR FIRST REACTION: 1279.0416 G)
     Route: 048
     Dates: start: 20160722, end: 20160724
  831. ACETAMINOPHEN [Concomitant]
     Active Substance: ACETAMINOPHEN
     Dosage: 1 MILLIGRAM
     Route: 048
     Dates: start: 20160723, end: 20160724
  832. ACETAMINOPHEN [Concomitant]
     Active Substance: ACETAMINOPHEN
     Dosage: 1 G
     Route: 048
     Dates: start: 20160803
  833. ACETAMINOPHEN [Concomitant]
     Active Substance: ACETAMINOPHEN
     Dosage: 1 MILLIGRAM
     Route: 048
     Dates: start: 20160723, end: 20160724
  834. ACETAMINOPHEN [Concomitant]
     Active Substance: ACETAMINOPHEN
     Dosage: 5 GRAM
     Dates: start: 20160803
  835. ACETAMINOPHEN [Concomitant]
     Active Substance: ACETAMINOPHEN
     Dosage: 1 G
     Route: 048
     Dates: start: 20170903
  836. ACETAMINOPHEN [Concomitant]
     Active Substance: ACETAMINOPHEN
     Dosage: 1 MG
     Dates: start: 20160723, end: 20160724
  837. ACETAMINOPHEN [Concomitant]
     Active Substance: ACETAMINOPHEN
     Dosage: 1 G
     Dates: start: 20160722, end: 20160724
  838. ACETAMINOPHEN [Concomitant]
     Active Substance: ACETAMINOPHEN
     Dosage: 1 G (CUMULATIVE DOSE TO FIRST REACTION: 3 G)
     Dates: start: 20170903
  839. ACETAMINOPHEN [Concomitant]
     Active Substance: ACETAMINOPHEN
     Dosage: 5 G (CUMULATIVE DOSE TO FIRST REACTION: 3 G)
     Dates: start: 20160803
  840. ACETAMINOPHEN [Concomitant]
     Active Substance: ACETAMINOPHEN
     Dosage: 1 MG ((CUMULATIVE DOSE TO FIRST REACTION: 3 G)
     Dates: start: 20160723, end: 20160724
  841. ACETAMINOPHEN [Concomitant]
     Active Substance: ACETAMINOPHEN
     Dosage: 1 G, QD (CUMULATIVE DOSE TO FIRST REACTION: 3 G)
     Route: 048
     Dates: start: 20160722, end: 20160724
  842. ACETAMINOPHEN [Concomitant]
     Active Substance: ACETAMINOPHEN
     Dosage: 5 G (CUMULATIVE DOSE TO FIRST REACTION: 3 G)
     Route: 048
     Dates: start: 20160803
  843. ACETAMINOPHEN [Concomitant]
     Active Substance: ACETAMINOPHEN
     Dosage: 5 G
     Route: 048
     Dates: start: 20160803
  844. ACETAMINOPHEN [Concomitant]
     Active Substance: ACETAMINOPHEN
     Dosage: 14 MG
  845. PIPERACILLIN SODIUM [Concomitant]
     Active Substance: PIPERACILLIN SODIUM
     Indication: Product used for unknown indication
     Dosage: 4.5 MG, TID (CUMULATIVE DOSE: 7980.5835 MG)
     Route: 065
     Dates: start: 20180212, end: 20180214
  846. PIPERACILLIN SODIUM [Concomitant]
     Active Substance: PIPERACILLIN SODIUM
     Dosage: 4.5 MG, TID
     Route: 065
     Dates: start: 20180212, end: 20180214
  847. PIPERACILLIN SODIUM [Concomitant]
     Active Substance: PIPERACILLIN SODIUM
     Dosage: 13.5 UNK, ONCE A DAY
     Dates: start: 20180212, end: 20180214
  848. PIPERACILLIN SODIUM [Concomitant]
     Active Substance: PIPERACILLIN SODIUM
     Dosage: 5 MG, TID
     Dates: start: 20180212, end: 20180214
  849. PIPERACILLIN SODIUM [Concomitant]
     Active Substance: PIPERACILLIN SODIUM
     Dosage: 5 MG (CUMULATIVE DOSE: 10635.0 MG)
     Dates: start: 20180212, end: 20180214
  850. PIPERACILLIN SODIUM [Concomitant]
     Active Substance: PIPERACILLIN SODIUM
     Dosage: 5 MG, CUMULATIVE DOSE TO FIRST REACTION: 8550.625 MG
     Dates: start: 20180212, end: 20180214
  851. PIPERACILLIN SODIUM [Concomitant]
     Active Substance: PIPERACILLIN SODIUM
     Dosage: 14 MG, TID (CUMULATIVE DOSE TO FIRST REACTION: 23941.75 MG)
     Dates: start: 20180212, end: 20180214
  852. PIPERACILLIN SODIUM [Concomitant]
     Active Substance: PIPERACILLIN SODIUM
     Dosage: 5 MG, EVERY 8 HOURS
     Dates: start: 20180212, end: 20180214
  853. PIPERACILLIN SODIUM [Concomitant]
     Active Substance: PIPERACILLIN SODIUM
     Dosage: 14 MG, EVERY 1 DAY
     Dates: start: 20180212, end: 20180214
  854. PIPERACILLIN SODIUM [Concomitant]
     Active Substance: PIPERACILLIN SODIUM
     Dosage: 4.5 MG, EVERY 1 DAY
     Dates: start: 20180212, end: 20180214
  855. PIPERACILLIN SODIUM [Concomitant]
     Active Substance: PIPERACILLIN SODIUM
     Dosage: 4.5 MG, TID (CUMULATIVE DOSE: 40.5 MG)
     Route: 065
     Dates: start: 20180212, end: 20180214
  856. RAMIPRIL [Concomitant]
     Active Substance: RAMIPRIL
     Indication: Product used for unknown indication
     Dosage: 2.3 MILLIGRAM, QD
     Route: 048
     Dates: start: 20160722
  857. RAMIPRIL [Concomitant]
     Active Substance: RAMIPRIL
     Dosage: 2.3 MG
     Route: 065
  858. RAMIPRIL [Concomitant]
     Active Substance: RAMIPRIL
     Dosage: 2 MG
  859. RAMIPRIL [Concomitant]
     Active Substance: RAMIPRIL
     Dosage: UNK
  860. RAMIPRIL [Concomitant]
     Active Substance: RAMIPRIL
     Dosage: UNK
     Dates: start: 20160722
  861. RAMIPRIL [Concomitant]
     Active Substance: RAMIPRIL
     Dosage: 2.3 MILLIGRAM, QD (CUMULATIVE DOSE TO FIRST REACTION: 1260.496 MG)
     Route: 048
     Dates: start: 20160722
  862. RAMIPRIL [Concomitant]
     Active Substance: RAMIPRIL
     Dosage: 2 MG;
     Dates: start: 20160722
  863. RANITIDINE [Concomitant]
     Active Substance: RANITIDINE
     Indication: Product used for unknown indication
     Dosage: 50 MG
     Route: 048
     Dates: start: 20170617, end: 20170618
  864. RANITIDINE [Concomitant]
     Active Substance: RANITIDINE
     Dosage: 50 MG (DOSE FORM: 245)
     Route: 048
     Dates: start: 20170617, end: 20170618
  865. RANITIDINE [Concomitant]
     Active Substance: RANITIDINE
     Indication: Product used for unknown indication
     Dosage: 50 MG
     Route: 048
     Dates: start: 20170617, end: 20170618
  866. ALBUTEROL [Concomitant]
     Active Substance: ALBUTEROL
     Indication: Product used for unknown indication
     Dosage: 2.5 MG
     Route: 055
     Dates: start: 20170616, end: 20170618
  867. ALBUTEROL [Concomitant]
     Active Substance: ALBUTEROL
     Dosage: 2.5 MG
     Dates: start: 20160822, end: 20160908
  868. ALBUTEROL [Concomitant]
     Active Substance: ALBUTEROL
     Dosage: 2.5 MG
     Route: 065
     Dates: start: 20160822, end: 20160908
  869. ALBUTEROL [Concomitant]
     Active Substance: ALBUTEROL
     Dosage: 3 MG
     Dates: start: 20160822, end: 20160908
  870. ALBUTEROL [Concomitant]
     Active Substance: ALBUTEROL
     Dosage: 3 MG
     Dates: start: 20170616, end: 20170618
  871. ALBUTEROL [Concomitant]
     Active Substance: ALBUTEROL
     Dosage: UNK
     Route: 055
     Dates: start: 20160822, end: 20160908
  872. ALBUTEROL [Concomitant]
     Active Substance: ALBUTEROL
     Dosage: 2.5 MG
     Route: 055
     Dates: start: 20170616
  873. ALBUTEROL [Concomitant]
     Active Substance: ALBUTEROL
     Dosage: UNK
     Dates: start: 20160822, end: 20160908
  874. ALBUTEROL [Concomitant]
     Active Substance: ALBUTEROL
     Dosage: 3 MG
     Dates: start: 20170616, end: 20170618
  875. ALBUTEROL [Concomitant]
     Active Substance: ALBUTEROL
     Dosage: 3 MG;
     Dates: start: 20170616, end: 20170618
  876. ALBUTEROL [Concomitant]
     Active Substance: ALBUTEROL
     Dosage: 3 MG
     Dates: start: 20160822, end: 20160908
  877. ALBUTEROL [Concomitant]
     Active Substance: ALBUTEROL
     Dosage: 2.5 MG
     Dates: start: 20170616, end: 20170618
  878. ALBUTEROL [Concomitant]
     Active Substance: ALBUTEROL
     Dosage: 2.5 MG
     Dates: start: 20160822, end: 20160908
  879. SODIUM CHLORIDE [Concomitant]
     Active Substance: SODIUM CHLORIDE
     Indication: Product used for unknown indication
     Dosage: 5 ML, EVERY 4 WEEKS
     Route: 055
     Dates: start: 20170616, end: 20170623
  880. SODIUM CHLORIDE [Concomitant]
     Active Substance: SODIUM CHLORIDE
     Dosage: 5 MILLILITER, Q4WK (CUMULATIVE DOSE: 58.75 ML)
     Route: 055
     Dates: start: 20170616, end: 20170623
  881. SODIUM CHLORIDE [Concomitant]
     Active Substance: SODIUM CHLORIDE
     Dosage: 5 MG, EVERY 4 WEEKS
     Dates: start: 20170616, end: 20170623
  882. SODIUM CHLORIDE [Concomitant]
     Active Substance: SODIUM CHLORIDE
     Dosage: 59 MG
     Dates: start: 20180212, end: 20180214
  883. SODIUM CHLORIDE [Concomitant]
     Active Substance: SODIUM CHLORIDE
     Dosage: 59 MG
     Dates: start: 20180105, end: 20180105
  884. SODIUM CHLORIDE [Concomitant]
     Active Substance: SODIUM CHLORIDE
     Dosage: UNK (CUMULATIVE DOSE TO FIRST REACTION: 5 ML)
     Route: 042
     Dates: end: 20180214
  885. SODIUM CHLORIDE [Concomitant]
     Active Substance: SODIUM CHLORIDE
     Dosage: 59 MG (50 MG;)
     Dates: start: 20180212, end: 20180214
  886. SODIUM CHLORIDE [Concomitant]
     Active Substance: SODIUM CHLORIDE
     Dosage: 58.75 ML (5ML)
     Dates: start: 20170616, end: 20170623
  887. SODIUM CHLORIDE [Concomitant]
     Active Substance: SODIUM CHLORIDE
     Dosage: 59 MG;
     Dates: start: 20180105, end: 20180105
  888. SODIUM CHLORIDE [Concomitant]
     Active Substance: SODIUM CHLORIDE
     Dosage: UNK (CUMULATIVE DOSE TO FIRST REACTION: 5 ML)
     Route: 042
     Dates: start: 20180105, end: 20180105
  889. SENNA LEAF [Concomitant]
     Active Substance: SENNA LEAF
     Indication: HER2 positive breast cancer
     Dosage: 15 MILLIGRAM, QD
     Route: 065
     Dates: start: 20160722, end: 20161011
  890. SENNA LEAF [Concomitant]
     Active Substance: SENNA LEAF
     Dosage: UNK
     Dates: start: 20160722
  891. SENNA [Concomitant]
     Active Substance: SENNA LEAF\SENNOSIDES\SENNOSIDES A AND B
     Indication: HER2 positive breast cancer
     Dosage: 15 MG, 1X/DAY (CUMULATIVE DOSE TO FIRST REACTION: 15 MG)
     Route: 048
     Dates: start: 20160722, end: 20161011
  892. SENNA [Concomitant]
     Active Substance: SENNA LEAF\SENNOSIDES\SENNOSIDES A AND B
     Dosage: 15 MG, 1X/DAY (CUMULATIVE DOSE TO FIRST REACTION: 15 MG)
     Route: 042
     Dates: start: 20160722, end: 20161011
  893. SENNA [Concomitant]
     Active Substance: SENNA LEAF\SENNOSIDES\SENNOSIDES A AND B
     Dosage: 15 MILLIGRAM, QD CUMULATIVE DOSE TO FIRST REACTION: 19185.625 MG)
     Route: 048
     Dates: start: 20160722, end: 20161011
  894. SENNA [Concomitant]
     Active Substance: SENNA LEAF\SENNOSIDES\SENNOSIDES A AND B
     Dosage: 15 MG
     Dates: start: 20160722, end: 20161011
  895. SULFAMETHOXAZOLE\TRIMETHOPRIM [Concomitant]
     Active Substance: SULFAMETHOXAZOLE\TRIMETHOPRIM
     Indication: Product used for unknown indication
     Dosage: 2112 MG
     Route: 042
     Dates: start: 20160811, end: 20160816
  896. SODIUM CHLORIDE [Concomitant]
     Active Substance: SODIUM CHLORIDE
     Indication: Product used for unknown indication
     Dosage: 58.75 MILLILITER (START 12-FEB-2018)
     Route: 055
     Dates: start: 20170616, end: 20170623
  897. SODIUM CHLORIDE [Concomitant]
     Active Substance: SODIUM CHLORIDE
     Dosage: 58.75 MILLILITER (START 12-FEB-2018)
     Route: 042
     Dates: start: 20180212, end: 20180214
  898. SODIUM CHLORIDE [Concomitant]
     Active Substance: SODIUM CHLORIDE
     Dosage: 5 ML, Q4W
     Route: 055
     Dates: start: 20170616, end: 20170623
  899. SODIUM CHLORIDE [Concomitant]
     Active Substance: SODIUM CHLORIDE
     Dosage: 58.75 MILLILITER (START 05-JAN-2018)
     Route: 048
     Dates: start: 20180105, end: 20180105
  900. SODIUM CHLORIDE [Concomitant]
     Active Substance: SODIUM CHLORIDE
     Dosage: 5 MG, Q4WEEKS
     Dates: start: 20170616, end: 20170623
  901. SODIUM CHLORIDE [Concomitant]
     Active Substance: SODIUM CHLORIDE
     Dosage: 59 MG
     Dates: start: 20180105, end: 20180105
  902. SODIUM CHLORIDE [Concomitant]
     Active Substance: SODIUM CHLORIDE
     Dosage: 59 MG
     Dates: start: 20180212, end: 20180214
  903. SODIUM CHLORIDE [Concomitant]
     Active Substance: SODIUM CHLORIDE
     Dosage: 5 MG (CUMULATIVE DOSE: 169.6503 MG)
     Dates: start: 20170616, end: 20170623
  904. SODIUM CHLORIDE [Concomitant]
     Active Substance: SODIUM CHLORIDE
     Dosage: 59 MG (CUMULATIVE DOSE: 56052.457 MG)
     Route: 048
     Dates: start: 20170616, end: 20170623
  905. SODIUM CHLORIDE [Concomitant]
     Active Substance: SODIUM CHLORIDE
     Dosage: 58.75 MG
     Route: 042
     Dates: start: 20180212, end: 20180214
  906. SODIUM CHLORIDE [Concomitant]
     Active Substance: SODIUM CHLORIDE
     Dosage: 58.75 MILLIGRAM
     Dates: start: 20180105, end: 20180105
  907. SODIUM CHLORIDE [Concomitant]
     Active Substance: SODIUM CHLORIDE
     Dosage: 59 MG,QD, CUMULATIVE DOSE TO FIRST REACTION: 19411.0 MG
     Dates: start: 20170616, end: 20170623
  908. SODIUM CHLORIDE [Concomitant]
     Active Substance: SODIUM CHLORIDE
     Dosage: 59 MG, CUMULATIVE DOSE TO FIRST REACTION: 33632.457 MG
     Route: 048
     Dates: start: 20180212, end: 20180214
  909. SODIUM CHLORIDE [Concomitant]
     Active Substance: SODIUM CHLORIDE
     Dosage: 59 MG, QD, CUMULATIVE DOSE TO FIRST REACTION: 31390.459 MG
     Route: 048
     Dates: start: 20180105, end: 20180105
  910. SODIUM CHLORIDE [Concomitant]
     Active Substance: SODIUM CHLORIDE
     Dosage: 59 MG
     Route: 048
     Dates: start: 20180105, end: 20180105
  911. SODIUM CHLORIDE [Concomitant]
     Active Substance: SODIUM CHLORIDE
     Dosage: 59 MG
     Route: 048
     Dates: start: 20180212, end: 20180214
  912. SODIUM CHLORIDE [Concomitant]
     Active Substance: SODIUM CHLORIDE
     Dosage: 5 MG
     Route: 048
     Dates: start: 20170616, end: 20170623
  913. SODIUM CHLORIDE [Concomitant]
     Active Substance: SODIUM CHLORIDE
     Dosage: 58.75 MILLILITER (START 16-JUN-2017)
     Route: 042
     Dates: start: 20170616, end: 20170616
  914. SODIUM CHLORIDE [Concomitant]
     Active Substance: SODIUM CHLORIDE
     Dosage: 58.75 MILLILITER (START 16-JUN-2017)
     Route: 042
     Dates: start: 20170616, end: 20170623
  915. SODIUM CHLORIDE [Concomitant]
     Active Substance: SODIUM CHLORIDE
     Dosage: 5 ML (CUMULATIVE DOSE FOR FIRST REACTION: 678.6012 ML)
     Dates: start: 20170616, end: 20170623
  916. SODIUM CHLORIDE [Concomitant]
     Active Substance: SODIUM CHLORIDE
     Dosage: 58.75 MILLIGRAM
     Dates: start: 20180105, end: 20180105
  917. SODIUM CHLORIDE [Concomitant]
     Active Substance: SODIUM CHLORIDE
     Dosage: 58.75 MG
     Dates: start: 20180212, end: 20180214
  918. SODIUM CHLORIDE [Concomitant]
     Active Substance: SODIUM CHLORIDE
     Dosage: 5 MG, Q4WK
     Dates: start: 20170616, end: 20170623
  919. SODIUM CHLORIDE [Concomitant]
     Active Substance: SODIUM CHLORIDE
     Dosage: UNK, CUMULATIVE DOSE TO FIRST REACTION: 5 ML
     Route: 042
  920. SODIUM CHLORIDE [Concomitant]
     Active Substance: SODIUM CHLORIDE
     Dosage: 58.75 MILLILITER (START 16-JUN-2017) ( CUMULATIVE DOSE TO FIRST REACTION: 5 ML)
     Route: 042
     Dates: end: 20170616
  921. SODIUM CHLORIDE [Concomitant]
     Active Substance: SODIUM CHLORIDE
     Dosage: 5 MILLILITER, QW (EVERY 4 WEEK) (START 16-JUN-2017)
     Dates: end: 20170623
  922. SODIUM CHLORIDE [Concomitant]
     Active Substance: SODIUM CHLORIDE
     Dosage: UNK (START 12-FEB-2018), CUMULATIVE DOSE TO FIRST REACTION: 5 ML
     Route: 042
     Dates: start: 20180214
  923. SODIUM CHLORIDE [Concomitant]
     Active Substance: SODIUM CHLORIDE
     Dosage: 58.75 MILLILITER (START 12-FEB-2018) (CUMULATIVE DOSE TO FIRST REACTION: 5 ML)
     Route: 042
     Dates: start: 20180212, end: 20180214
  924. SODIUM CHLORIDE [Concomitant]
     Active Substance: SODIUM CHLORIDE
     Dosage: 58.75 MILLILITER (START 05-JAN-2018) (CUMULATIVE DOSE TO FIRST REACTION: 5 ML)
     Route: 042
     Dates: start: 20180105, end: 20180105
  925. SODIUM CHLORIDE [Concomitant]
     Active Substance: SODIUM CHLORIDE
     Dosage: 58.75 MILLILITER (START 16-JUN-2017) (CUMULATIVE DOSE TO FIRST REACTION: 5 ML)
     Route: 042
     Dates: start: 20170616, end: 20170623
  926. SODIUM CHLORIDE [Concomitant]
     Active Substance: SODIUM CHLORIDE
     Dosage: 59 MG
     Dates: start: 20180212, end: 20180214
  927. SODIUM CHLORIDE [Concomitant]
     Active Substance: SODIUM CHLORIDE
     Dosage: 58.75 MILLILITER (START 05-JAN-2018)
     Dates: start: 20160616, end: 20160623
  928. SODIUM CHLORIDE [Concomitant]
     Active Substance: SODIUM CHLORIDE
     Dosage: UNK
     Route: 042
     Dates: start: 20180212, end: 20180214
  929. SODIUM CHLORIDE [Concomitant]
     Active Substance: SODIUM CHLORIDE
     Dosage: 58.75 ML, Q4WEEKS ((CUMULATIVE DOSE TO FIRST REACTION: 1993.391 ML)
     Route: 042
     Dates: start: 20170616, end: 20170623
  930. PIPERACILLIN SODIUM\TAZOBACTAM SODIUM [Concomitant]
     Active Substance: PIPERACILLIN SODIUM\TAZOBACTAM SODIUM
     Indication: Product used for unknown indication
     Dosage: 13.5 GRAM(13.5 G), START 12-FEB-2018
     Route: 048
     Dates: start: 20180212, end: 20180214
  931. PIPERACILLIN SODIUM\TAZOBACTAM SODIUM [Concomitant]
     Active Substance: PIPERACILLIN SODIUM\TAZOBACTAM SODIUM
     Dosage: 13.5 MILLIGRAM, TID
     Route: 048
     Dates: start: 20180212, end: 20180214
  932. PIPERACILLIN SODIUM\TAZOBACTAM SODIUM [Concomitant]
     Active Substance: PIPERACILLIN SODIUM\TAZOBACTAM SODIUM
     Dosage: 14 MG, TID (CUMULATIVE DOSE TO FIRST REACTION: 23941.75 MG)
     Dates: start: 20180212, end: 20180214
  933. PIPERACILLIN SODIUM\TAZOBACTAM SODIUM [Concomitant]
     Active Substance: PIPERACILLIN SODIUM\TAZOBACTAM SODIUM
     Dosage: 5 MG, Q8HR
     Dates: start: 20180212, end: 20180214
  934. PIPERACILLIN SODIUM\TAZOBACTAM SODIUM [Concomitant]
     Active Substance: PIPERACILLIN SODIUM\TAZOBACTAM SODIUM
     Dosage: 13.5 MILLIGRAM, TID PER 0.33 DAY
     Dates: start: 20180212, end: 20180214
  935. PIPERACILLIN SODIUM\TAZOBACTAM SODIUM [Concomitant]
     Active Substance: PIPERACILLIN SODIUM\TAZOBACTAM SODIUM
     Dosage: 13.5 GRAM(13.5 G), START 12-FEB-2018
     Route: 048
     Dates: start: 20180212, end: 20180214
  936. PIPERACILLIN SODIUM\TAZOBACTAM SODIUM [Concomitant]
     Active Substance: PIPERACILLIN SODIUM\TAZOBACTAM SODIUM
     Dosage: 4.5 MILLIGRAM, TID
     Dates: start: 20180212, end: 20180214
  937. PIPERACILLIN SODIUM\TAZOBACTAM SODIUM [Concomitant]
     Active Substance: PIPERACILLIN SODIUM\TAZOBACTAM SODIUM
     Dosage: 13.5 GRAM(13.5 G), START 12-FEB-2018 (CUMULATIVE DOSE TO FIRST REACTION: 40.5 MG)
     Route: 048
     Dates: end: 20180214
  938. PIPERACILLIN SODIUM\TAZOBACTAM SODIUM [Concomitant]
     Active Substance: PIPERACILLIN SODIUM\TAZOBACTAM SODIUM
     Dosage: 4.5 MILLIGRAM (4.5 MILLIGRAM 3/D) (START 12-FEB-2018)(CUMULATIVE DOSE TO FIRST REACTION: 40.5 MG)
     Dates: start: 20180212, end: 20180214
  939. PIPERACILLIN SODIUM\TAZOBACTAM SODIUM [Concomitant]
     Active Substance: PIPERACILLIN SODIUM\TAZOBACTAM SODIUM
     Dosage: 4.5 MILLIGRAM (4.5 MILLIGRAM 3/D) (START 12-FEB-2018)(CUMULATIVE DOSE TO FIRST REACTION: 40.5 MG)
     Dates: end: 20180214
  940. PIPERACILLIN SODIUM\TAZOBACTAM SODIUM [Concomitant]
     Active Substance: PIPERACILLIN SODIUM\TAZOBACTAM SODIUM
     Dosage: 14 MG
     Dates: start: 20180212, end: 20180214
  941. PIPERACILLIN SODIUM\TAZOBACTAM SODIUM [Concomitant]
     Active Substance: PIPERACILLIN SODIUM\TAZOBACTAM SODIUM
     Dosage: 4.5 MG, TID, 3 TIMES PER DAY (CUMULATIVE DOSE TO FIRST REACTION: 9571.5 MG)
     Route: 065
     Dates: start: 20180212, end: 20180214
  942. TAMOXIFEN [Concomitant]
     Active Substance: TAMOXIFEN
     Dosage: UNK; ;
  943. TRIMETHOPRIM [Concomitant]
     Active Substance: TRIMETHOPRIM
     Indication: Product used for unknown indication
     Dosage: 2112 MG, TID (0.33 PER DAY), 50 MILLIGRAM, TID (START 02-SEP-2017)
     Route: 042
     Dates: start: 20160811, end: 20160816
  944. TRIMETHOPRIM [Concomitant]
     Active Substance: TRIMETHOPRIM
     Dosage: 50 MILLIGRAM, TID (0.33 PER DAY)
     Route: 065
     Dates: start: 20170902
  945. TRIMETHOPRIM [Concomitant]
     Active Substance: TRIMETHOPRIM
     Dosage: 483 MG, QD (DOSE FORM:245)
     Route: 048
     Dates: start: 20180131, end: 20180131
  946. TRIMETHOPRIM [Concomitant]
     Active Substance: TRIMETHOPRIM
     Dosage: 2112 MG; (DOSE FORM: 245)
     Route: 042
     Dates: start: 20160811, end: 20160816
  947. TRIMETHOPRIM [Concomitant]
     Active Substance: TRIMETHOPRIM
     Dosage: 50 MG, TID (DOSE FORM: 245)
     Route: 065
     Dates: start: 20170902
  948. TRIMETHOPRIM [Concomitant]
     Active Substance: TRIMETHOPRIM
     Dosage: 50 MG (CUMULATIVE DOSE: 61050MG)
     Dates: start: 20170902
  949. TRIMETHOPRIM [Concomitant]
     Active Substance: TRIMETHOPRIM
     Dosage: 483 MG (CUMULATIVE DOSE: 269534.12MG)
     Dates: start: 20180131, end: 20180131
  950. TRIMETHOPRIM [Concomitant]
     Active Substance: TRIMETHOPRIM
     Dosage: 2112 MG (CUMULATIVE DOSE: 126720MG)
     Dates: start: 20160811, end: 20160816
  951. TRIMETHOPRIM [Concomitant]
     Active Substance: TRIMETHOPRIM
     Dosage: 150MG EVERY 1 DAY (CUMULATIVE DOSE TO FIRST REACTION: 130806.25 MG), 50 MILLIGRAM, TID (START 02-SEP
     Route: 065
     Dates: start: 20170902
  952. TRIMETHOPRIM [Concomitant]
     Active Substance: TRIMETHOPRIM
     Dosage: 2112 MG, TID
     Dates: start: 20160811, end: 20160816
  953. TRIMETHOPRIM [Concomitant]
     Active Substance: TRIMETHOPRIM
     Dosage: 50 MILLIGRAM, TID (START 02-SEP-2017)
     Dates: start: 20170902
  954. TRIMETHOPRIM [Concomitant]
     Active Substance: TRIMETHOPRIM
     Dosage: 2112 MILLIGRAM, START 11-AUG-2016
     Route: 042
     Dates: start: 20160811
  955. TRIMETHOPRIM [Concomitant]
     Active Substance: TRIMETHOPRIM
     Dosage: 50 MILLIGRAM, TID (START 02-SEP-2017)
     Dates: start: 20160816
  956. TRIMETHOPRIM [Concomitant]
     Active Substance: TRIMETHOPRIM
     Dosage: 2212 MG, ONCE EVERY 8 HR
     Dates: start: 20160811, end: 20160816
  957. TRIMETHOPRIM [Concomitant]
     Active Substance: TRIMETHOPRIM
     Dosage: 483 MG, QD
     Dates: start: 20180131, end: 20180131
  958. VANCOMYCIN [Concomitant]
     Active Substance: VANCOMYCIN
     Indication: Product used for unknown indication
     Dosage: UNK, DAILY
     Route: 048
     Dates: start: 20181009, end: 20181009
  959. VANCOMYCIN [Concomitant]
     Active Substance: VANCOMYCIN
     Dosage: UNK MG QD;
     Route: 048
     Dates: start: 20161009, end: 20161009
  960. VANCOMYCIN [Concomitant]
     Active Substance: VANCOMYCIN
     Dosage: UNK
     Dates: start: 20181009, end: 20181009
  961. VANCOMYCIN [Concomitant]
     Active Substance: VANCOMYCIN
     Dosage: UNK MG
     Dates: start: 20161009, end: 20161009
  962. ZOPICLONE [Concomitant]
     Active Substance: ZOPICLONE
     Indication: Product used for unknown indication
     Dosage: 3.75 MG
     Route: 048
     Dates: start: 20170618, end: 20170619
  963. ZOPICLONE [Concomitant]
     Active Substance: ZOPICLONE
     Dosage: 3.75 MG (DOSE FORM: 245)
     Route: 048
     Dates: start: 20170618, end: 20170619
  964. ZOPICLONE [Concomitant]
     Active Substance: ZOPICLONE
     Dosage: 4 MG
     Route: 048
     Dates: start: 20170618, end: 20170619
  965. ZOPICLONE [Concomitant]
     Active Substance: ZOPICLONE
     Dosage: 4 MG; (DOSE FORM: 245)
     Route: 048
     Dates: start: 20170618, end: 20170619
  966. ZOPICLONE [Concomitant]
     Active Substance: ZOPICLONE
     Dosage: 4 MG
     Dates: start: 20170618, end: 20170619
  967. ZOPICLONE [Concomitant]
     Active Substance: ZOPICLONE
     Dosage: UNK
     Dates: start: 20160618, end: 20170619
  968. ZOPICLONE [Concomitant]
     Active Substance: ZOPICLONE
     Indication: Product used for unknown indication
     Dosage: 3.75 MILLIGRAM (PHARMACEUTICAL DOSE FORM: 245)
     Route: 048
     Dates: start: 20170618, end: 20170619
  969. ZOPICLONE [Concomitant]
     Active Substance: ZOPICLONE
     Dosage: 3.75 MG
     Route: 048
     Dates: start: 20170618, end: 20170619
  970. ZOPICLONE [Concomitant]
     Active Substance: ZOPICLONE
     Dosage: 4 MG
     Route: 048
     Dates: start: 20170618, end: 20170619
  971. AMOXICILLIN\CLAVULANATE POTASSIUM [Concomitant]
     Active Substance: AMOXICILLIN\CLAVULANATE POTASSIUM
     Indication: Product used for unknown indication
     Dosage: 625 MG
     Dates: start: 20180215, end: 20180301
  972. AMOXICILLIN\CLAVULANATE POTASSIUM [Concomitant]
     Active Substance: AMOXICILLIN\CLAVULANATE POTASSIUM
     Dosage: 2 G, EVERY 1 DAY
     Dates: start: 20180214, end: 20180301
  973. AMOXICILLIN\CLAVULANATE POTASSIUM [Concomitant]
     Active Substance: AMOXICILLIN\CLAVULANATE POTASSIUM
     Dosage: 1875 MG, EVERY 1 DAY
     Dates: start: 20180214, end: 20180214
  974. AMOXICILLIN\CLAVULANATE POTASSIUM [Concomitant]
     Active Substance: AMOXICILLIN\CLAVULANATE POTASSIUM
     Dosage: 5 MG, EVERY 12 HOURS
     Dates: start: 20180214
  975. AMOXICILLIN\CLAVULANATE POTASSIUM [Concomitant]
     Active Substance: AMOXICILLIN\CLAVULANATE POTASSIUM
     Dosage: 625 MG, EVERY 8 HOURS
     Dates: start: 20180301

REACTIONS (50)
  - Excessive eye blinking [Fatal]
  - Excessive eye blinking [Fatal]
  - Hyponatraemia [Fatal]
  - Hyponatraemia [Fatal]
  - Hyponatraemia [Fatal]
  - Hyponatraemia [Fatal]
  - Pain in jaw [Fatal]
  - Pain in jaw [Fatal]
  - Pain in jaw [Fatal]
  - Deep vein thrombosis [Fatal]
  - Condition aggravated [Fatal]
  - Condition aggravated [Fatal]
  - Chest pain [Fatal]
  - Chest pain [Fatal]
  - Chest pain [Fatal]
  - Chest pain [Fatal]
  - Diarrhoea [Fatal]
  - Diarrhoea [Fatal]
  - Nausea [Fatal]
  - Nausea [Fatal]
  - Nausea [Fatal]
  - Nausea [Fatal]
  - Nausea [Fatal]
  - Nausea [Fatal]
  - Nausea [Fatal]
  - Vomiting [Fatal]
  - Vomiting [Fatal]
  - Vomiting [Fatal]
  - Vomiting [Fatal]
  - Vomiting [Fatal]
  - Seizure [Fatal]
  - Back pain [Fatal]
  - Back pain [Fatal]
  - Back pain [Fatal]
  - Dyspnoea [Fatal]
  - Ejection fraction decreased [Fatal]
  - Lower respiratory tract infection [Fatal]
  - Lower respiratory tract infection [Fatal]
  - Lower respiratory tract infection [Fatal]
  - Lower respiratory tract infection [Fatal]
  - Lower respiratory tract infection [Fatal]
  - Pneumonia [Fatal]
  - Pneumonia [Fatal]
  - Pneumonia [Fatal]
  - Disease progression [Fatal]
  - Off label use [Fatal]
  - Off label use [Fatal]
  - Intentional product use issue [Fatal]
  - Vomiting [Not Recovered/Not Resolved]
  - Nausea [Recovered/Resolved]

NARRATIVE: CASE EVENT DATE: 20160722
